FAERS Safety Report 25155823 (Version 3)
Quarter: 2025Q3

REPORT INFORMATION
  Report Type: Spontaneous
  Country: CA (occurrence: CA)
  Receive Date: 20250403
  Receipt Date: 20250917
  Transmission Date: 20251021
  Serious: Yes (Death, Life-Threatening, Hospitalization, Disabling, Congenital Anomaly, Other)
  Sender: MYLAN
  Company Number: CA-MYLANLABS-2025M1014334

PATIENT
  Age: 44 Year
  Sex: Female
  Weight: 96 kg

DRUGS (2016)
  1. LYRICA [Suspect]
     Active Substance: PREGABALIN
     Indication: Product used for unknown indication
  2. LYRICA [Suspect]
     Active Substance: PREGABALIN
     Route: 065
  3. LYRICA [Suspect]
     Active Substance: PREGABALIN
     Route: 065
  4. LYRICA [Suspect]
     Active Substance: PREGABALIN
  5. MORPHINE [Suspect]
     Active Substance: MORPHINE
     Indication: Product used for unknown indication
  6. MORPHINE [Suspect]
     Active Substance: MORPHINE
     Route: 065
  7. MORPHINE [Suspect]
     Active Substance: MORPHINE
     Route: 065
  8. MORPHINE [Suspect]
     Active Substance: MORPHINE
  9. CELECOXIB [Suspect]
     Active Substance: CELECOXIB
     Indication: Product used for unknown indication
     Route: 065
  10. CELECOXIB [Suspect]
     Active Substance: CELECOXIB
  11. CELECOXIB [Suspect]
     Active Substance: CELECOXIB
  12. CELECOXIB [Suspect]
     Active Substance: CELECOXIB
     Route: 065
  13. CELECOXIB [Suspect]
     Active Substance: CELECOXIB
     Route: 058
  14. CELECOXIB [Suspect]
     Active Substance: CELECOXIB
  15. CELECOXIB [Suspect]
     Active Substance: CELECOXIB
  16. CELECOXIB [Suspect]
     Active Substance: CELECOXIB
     Route: 058
  17. CELECOXIB [Suspect]
     Active Substance: CELECOXIB
     Dosage: 1 DOSAGE FORM, QD (1 EVERY 1 DAYS)
  18. CELECOXIB [Suspect]
     Active Substance: CELECOXIB
     Dosage: 1 DOSAGE FORM, QD (1 EVERY 1 DAYS)
  19. CELECOXIB [Suspect]
     Active Substance: CELECOXIB
     Dosage: 1 DOSAGE FORM, QD (1 EVERY 1 DAYS)
     Route: 065
  20. CELECOXIB [Suspect]
     Active Substance: CELECOXIB
     Dosage: 1 DOSAGE FORM, QD (1 EVERY 1 DAYS)
     Route: 065
  21. CELECOXIB [Suspect]
     Active Substance: CELECOXIB
     Dosage: 2 DOSAGE FORM, QD (1 EVERY 1 DY)
  22. CELECOXIB [Suspect]
     Active Substance: CELECOXIB
     Dosage: 2 DOSAGE FORM, QD (1 EVERY 1 DY)
  23. CELECOXIB [Suspect]
     Active Substance: CELECOXIB
     Dosage: 2 DOSAGE FORM, QD (1 EVERY 1 DY)
     Route: 048
  24. CELECOXIB [Suspect]
     Active Substance: CELECOXIB
     Dosage: 2 DOSAGE FORM, QD (1 EVERY 1 DY)
     Route: 048
  25. CELEBREX [Suspect]
     Active Substance: CELECOXIB
     Indication: Arthritis
     Dosage: UNK, QD (1 EVERY 1 DAY)
  26. CELEBREX [Suspect]
     Active Substance: CELECOXIB
     Dosage: UNK, QD (1 EVERY 1 DAY)
     Route: 058
  27. CELEBREX [Suspect]
     Active Substance: CELECOXIB
     Dosage: UNK, QD (1 EVERY 1 DAY)
     Route: 058
  28. CELEBREX [Suspect]
     Active Substance: CELECOXIB
     Dosage: UNK, QD (1 EVERY 1 DAY)
  29. CELEBREX [Suspect]
     Active Substance: CELECOXIB
     Indication: Arthritis
     Dosage: UNK, QD (1 EVERY 1 DAY)
  30. CELEBREX [Suspect]
     Active Substance: CELECOXIB
     Dosage: UNK, QD (1 EVERY 1 DAY)
  31. CELEBREX [Suspect]
     Active Substance: CELECOXIB
     Dosage: UNK, QD (1 EVERY 1 DAY)
     Route: 048
  32. CELEBREX [Suspect]
     Active Substance: CELECOXIB
     Dosage: UNK, QD (1 EVERY 1 DAY)
     Route: 048
  33. CELEBREX [Suspect]
     Active Substance: CELECOXIB
     Dosage: 1 DOSAGE FORM, QD (1 EVERY 1 DAY)
  34. CELEBREX [Suspect]
     Active Substance: CELECOXIB
     Dosage: 1 DOSAGE FORM, QD (1 EVERY 1 DAY)
  35. CELEBREX [Suspect]
     Active Substance: CELECOXIB
     Dosage: 1 DOSAGE FORM, QD (1 EVERY 1 DAY)
     Route: 048
  36. CELEBREX [Suspect]
     Active Substance: CELECOXIB
     Dosage: 1 DOSAGE FORM, QD (1 EVERY 1 DAY)
     Route: 048
  37. CELEBREX [Suspect]
     Active Substance: CELECOXIB
     Dosage: 2 DOSAGE FORM, QD (1 EVERY 1 DAY)
  38. CELEBREX [Suspect]
     Active Substance: CELECOXIB
     Dosage: 2 DOSAGE FORM, QD (1 EVERY 1 DAY)
     Route: 048
  39. CELEBREX [Suspect]
     Active Substance: CELECOXIB
     Dosage: 2 DOSAGE FORM, QD (1 EVERY 1 DAY)
  40. CELEBREX [Suspect]
     Active Substance: CELECOXIB
     Dosage: 2 DOSAGE FORM, QD (1 EVERY 1 DAY)
     Route: 048
  41. CELECOXIB [Suspect]
     Active Substance: CELECOXIB
     Indication: Product used for unknown indication
     Dosage: 1 DOSAGE FORM, QD (1 EVERY 1 DAY)
  42. CELECOXIB [Suspect]
     Active Substance: CELECOXIB
     Dosage: 1 DOSAGE FORM, QD (1 EVERY 1 DAY)
     Route: 065
  43. CELECOXIB [Suspect]
     Active Substance: CELECOXIB
     Dosage: 1 DOSAGE FORM, QD (1 EVERY 1 DAY)
     Route: 065
  44. CELECOXIB [Suspect]
     Active Substance: CELECOXIB
     Dosage: 1 DOSAGE FORM, QD (1 EVERY 1 DAY)
  45. CELECOXIB [Suspect]
     Active Substance: CELECOXIB
  46. CELECOXIB [Suspect]
     Active Substance: CELECOXIB
     Route: 065
  47. CELECOXIB [Suspect]
     Active Substance: CELECOXIB
  48. CELECOXIB [Suspect]
     Active Substance: CELECOXIB
     Route: 065
  49. CELECOXIB [Suspect]
     Active Substance: CELECOXIB
     Route: 065
  50. CELECOXIB [Suspect]
     Active Substance: CELECOXIB
     Route: 065
  51. CELECOXIB [Suspect]
     Active Substance: CELECOXIB
  52. CELECOXIB [Suspect]
     Active Substance: CELECOXIB
  53. VITAMIN C [Suspect]
     Active Substance: ASCORBIC ACID
     Indication: Product used for unknown indication
  54. VITAMIN C [Suspect]
     Active Substance: ASCORBIC ACID
     Route: 065
  55. VITAMIN C [Suspect]
     Active Substance: ASCORBIC ACID
     Route: 065
  56. VITAMIN C [Suspect]
     Active Substance: ASCORBIC ACID
  57. ACETAMINOPHEN\CODEINE PHOSPHATE [Suspect]
     Active Substance: ACETAMINOPHEN\CODEINE PHOSPHATE
     Indication: Product used for unknown indication
  58. ACETAMINOPHEN\CODEINE PHOSPHATE [Suspect]
     Active Substance: ACETAMINOPHEN\CODEINE PHOSPHATE
     Route: 065
  59. ACETAMINOPHEN\CODEINE PHOSPHATE [Suspect]
     Active Substance: ACETAMINOPHEN\CODEINE PHOSPHATE
     Route: 065
  60. ACETAMINOPHEN\CODEINE PHOSPHATE [Suspect]
     Active Substance: ACETAMINOPHEN\CODEINE PHOSPHATE
  61. ACETAMINOPHEN [Suspect]
     Active Substance: ACETAMINOPHEN
     Indication: Product used for unknown indication
  62. ACETAMINOPHEN [Suspect]
     Active Substance: ACETAMINOPHEN
  63. ACETAMINOPHEN [Suspect]
     Active Substance: ACETAMINOPHEN
     Route: 065
  64. ACETAMINOPHEN [Suspect]
     Active Substance: ACETAMINOPHEN
     Route: 065
  65. ACETAMINOPHEN [Suspect]
     Active Substance: ACETAMINOPHEN
     Route: 065
  66. ACETAMINOPHEN [Suspect]
     Active Substance: ACETAMINOPHEN
     Route: 065
  67. ACETAMINOPHEN [Suspect]
     Active Substance: ACETAMINOPHEN
  68. ACETAMINOPHEN [Suspect]
     Active Substance: ACETAMINOPHEN
  69. ACETAMINOPHEN [Suspect]
     Active Substance: ACETAMINOPHEN
     Route: 016
  70. ACETAMINOPHEN [Suspect]
     Active Substance: ACETAMINOPHEN
     Route: 016
  71. ACETAMINOPHEN [Suspect]
     Active Substance: ACETAMINOPHEN
  72. ACETAMINOPHEN [Suspect]
     Active Substance: ACETAMINOPHEN
  73. ACETAMINOPHEN [Suspect]
     Active Substance: ACETAMINOPHEN
  74. ACETAMINOPHEN [Suspect]
     Active Substance: ACETAMINOPHEN
  75. ACETAMINOPHEN [Suspect]
     Active Substance: ACETAMINOPHEN
     Route: 065
  76. ACETAMINOPHEN [Suspect]
     Active Substance: ACETAMINOPHEN
     Route: 065
  77. ACTEMRA [Suspect]
     Active Substance: TOCILIZUMAB
     Indication: Rheumatoid arthritis
  78. ACTEMRA [Suspect]
     Active Substance: TOCILIZUMAB
  79. ACTEMRA [Suspect]
     Active Substance: TOCILIZUMAB
     Route: 058
  80. ACTEMRA [Suspect]
     Active Substance: TOCILIZUMAB
     Route: 058
  81. ACTEMRA [Suspect]
     Active Substance: TOCILIZUMAB
     Route: 042
  82. ACTEMRA [Suspect]
     Active Substance: TOCILIZUMAB
     Route: 042
  83. ACTEMRA [Suspect]
     Active Substance: TOCILIZUMAB
  84. ACTEMRA [Suspect]
     Active Substance: TOCILIZUMAB
  85. ACTEMRA [Suspect]
     Active Substance: TOCILIZUMAB
     Route: 065
  86. ACTEMRA [Suspect]
     Active Substance: TOCILIZUMAB
  87. ACTEMRA [Suspect]
     Active Substance: TOCILIZUMAB
  88. ACTEMRA [Suspect]
     Active Substance: TOCILIZUMAB
     Route: 065
  89. ACTEMRA [Suspect]
     Active Substance: TOCILIZUMAB
     Route: 065
  90. ACTEMRA [Suspect]
     Active Substance: TOCILIZUMAB
     Route: 065
  91. ACTEMRA [Suspect]
     Active Substance: TOCILIZUMAB
  92. ACTEMRA [Suspect]
     Active Substance: TOCILIZUMAB
  93. ACTEMRA [Suspect]
     Active Substance: TOCILIZUMAB
  94. ACTEMRA [Suspect]
     Active Substance: TOCILIZUMAB
  95. ACTEMRA [Suspect]
     Active Substance: TOCILIZUMAB
     Route: 042
  96. ACTEMRA [Suspect]
     Active Substance: TOCILIZUMAB
     Route: 042
  97. ACTEMRA [Suspect]
     Active Substance: TOCILIZUMAB
     Route: 042
  98. ACTEMRA [Suspect]
     Active Substance: TOCILIZUMAB
  99. ACTEMRA [Suspect]
     Active Substance: TOCILIZUMAB
  100. ACTEMRA [Suspect]
     Active Substance: TOCILIZUMAB
     Route: 042
  101. ACTEMRA [Suspect]
     Active Substance: TOCILIZUMAB
     Route: 042
  102. ACTEMRA [Suspect]
     Active Substance: TOCILIZUMAB
     Route: 042
  103. ACTEMRA [Suspect]
     Active Substance: TOCILIZUMAB
  104. ACTEMRA [Suspect]
     Active Substance: TOCILIZUMAB
  105. ACTEMRA [Suspect]
     Active Substance: TOCILIZUMAB
     Indication: Rheumatoid arthritis
     Route: 042
  106. ACTEMRA [Suspect]
     Active Substance: TOCILIZUMAB
  107. ACTEMRA [Suspect]
     Active Substance: TOCILIZUMAB
  108. ACTEMRA [Suspect]
     Active Substance: TOCILIZUMAB
     Route: 042
  109. ACTEMRA [Suspect]
     Active Substance: TOCILIZUMAB
     Route: 042
  110. ACTEMRA [Suspect]
     Active Substance: TOCILIZUMAB
     Route: 042
  111. ACTEMRA [Suspect]
     Active Substance: TOCILIZUMAB
  112. ACTEMRA [Suspect]
     Active Substance: TOCILIZUMAB
  113. ACTEMRA [Suspect]
     Active Substance: TOCILIZUMAB
  114. ACTEMRA [Suspect]
     Active Substance: TOCILIZUMAB
     Route: 042
  115. ACTEMRA [Suspect]
     Active Substance: TOCILIZUMAB
     Route: 042
  116. ACTEMRA [Suspect]
     Active Substance: TOCILIZUMAB
  117. ACTEMRA [Suspect]
     Active Substance: TOCILIZUMAB
     Route: 042
  118. ACTEMRA [Suspect]
     Active Substance: TOCILIZUMAB
     Route: 042
  119. ACTEMRA [Suspect]
     Active Substance: TOCILIZUMAB
  120. ACTEMRA [Suspect]
     Active Substance: TOCILIZUMAB
  121. ACTEMRA [Suspect]
     Active Substance: TOCILIZUMAB
     Route: 061
  122. ACTEMRA [Suspect]
     Active Substance: TOCILIZUMAB
     Route: 061
  123. ACTEMRA [Suspect]
     Active Substance: TOCILIZUMAB
  124. ACTEMRA [Suspect]
     Active Substance: TOCILIZUMAB
  125. ACTEMRA [Suspect]
     Active Substance: TOCILIZUMAB
  126. ACTEMRA [Suspect]
     Active Substance: TOCILIZUMAB
  127. ACTEMRA [Suspect]
     Active Substance: TOCILIZUMAB
     Route: 061
  128. ACTEMRA [Suspect]
     Active Substance: TOCILIZUMAB
     Route: 061
  129. ACETAMINOPHEN\CODEINE PHOSPHATE [Suspect]
     Active Substance: ACETAMINOPHEN\CODEINE PHOSPHATE
     Indication: Product used for unknown indication
  130. ACETAMINOPHEN\CODEINE PHOSPHATE [Suspect]
     Active Substance: ACETAMINOPHEN\CODEINE PHOSPHATE
     Route: 065
  131. ACETAMINOPHEN\CODEINE PHOSPHATE [Suspect]
     Active Substance: ACETAMINOPHEN\CODEINE PHOSPHATE
     Route: 065
  132. ACETAMINOPHEN\CODEINE PHOSPHATE [Suspect]
     Active Substance: ACETAMINOPHEN\CODEINE PHOSPHATE
  133. ACETAMINOPHEN\OXYCODONE HYDROCHLORIDE [Suspect]
     Active Substance: ACETAMINOPHEN\OXYCODONE HYDROCHLORIDE
     Indication: Product used for unknown indication
  134. ACETAMINOPHEN\OXYCODONE HYDROCHLORIDE [Suspect]
     Active Substance: ACETAMINOPHEN\OXYCODONE HYDROCHLORIDE
     Route: 065
  135. ACETAMINOPHEN\OXYCODONE HYDROCHLORIDE [Suspect]
     Active Substance: ACETAMINOPHEN\OXYCODONE HYDROCHLORIDE
     Route: 065
  136. ACETAMINOPHEN\OXYCODONE HYDROCHLORIDE [Suspect]
     Active Substance: ACETAMINOPHEN\OXYCODONE HYDROCHLORIDE
  137. ACTIFED (PSEUDOEPHEDRINE HYDROCHLORIDE\TRIPROLIDINE HYDROCHLORIDE) [Suspect]
     Active Substance: PSEUDOEPHEDRINE HYDROCHLORIDE\TRIPROLIDINE HYDROCHLORIDE
     Indication: Product used for unknown indication
  138. ACTIFED (PSEUDOEPHEDRINE HYDROCHLORIDE\TRIPROLIDINE HYDROCHLORIDE) [Suspect]
     Active Substance: PSEUDOEPHEDRINE HYDROCHLORIDE\TRIPROLIDINE HYDROCHLORIDE
     Route: 065
  139. ACTIFED (PSEUDOEPHEDRINE HYDROCHLORIDE\TRIPROLIDINE HYDROCHLORIDE) [Suspect]
     Active Substance: PSEUDOEPHEDRINE HYDROCHLORIDE\TRIPROLIDINE HYDROCHLORIDE
     Route: 065
  140. ACTIFED (PSEUDOEPHEDRINE HYDROCHLORIDE\TRIPROLIDINE HYDROCHLORIDE) [Suspect]
     Active Substance: PSEUDOEPHEDRINE HYDROCHLORIDE\TRIPROLIDINE HYDROCHLORIDE
  141. ADALIMUMAB [Suspect]
     Active Substance: ADALIMUMAB
     Indication: Rheumatoid arthritis
  142. ADALIMUMAB [Suspect]
     Active Substance: ADALIMUMAB
  143. ADALIMUMAB [Suspect]
     Active Substance: ADALIMUMAB
     Route: 058
  144. ADALIMUMAB [Suspect]
     Active Substance: ADALIMUMAB
     Route: 058
  145. ADALIMUMAB [Suspect]
     Active Substance: ADALIMUMAB
     Route: 042
  146. ADALIMUMAB [Suspect]
     Active Substance: ADALIMUMAB
  147. ADALIMUMAB [Suspect]
     Active Substance: ADALIMUMAB
  148. ADALIMUMAB [Suspect]
     Active Substance: ADALIMUMAB
     Route: 042
  149. ADALIMUMAB [Suspect]
     Active Substance: ADALIMUMAB
  150. ADALIMUMAB [Suspect]
     Active Substance: ADALIMUMAB
  151. ADALIMUMAB [Suspect]
     Active Substance: ADALIMUMAB
     Route: 048
  152. ADALIMUMAB [Suspect]
     Active Substance: ADALIMUMAB
     Route: 048
  153. ADALIMUMAB [Suspect]
     Active Substance: ADALIMUMAB
     Route: 065
  154. ADALIMUMAB [Suspect]
     Active Substance: ADALIMUMAB
  155. ADALIMUMAB [Suspect]
     Active Substance: ADALIMUMAB
  156. ADALIMUMAB [Suspect]
     Active Substance: ADALIMUMAB
     Route: 065
  157. ALENDRONATE SODIUM [Suspect]
     Active Substance: ALENDRONATE SODIUM
     Indication: Rheumatoid arthritis
  158. ALENDRONATE SODIUM [Suspect]
     Active Substance: ALENDRONATE SODIUM
     Route: 048
  159. ALENDRONATE SODIUM [Suspect]
     Active Substance: ALENDRONATE SODIUM
     Route: 048
  160. ALENDRONATE SODIUM [Suspect]
     Active Substance: ALENDRONATE SODIUM
  161. ALENDRONATE SODIUM [Suspect]
     Active Substance: ALENDRONATE SODIUM
  162. ALENDRONATE SODIUM [Suspect]
     Active Substance: ALENDRONATE SODIUM
     Route: 048
  163. ALENDRONATE SODIUM [Suspect]
     Active Substance: ALENDRONATE SODIUM
  164. ALENDRONATE SODIUM [Suspect]
     Active Substance: ALENDRONATE SODIUM
     Route: 048
  165. ALENDRONATE SODIUM [Suspect]
     Active Substance: ALENDRONATE SODIUM
     Route: 065
  166. ALENDRONATE SODIUM [Suspect]
     Active Substance: ALENDRONATE SODIUM
     Route: 065
  167. ALENDRONATE SODIUM [Suspect]
     Active Substance: ALENDRONATE SODIUM
  168. ALENDRONATE SODIUM [Suspect]
     Active Substance: ALENDRONATE SODIUM
  169. ALENDRONATE SODIUM\CHOLECALCIFEROL [Suspect]
     Active Substance: ALENDRONATE SODIUM\CHOLECALCIFEROL
     Indication: Rheumatoid arthritis
  170. ALENDRONATE SODIUM\CHOLECALCIFEROL [Suspect]
     Active Substance: ALENDRONATE SODIUM\CHOLECALCIFEROL
     Route: 048
  171. ALENDRONATE SODIUM\CHOLECALCIFEROL [Suspect]
     Active Substance: ALENDRONATE SODIUM\CHOLECALCIFEROL
     Route: 048
  172. ALENDRONATE SODIUM\CHOLECALCIFEROL [Suspect]
     Active Substance: ALENDRONATE SODIUM\CHOLECALCIFEROL
  173. DICLOFENAC SODIUM [Suspect]
     Active Substance: DICLOFENAC SODIUM
     Indication: Product used for unknown indication
  174. DICLOFENAC SODIUM [Suspect]
     Active Substance: DICLOFENAC SODIUM
     Route: 065
  175. DICLOFENAC SODIUM [Suspect]
     Active Substance: DICLOFENAC SODIUM
     Route: 065
  176. DICLOFENAC SODIUM [Suspect]
     Active Substance: DICLOFENAC SODIUM
  177. PREDNISONE [Suspect]
     Active Substance: PREDNISONE
     Indication: Rheumatoid arthritis
  178. PREDNISONE [Suspect]
     Active Substance: PREDNISONE
     Route: 048
  179. PREDNISONE [Suspect]
     Active Substance: PREDNISONE
  180. PREDNISONE [Suspect]
     Active Substance: PREDNISONE
     Route: 048
  181. PREDNISONE [Suspect]
     Active Substance: PREDNISONE
  182. PREDNISONE [Suspect]
     Active Substance: PREDNISONE
     Route: 065
  183. PREDNISONE [Suspect]
     Active Substance: PREDNISONE
     Route: 065
  184. PREDNISONE [Suspect]
     Active Substance: PREDNISONE
  185. PREDNISONE [Suspect]
     Active Substance: PREDNISONE
     Route: 048
  186. PREDNISONE [Suspect]
     Active Substance: PREDNISONE
  187. PREDNISONE [Suspect]
     Active Substance: PREDNISONE
  188. PREDNISONE [Suspect]
     Active Substance: PREDNISONE
     Route: 048
  189. PREDNISONE [Suspect]
     Active Substance: PREDNISONE
     Route: 065
  190. PREDNISONE [Suspect]
     Active Substance: PREDNISONE
  191. PREDNISONE [Suspect]
     Active Substance: PREDNISONE
  192. PREDNISONE [Suspect]
     Active Substance: PREDNISONE
     Route: 065
  193. PREDNISONE [Suspect]
     Active Substance: PREDNISONE
     Route: 065
  194. PREDNISONE [Suspect]
     Active Substance: PREDNISONE
     Route: 065
  195. PREDNISONE [Suspect]
     Active Substance: PREDNISONE
  196. PREDNISONE [Suspect]
     Active Substance: PREDNISONE
  197. PREDNISONE [Suspect]
     Active Substance: PREDNISONE
     Route: 065
  198. PREDNISONE [Suspect]
     Active Substance: PREDNISONE
  199. PREDNISONE [Suspect]
     Active Substance: PREDNISONE
  200. PREDNISONE [Suspect]
     Active Substance: PREDNISONE
     Route: 065
  201. PREDNISONE [Suspect]
     Active Substance: PREDNISONE
     Indication: Rheumatoid arthritis
  202. PREDNISONE [Suspect]
     Active Substance: PREDNISONE
     Route: 042
  203. PREDNISONE [Suspect]
     Active Substance: PREDNISONE
     Route: 042
  204. PREDNISONE [Suspect]
     Active Substance: PREDNISONE
  205. ALENDRONIC ACID [Suspect]
     Active Substance: ALENDRONIC ACID
     Indication: Rheumatoid arthritis
  206. ALENDRONIC ACID [Suspect]
     Active Substance: ALENDRONIC ACID
  207. ALENDRONIC ACID [Suspect]
     Active Substance: ALENDRONIC ACID
     Route: 065
  208. ALENDRONIC ACID [Suspect]
     Active Substance: ALENDRONIC ACID
     Route: 065
  209. ALENDRONIC ACID [Suspect]
     Active Substance: ALENDRONIC ACID
  210. ALENDRONIC ACID [Suspect]
     Active Substance: ALENDRONIC ACID
  211. ALENDRONIC ACID [Suspect]
     Active Substance: ALENDRONIC ACID
     Route: 048
  212. ALENDRONIC ACID [Suspect]
     Active Substance: ALENDRONIC ACID
     Route: 048
  213. ALENDRONIC ACID [Suspect]
     Active Substance: ALENDRONIC ACID
     Indication: Rheumatoid arthritis
  214. ALENDRONIC ACID [Suspect]
     Active Substance: ALENDRONIC ACID
     Route: 016
  215. ALENDRONIC ACID [Suspect]
     Active Substance: ALENDRONIC ACID
     Route: 016
  216. ALENDRONIC ACID [Suspect]
     Active Substance: ALENDRONIC ACID
  217. PANTOPRAZOLE SODIUM ANHYDROUS [Suspect]
     Active Substance: PANTOPRAZOLE SODIUM ANHYDROUS
     Indication: Product used for unknown indication
  218. PANTOPRAZOLE SODIUM ANHYDROUS [Suspect]
     Active Substance: PANTOPRAZOLE SODIUM ANHYDROUS
     Route: 016
  219. PANTOPRAZOLE SODIUM ANHYDROUS [Suspect]
     Active Substance: PANTOPRAZOLE SODIUM ANHYDROUS
     Route: 016
  220. PANTOPRAZOLE SODIUM ANHYDROUS [Suspect]
     Active Substance: PANTOPRAZOLE SODIUM ANHYDROUS
  221. APREMILAST [Suspect]
     Active Substance: APREMILAST
     Indication: Product used for unknown indication
  222. APREMILAST [Suspect]
     Active Substance: APREMILAST
  223. APREMILAST [Suspect]
     Active Substance: APREMILAST
     Route: 048
  224. APREMILAST [Suspect]
     Active Substance: APREMILAST
     Route: 048
  225. APREMILAST [Suspect]
     Active Substance: APREMILAST
     Route: 065
  226. APREMILAST [Suspect]
     Active Substance: APREMILAST
     Route: 065
  227. APREMILAST [Suspect]
     Active Substance: APREMILAST
  228. APREMILAST [Suspect]
     Active Substance: APREMILAST
  229. APREMILAST [Suspect]
     Active Substance: APREMILAST
     Route: 065
  230. APREMILAST [Suspect]
     Active Substance: APREMILAST
     Route: 065
  231. APREMILAST [Suspect]
     Active Substance: APREMILAST
  232. APREMILAST [Suspect]
     Active Substance: APREMILAST
  233. APREMILAST [Suspect]
     Active Substance: APREMILAST
  234. APREMILAST [Suspect]
     Active Substance: APREMILAST
  235. APREMILAST [Suspect]
     Active Substance: APREMILAST
     Route: 065
  236. APREMILAST [Suspect]
     Active Substance: APREMILAST
     Route: 065
  237. APREMILAST [Suspect]
     Active Substance: APREMILAST
     Indication: Product used for unknown indication
     Dosage: 6 MILLIGRAM, QD (1 EVERY 1 DAY)
     Route: 065
  238. APREMILAST [Suspect]
     Active Substance: APREMILAST
     Dosage: 6 MILLIGRAM, QD (1 EVERY 1 DAY)
  239. APREMILAST [Suspect]
     Active Substance: APREMILAST
     Dosage: 6 MILLIGRAM, QD (1 EVERY 1 DAY)
  240. APREMILAST [Suspect]
     Active Substance: APREMILAST
     Dosage: 6 MILLIGRAM, QD (1 EVERY 1 DAY)
     Route: 065
  241. APREMILAST [Suspect]
     Active Substance: APREMILAST
     Dosage: 3 MILLIGRAM, BID (1 EVERY 12 HOURS)
     Route: 065
  242. APREMILAST [Suspect]
     Active Substance: APREMILAST
     Dosage: 3 MILLIGRAM, BID (1 EVERY 12 HOURS)
  243. APREMILAST [Suspect]
     Active Substance: APREMILAST
     Dosage: 3 MILLIGRAM, BID (1 EVERY 12 HOURS)
  244. APREMILAST [Suspect]
     Active Substance: APREMILAST
     Dosage: 3 MILLIGRAM, BID (1 EVERY 12 HOURS)
     Route: 065
  245. ARAVA [Suspect]
     Active Substance: LEFLUNOMIDE
     Indication: Rheumatoid arthritis
     Route: 048
  246. ARAVA [Suspect]
     Active Substance: LEFLUNOMIDE
  247. ARAVA [Suspect]
     Active Substance: LEFLUNOMIDE
  248. ARAVA [Suspect]
     Active Substance: LEFLUNOMIDE
     Route: 048
  249. ARAVA [Suspect]
     Active Substance: LEFLUNOMIDE
     Route: 048
  250. ARAVA [Suspect]
     Active Substance: LEFLUNOMIDE
  251. ARAVA [Suspect]
     Active Substance: LEFLUNOMIDE
  252. ARAVA [Suspect]
     Active Substance: LEFLUNOMIDE
     Route: 048
  253. ARAVA [Suspect]
     Active Substance: LEFLUNOMIDE
     Route: 065
  254. ARAVA [Suspect]
     Active Substance: LEFLUNOMIDE
  255. ARAVA [Suspect]
     Active Substance: LEFLUNOMIDE
  256. ARAVA [Suspect]
     Active Substance: LEFLUNOMIDE
     Route: 065
  257. ARAVA [Suspect]
     Active Substance: LEFLUNOMIDE
     Route: 005
  258. ARAVA [Suspect]
     Active Substance: LEFLUNOMIDE
  259. ARAVA [Suspect]
     Active Substance: LEFLUNOMIDE
  260. ARAVA [Suspect]
     Active Substance: LEFLUNOMIDE
     Route: 005
  261. BORAGE OIL [Suspect]
     Active Substance: BORAGE OIL
     Indication: Product used for unknown indication
  262. BORAGE OIL [Suspect]
     Active Substance: BORAGE OIL
     Route: 065
  263. BORAGE OIL [Suspect]
     Active Substance: BORAGE OIL
     Route: 065
  264. BORAGE OIL [Suspect]
     Active Substance: BORAGE OIL
  265. CALCIUM CARBONATE [Suspect]
     Active Substance: CALCIUM CARBONATE
     Indication: Product used for unknown indication
     Route: 065
  266. CALCIUM CARBONATE [Suspect]
     Active Substance: CALCIUM CARBONATE
  267. CALCIUM CARBONATE [Suspect]
     Active Substance: CALCIUM CARBONATE
  268. CALCIUM CARBONATE [Suspect]
     Active Substance: CALCIUM CARBONATE
     Route: 065
  269. CALCIUM CARBONATE [Suspect]
     Active Substance: CALCIUM CARBONATE
     Route: 016
  270. CALCIUM CARBONATE [Suspect]
     Active Substance: CALCIUM CARBONATE
  271. CALCIUM CARBONATE [Suspect]
     Active Substance: CALCIUM CARBONATE
  272. CALCIUM CARBONATE [Suspect]
     Active Substance: CALCIUM CARBONATE
     Route: 016
  273. CALCIUM CARBONATE\CHOLECALCIFEROL [Suspect]
     Active Substance: CALCIUM CARBONATE\CHOLECALCIFEROL
     Indication: Product used for unknown indication
  274. CALCIUM CARBONATE\CHOLECALCIFEROL [Suspect]
     Active Substance: CALCIUM CARBONATE\CHOLECALCIFEROL
     Route: 065
  275. CALCIUM CARBONATE\CHOLECALCIFEROL [Suspect]
     Active Substance: CALCIUM CARBONATE\CHOLECALCIFEROL
     Route: 065
  276. CALCIUM CARBONATE\CHOLECALCIFEROL [Suspect]
     Active Substance: CALCIUM CARBONATE\CHOLECALCIFEROL
  277. CALCIUM GLUBIONATE [Suspect]
     Active Substance: CALCIUM GLUBIONATE
     Indication: Product used for unknown indication
  278. CALCIUM GLUBIONATE [Suspect]
     Active Substance: CALCIUM GLUBIONATE
     Route: 065
  279. CALCIUM GLUBIONATE [Suspect]
     Active Substance: CALCIUM GLUBIONATE
     Route: 065
  280. CALCIUM GLUBIONATE [Suspect]
     Active Substance: CALCIUM GLUBIONATE
  281. CETIRIZINE [Suspect]
     Active Substance: CETIRIZINE HYDROCHLORIDE
     Indication: Rheumatoid arthritis
  282. CETIRIZINE [Suspect]
     Active Substance: CETIRIZINE HYDROCHLORIDE
  283. CETIRIZINE [Suspect]
     Active Substance: CETIRIZINE HYDROCHLORIDE
     Route: 065
  284. CETIRIZINE [Suspect]
     Active Substance: CETIRIZINE HYDROCHLORIDE
     Route: 065
  285. CETIRIZINE [Suspect]
     Active Substance: CETIRIZINE HYDROCHLORIDE
     Dosage: 10 MILLIGRAM, QD (1 EVERY 1 DAY)
     Route: 048
  286. CETIRIZINE [Suspect]
     Active Substance: CETIRIZINE HYDROCHLORIDE
     Dosage: 10 MILLIGRAM, QD (1 EVERY 1 DAY)
     Route: 048
  287. CETIRIZINE [Suspect]
     Active Substance: CETIRIZINE HYDROCHLORIDE
     Dosage: 10 MILLIGRAM, QD (1 EVERY 1 DAY)
  288. CETIRIZINE [Suspect]
     Active Substance: CETIRIZINE HYDROCHLORIDE
     Dosage: 10 MILLIGRAM, QD (1 EVERY 1 DAY)
  289. CETIRIZINE [Suspect]
     Active Substance: CETIRIZINE HYDROCHLORIDE
  290. CETIRIZINE [Suspect]
     Active Substance: CETIRIZINE HYDROCHLORIDE
  291. CETIRIZINE [Suspect]
     Active Substance: CETIRIZINE HYDROCHLORIDE
     Route: 048
  292. CETIRIZINE [Suspect]
     Active Substance: CETIRIZINE HYDROCHLORIDE
     Route: 048
  293. CETIRIZINE [Suspect]
     Active Substance: CETIRIZINE HYDROCHLORIDE
     Route: 065
  294. CETIRIZINE [Suspect]
     Active Substance: CETIRIZINE HYDROCHLORIDE
  295. CETIRIZINE [Suspect]
     Active Substance: CETIRIZINE HYDROCHLORIDE
  296. CETIRIZINE [Suspect]
     Active Substance: CETIRIZINE HYDROCHLORIDE
     Route: 065
  297. CETIRIZINE [Suspect]
     Active Substance: CETIRIZINE HYDROCHLORIDE
     Route: 065
  298. CETIRIZINE [Suspect]
     Active Substance: CETIRIZINE HYDROCHLORIDE
     Route: 065
  299. CETIRIZINE [Suspect]
     Active Substance: CETIRIZINE HYDROCHLORIDE
  300. CETIRIZINE [Suspect]
     Active Substance: CETIRIZINE HYDROCHLORIDE
  301. CETIRIZINE [Suspect]
     Active Substance: CETIRIZINE HYDROCHLORIDE
     Indication: Rheumatoid arthritis
     Route: 061
  302. CETIRIZINE [Suspect]
     Active Substance: CETIRIZINE HYDROCHLORIDE
  303. CETIRIZINE [Suspect]
     Active Substance: CETIRIZINE HYDROCHLORIDE
  304. CETIRIZINE [Suspect]
     Active Substance: CETIRIZINE HYDROCHLORIDE
     Route: 061
  305. CETIRIZINE [Suspect]
     Active Substance: CETIRIZINE HYDROCHLORIDE
     Route: 065
  306. CETIRIZINE [Suspect]
     Active Substance: CETIRIZINE HYDROCHLORIDE
  307. CETIRIZINE [Suspect]
     Active Substance: CETIRIZINE HYDROCHLORIDE
  308. CETIRIZINE [Suspect]
     Active Substance: CETIRIZINE HYDROCHLORIDE
     Route: 065
  309. CETIRIZINE [Suspect]
     Active Substance: CETIRIZINE HYDROCHLORIDE
  310. CETIRIZINE [Suspect]
     Active Substance: CETIRIZINE HYDROCHLORIDE
     Route: 065
  311. CETIRIZINE [Suspect]
     Active Substance: CETIRIZINE HYDROCHLORIDE
     Route: 065
  312. CETIRIZINE [Suspect]
     Active Substance: CETIRIZINE HYDROCHLORIDE
  313. CETIRIZINE [Suspect]
     Active Substance: CETIRIZINE HYDROCHLORIDE
  314. CETIRIZINE [Suspect]
     Active Substance: CETIRIZINE HYDROCHLORIDE
     Route: 065
  315. CETIRIZINE [Suspect]
     Active Substance: CETIRIZINE HYDROCHLORIDE
     Route: 065
  316. CETIRIZINE [Suspect]
     Active Substance: CETIRIZINE HYDROCHLORIDE
  317. CETIRIZINE [Suspect]
     Active Substance: CETIRIZINE HYDROCHLORIDE
     Route: 065
  318. CETIRIZINE [Suspect]
     Active Substance: CETIRIZINE HYDROCHLORIDE
     Route: 065
  319. CETIRIZINE [Suspect]
     Active Substance: CETIRIZINE HYDROCHLORIDE
  320. CETIRIZINE [Suspect]
     Active Substance: CETIRIZINE HYDROCHLORIDE
  321. CETIRIZINE [Suspect]
     Active Substance: CETIRIZINE HYDROCHLORIDE
     Route: 061
  322. CETIRIZINE [Suspect]
     Active Substance: CETIRIZINE HYDROCHLORIDE
     Route: 061
  323. CETIRIZINE [Suspect]
     Active Substance: CETIRIZINE HYDROCHLORIDE
  324. CETIRIZINE [Suspect]
     Active Substance: CETIRIZINE HYDROCHLORIDE
  325. CETIRIZINE [Suspect]
     Active Substance: CETIRIZINE HYDROCHLORIDE
  326. CETIRIZINE [Suspect]
     Active Substance: CETIRIZINE HYDROCHLORIDE
  327. CETIRIZINE [Suspect]
     Active Substance: CETIRIZINE HYDROCHLORIDE
     Route: 016
  328. CETIRIZINE [Suspect]
     Active Substance: CETIRIZINE HYDROCHLORIDE
     Route: 016
  329. CETIRIZINE HYDROCHLORIDE [Suspect]
     Active Substance: CETIRIZINE HYDROCHLORIDE
     Indication: Rheumatoid arthritis
     Dosage: 10 MILLIGRAM, QD (1 EVERY 1 DAYS)
  330. CETIRIZINE HYDROCHLORIDE [Suspect]
     Active Substance: CETIRIZINE HYDROCHLORIDE
     Dosage: 10 MILLIGRAM, QD (1 EVERY 1 DAYS)
     Route: 048
  331. CETIRIZINE HYDROCHLORIDE [Suspect]
     Active Substance: CETIRIZINE HYDROCHLORIDE
     Dosage: 10 MILLIGRAM, QD (1 EVERY 1 DAYS)
     Route: 048
  332. CETIRIZINE HYDROCHLORIDE [Suspect]
     Active Substance: CETIRIZINE HYDROCHLORIDE
     Dosage: 10 MILLIGRAM, QD (1 EVERY 1 DAYS)
  333. CETIRIZINE HYDROCHLORIDE [Suspect]
     Active Substance: CETIRIZINE HYDROCHLORIDE
     Dosage: 25 MILLIGRAM, QD (1 EVERY 1 DAYS)
  334. CETIRIZINE HYDROCHLORIDE [Suspect]
     Active Substance: CETIRIZINE HYDROCHLORIDE
     Dosage: 25 MILLIGRAM, QD (1 EVERY 1 DAYS)
     Route: 048
  335. CETIRIZINE HYDROCHLORIDE [Suspect]
     Active Substance: CETIRIZINE HYDROCHLORIDE
     Dosage: 25 MILLIGRAM, QD (1 EVERY 1 DAYS)
  336. CETIRIZINE HYDROCHLORIDE [Suspect]
     Active Substance: CETIRIZINE HYDROCHLORIDE
     Dosage: 25 MILLIGRAM, QD (1 EVERY 1 DAYS)
     Route: 048
  337. CETIRIZINE HYDROCHLORIDE [Suspect]
     Active Substance: CETIRIZINE HYDROCHLORIDE
  338. CETIRIZINE HYDROCHLORIDE [Suspect]
     Active Substance: CETIRIZINE HYDROCHLORIDE
  339. CETIRIZINE HYDROCHLORIDE [Suspect]
     Active Substance: CETIRIZINE HYDROCHLORIDE
     Route: 048
  340. CETIRIZINE HYDROCHLORIDE [Suspect]
     Active Substance: CETIRIZINE HYDROCHLORIDE
     Route: 048
  341. CETIRIZINE HYDROCHLORIDE [Suspect]
     Active Substance: CETIRIZINE HYDROCHLORIDE
     Route: 048
  342. CETIRIZINE HYDROCHLORIDE [Suspect]
     Active Substance: CETIRIZINE HYDROCHLORIDE
     Route: 048
  343. CETIRIZINE HYDROCHLORIDE [Suspect]
     Active Substance: CETIRIZINE HYDROCHLORIDE
  344. CETIRIZINE HYDROCHLORIDE [Suspect]
     Active Substance: CETIRIZINE HYDROCHLORIDE
  345. CETIRIZINE HYDROCHLORIDE [Suspect]
     Active Substance: CETIRIZINE HYDROCHLORIDE
     Route: 048
  346. CETIRIZINE HYDROCHLORIDE [Suspect]
     Active Substance: CETIRIZINE HYDROCHLORIDE
     Route: 048
  347. CETIRIZINE HYDROCHLORIDE [Suspect]
     Active Substance: CETIRIZINE HYDROCHLORIDE
  348. CETIRIZINE HYDROCHLORIDE [Suspect]
     Active Substance: CETIRIZINE HYDROCHLORIDE
  349. CETIRIZINE HYDROCHLORIDE [Suspect]
     Active Substance: CETIRIZINE HYDROCHLORIDE
     Route: 065
  350. CETIRIZINE HYDROCHLORIDE [Suspect]
     Active Substance: CETIRIZINE HYDROCHLORIDE
     Route: 065
  351. CETIRIZINE HYDROCHLORIDE [Suspect]
     Active Substance: CETIRIZINE HYDROCHLORIDE
  352. CETIRIZINE HYDROCHLORIDE [Suspect]
     Active Substance: CETIRIZINE HYDROCHLORIDE
  353. CETIRIZINE HYDROCHLORIDE [Suspect]
     Active Substance: CETIRIZINE HYDROCHLORIDE
     Dosage: 10 MILLIGRAM, QD (1 EVERY 1 DAYS)
     Route: 065
  354. CETIRIZINE HYDROCHLORIDE [Suspect]
     Active Substance: CETIRIZINE HYDROCHLORIDE
     Dosage: 10 MILLIGRAM, QD (1 EVERY 1 DAYS)
     Route: 065
  355. CETIRIZINE HYDROCHLORIDE [Suspect]
     Active Substance: CETIRIZINE HYDROCHLORIDE
     Dosage: 10 MILLIGRAM, QD (1 EVERY 1 DAYS)
  356. CETIRIZINE HYDROCHLORIDE [Suspect]
     Active Substance: CETIRIZINE HYDROCHLORIDE
     Dosage: 10 MILLIGRAM, QD (1 EVERY 1 DAYS)
  357. CETIRIZINE HYDROCHLORIDE [Suspect]
     Active Substance: CETIRIZINE HYDROCHLORIDE
     Dosage: 25 MILLIGRAM, QD (1 EVERY 1 DAYS)
     Route: 065
  358. CETIRIZINE HYDROCHLORIDE [Suspect]
     Active Substance: CETIRIZINE HYDROCHLORIDE
     Dosage: 25 MILLIGRAM, QD (1 EVERY 1 DAYS)
     Route: 065
  359. CETIRIZINE HYDROCHLORIDE [Suspect]
     Active Substance: CETIRIZINE HYDROCHLORIDE
     Dosage: 25 MILLIGRAM, QD (1 EVERY 1 DAYS)
  360. CETIRIZINE HYDROCHLORIDE [Suspect]
     Active Substance: CETIRIZINE HYDROCHLORIDE
     Dosage: 25 MILLIGRAM, QD (1 EVERY 1 DAYS)
  361. CETIRIZINE HYDROCHLORIDE [Suspect]
     Active Substance: CETIRIZINE HYDROCHLORIDE
     Route: 065
  362. CETIRIZINE HYDROCHLORIDE [Suspect]
     Active Substance: CETIRIZINE HYDROCHLORIDE
     Route: 065
  363. CETIRIZINE HYDROCHLORIDE [Suspect]
     Active Substance: CETIRIZINE HYDROCHLORIDE
  364. CETIRIZINE HYDROCHLORIDE [Suspect]
     Active Substance: CETIRIZINE HYDROCHLORIDE
  365. CETIRIZINE HYDROCHLORIDE [Suspect]
     Active Substance: CETIRIZINE HYDROCHLORIDE
     Route: 065
  366. CETIRIZINE HYDROCHLORIDE [Suspect]
     Active Substance: CETIRIZINE HYDROCHLORIDE
     Route: 065
  367. CETIRIZINE HYDROCHLORIDE [Suspect]
     Active Substance: CETIRIZINE HYDROCHLORIDE
  368. CETIRIZINE HYDROCHLORIDE [Suspect]
     Active Substance: CETIRIZINE HYDROCHLORIDE
  369. CETIRIZINE HYDROCHLORIDE [Suspect]
     Active Substance: CETIRIZINE HYDROCHLORIDE
  370. CETIRIZINE HYDROCHLORIDE [Suspect]
     Active Substance: CETIRIZINE HYDROCHLORIDE
  371. CETIRIZINE HYDROCHLORIDE [Suspect]
     Active Substance: CETIRIZINE HYDROCHLORIDE
     Route: 016
  372. CETIRIZINE HYDROCHLORIDE [Suspect]
     Active Substance: CETIRIZINE HYDROCHLORIDE
     Route: 016
  373. CETIRIZINE HYDROCHLORIDE [Suspect]
     Active Substance: CETIRIZINE HYDROCHLORIDE
     Indication: Rheumatoid arthritis
     Route: 048
  374. CETIRIZINE HYDROCHLORIDE [Suspect]
     Active Substance: CETIRIZINE HYDROCHLORIDE
  375. CETIRIZINE HYDROCHLORIDE [Suspect]
     Active Substance: CETIRIZINE HYDROCHLORIDE
  376. CETIRIZINE HYDROCHLORIDE [Suspect]
     Active Substance: CETIRIZINE HYDROCHLORIDE
     Route: 048
  377. CETIRIZINE HYDROCHLORIDE [Suspect]
     Active Substance: CETIRIZINE HYDROCHLORIDE
     Route: 065
  378. CETIRIZINE HYDROCHLORIDE [Suspect]
     Active Substance: CETIRIZINE HYDROCHLORIDE
  379. CETIRIZINE HYDROCHLORIDE [Suspect]
     Active Substance: CETIRIZINE HYDROCHLORIDE
  380. CETIRIZINE HYDROCHLORIDE [Suspect]
     Active Substance: CETIRIZINE HYDROCHLORIDE
     Route: 065
  381. CETIRIZINE HYDROCHLORIDE [Suspect]
     Active Substance: CETIRIZINE HYDROCHLORIDE
     Route: 048
  382. CETIRIZINE HYDROCHLORIDE [Suspect]
     Active Substance: CETIRIZINE HYDROCHLORIDE
     Route: 048
  383. CETIRIZINE HYDROCHLORIDE [Suspect]
     Active Substance: CETIRIZINE HYDROCHLORIDE
  384. CETIRIZINE HYDROCHLORIDE [Suspect]
     Active Substance: CETIRIZINE HYDROCHLORIDE
  385. CHLORHEXIDINE GLUCONATE [Suspect]
     Active Substance: CHLORHEXIDINE GLUCONATE
     Indication: Product used for unknown indication
     Route: 061
  386. CHLORHEXIDINE GLUCONATE [Suspect]
     Active Substance: CHLORHEXIDINE GLUCONATE
  387. CHLORHEXIDINE GLUCONATE [Suspect]
     Active Substance: CHLORHEXIDINE GLUCONATE
  388. CHLORHEXIDINE GLUCONATE [Suspect]
     Active Substance: CHLORHEXIDINE GLUCONATE
     Route: 061
  389. CHLORHEXIDINE GLUCONATE [Suspect]
     Active Substance: CHLORHEXIDINE GLUCONATE
     Route: 048
  390. CHLORHEXIDINE GLUCONATE [Suspect]
     Active Substance: CHLORHEXIDINE GLUCONATE
  391. CHLORHEXIDINE GLUCONATE [Suspect]
     Active Substance: CHLORHEXIDINE GLUCONATE
  392. CHLORHEXIDINE GLUCONATE [Suspect]
     Active Substance: CHLORHEXIDINE GLUCONATE
     Route: 048
  393. CHLORHEXIDINE GLUCONATE [Suspect]
     Active Substance: CHLORHEXIDINE GLUCONATE
     Route: 002
  394. CHLORHEXIDINE GLUCONATE [Suspect]
     Active Substance: CHLORHEXIDINE GLUCONATE
     Route: 002
  395. CHLORHEXIDINE GLUCONATE [Suspect]
     Active Substance: CHLORHEXIDINE GLUCONATE
  396. CHLORHEXIDINE GLUCONATE [Suspect]
     Active Substance: CHLORHEXIDINE GLUCONATE
  397. CHLORAPREP [Suspect]
     Active Substance: CHLORHEXIDINE GLUCONATE\ISOPROPYL ALCOHOL
     Indication: Product used for unknown indication
  398. CHLORAPREP [Suspect]
     Active Substance: CHLORHEXIDINE GLUCONATE\ISOPROPYL ALCOHOL
  399. CHLORAPREP [Suspect]
     Active Substance: CHLORHEXIDINE GLUCONATE\ISOPROPYL ALCOHOL
     Route: 065
  400. CHLORAPREP [Suspect]
     Active Substance: CHLORHEXIDINE GLUCONATE\ISOPROPYL ALCOHOL
     Route: 065
  401. CHLORAPREP [Suspect]
     Active Substance: CHLORHEXIDINE GLUCONATE\ISOPROPYL ALCOHOL
  402. CHLORAPREP [Suspect]
     Active Substance: CHLORHEXIDINE GLUCONATE\ISOPROPYL ALCOHOL
  403. CHLORAPREP [Suspect]
     Active Substance: CHLORHEXIDINE GLUCONATE\ISOPROPYL ALCOHOL
     Route: 048
  404. CHLORAPREP [Suspect]
     Active Substance: CHLORHEXIDINE GLUCONATE\ISOPROPYL ALCOHOL
     Route: 048
  405. CHLORAPREP [Suspect]
     Active Substance: CHLORHEXIDINE GLUCONATE\ISOPROPYL ALCOHOL
     Indication: Product used for unknown indication
  406. CHLORAPREP [Suspect]
     Active Substance: CHLORHEXIDINE GLUCONATE\ISOPROPYL ALCOHOL
     Route: 061
  407. CHLORAPREP [Suspect]
     Active Substance: CHLORHEXIDINE GLUCONATE\ISOPROPYL ALCOHOL
     Route: 061
  408. CHLORAPREP [Suspect]
     Active Substance: CHLORHEXIDINE GLUCONATE\ISOPROPYL ALCOHOL
  409. CHLORHEXIDINE [Suspect]
     Active Substance: CHLORHEXIDINE
     Indication: Product used for unknown indication
     Route: 065
  410. CHLORHEXIDINE [Suspect]
     Active Substance: CHLORHEXIDINE
  411. CHLORHEXIDINE [Suspect]
     Active Substance: CHLORHEXIDINE
  412. CHLORHEXIDINE [Suspect]
     Active Substance: CHLORHEXIDINE
     Route: 065
  413. CHLORHEXIDINE [Suspect]
     Active Substance: CHLORHEXIDINE
     Route: 002
  414. CHLORHEXIDINE [Suspect]
     Active Substance: CHLORHEXIDINE
  415. CHLORHEXIDINE [Suspect]
     Active Substance: CHLORHEXIDINE
  416. CHLORHEXIDINE [Suspect]
     Active Substance: CHLORHEXIDINE
     Route: 002
  417. CHOLECALCIFEROL [Suspect]
     Active Substance: CHOLECALCIFEROL
     Indication: Product used for unknown indication
  418. CHOLECALCIFEROL [Suspect]
     Active Substance: CHOLECALCIFEROL
  419. CHOLECALCIFEROL [Suspect]
     Active Substance: CHOLECALCIFEROL
     Route: 065
  420. CHOLECALCIFEROL [Suspect]
     Active Substance: CHOLECALCIFEROL
     Route: 065
  421. CHOLECALCIFEROL [Suspect]
     Active Substance: CHOLECALCIFEROL
  422. CHOLECALCIFEROL [Suspect]
     Active Substance: CHOLECALCIFEROL
  423. CHOLECALCIFEROL [Suspect]
     Active Substance: CHOLECALCIFEROL
     Route: 016
  424. CHOLECALCIFEROL [Suspect]
     Active Substance: CHOLECALCIFEROL
     Route: 016
  425. CIMZIA [Suspect]
     Active Substance: CERTOLIZUMAB PEGOL
     Indication: Rheumatoid arthritis
  426. CIMZIA [Suspect]
     Active Substance: CERTOLIZUMAB PEGOL
     Indication: Psoriasis
     Route: 058
  427. CIMZIA [Suspect]
     Active Substance: CERTOLIZUMAB PEGOL
     Route: 058
  428. CIMZIA [Suspect]
     Active Substance: CERTOLIZUMAB PEGOL
  429. CIMZIA [Suspect]
     Active Substance: CERTOLIZUMAB PEGOL
  430. CIMZIA [Suspect]
     Active Substance: CERTOLIZUMAB PEGOL
     Route: 058
  431. CIMZIA [Suspect]
     Active Substance: CERTOLIZUMAB PEGOL
  432. CIMZIA [Suspect]
     Active Substance: CERTOLIZUMAB PEGOL
     Route: 058
  433. CIMZIA [Suspect]
     Active Substance: CERTOLIZUMAB PEGOL
     Route: 065
  434. CIMZIA [Suspect]
     Active Substance: CERTOLIZUMAB PEGOL
     Route: 065
  435. CIMZIA [Suspect]
     Active Substance: CERTOLIZUMAB PEGOL
  436. CIMZIA [Suspect]
     Active Substance: CERTOLIZUMAB PEGOL
  437. CIMZIA [Suspect]
     Active Substance: CERTOLIZUMAB PEGOL
     Indication: Rheumatoid arthritis
  438. CIMZIA [Suspect]
     Active Substance: CERTOLIZUMAB PEGOL
  439. CIMZIA [Suspect]
     Active Substance: CERTOLIZUMAB PEGOL
     Route: 042
  440. CIMZIA [Suspect]
     Active Substance: CERTOLIZUMAB PEGOL
     Route: 042
  441. CIMZIA [Suspect]
     Active Substance: CERTOLIZUMAB PEGOL
     Dosage: 1 DOSAGE FORM, QD (1 EVERY 1 DAYS)
     Route: 058
  442. CIMZIA [Suspect]
     Active Substance: CERTOLIZUMAB PEGOL
     Dosage: 1 DOSAGE FORM, QD (1 EVERY 1 DAYS)
     Route: 058
  443. CIMZIA [Suspect]
     Active Substance: CERTOLIZUMAB PEGOL
     Dosage: 1 DOSAGE FORM, QD (1 EVERY 1 DAYS)
  444. CIMZIA [Suspect]
     Active Substance: CERTOLIZUMAB PEGOL
     Dosage: 1 DOSAGE FORM, QD (1 EVERY 1 DAYS)
  445. CIMZIA [Suspect]
     Active Substance: CERTOLIZUMAB PEGOL
     Route: 058
  446. CIMZIA [Suspect]
     Active Substance: CERTOLIZUMAB PEGOL
  447. CIMZIA [Suspect]
     Active Substance: CERTOLIZUMAB PEGOL
  448. CIMZIA [Suspect]
     Active Substance: CERTOLIZUMAB PEGOL
     Route: 058
  449. CIMZIA [Suspect]
     Active Substance: CERTOLIZUMAB PEGOL
  450. CIMZIA [Suspect]
     Active Substance: CERTOLIZUMAB PEGOL
  451. CIMZIA [Suspect]
     Active Substance: CERTOLIZUMAB PEGOL
     Route: 058
  452. CIMZIA [Suspect]
     Active Substance: CERTOLIZUMAB PEGOL
     Route: 058
  453. CORTISONE [Suspect]
     Active Substance: CORTISONE
     Indication: Rheumatoid arthritis
     Route: 065
  454. CORTISONE [Suspect]
     Active Substance: CORTISONE
  455. CORTISONE [Suspect]
     Active Substance: CORTISONE
  456. CORTISONE [Suspect]
     Active Substance: CORTISONE
     Route: 065
  457. CORTISONE [Suspect]
     Active Substance: CORTISONE
     Dosage: 25 MILLIGRAM, QD (1 EVERY 1 DAYS)
     Route: 061
  458. CORTISONE [Suspect]
     Active Substance: CORTISONE
     Dosage: 25 MILLIGRAM, QD (1 EVERY 1 DAYS)
     Route: 061
  459. CORTISONE [Suspect]
     Active Substance: CORTISONE
     Dosage: 25 MILLIGRAM, QD (1 EVERY 1 DAYS)
  460. CORTISONE [Suspect]
     Active Substance: CORTISONE
     Dosage: 25 MILLIGRAM, QD (1 EVERY 1 DAYS)
  461. CORTISONE [Suspect]
     Active Substance: CORTISONE
     Route: 048
  462. CORTISONE [Suspect]
     Active Substance: CORTISONE
     Route: 048
  463. CORTISONE [Suspect]
     Active Substance: CORTISONE
  464. CORTISONE [Suspect]
     Active Substance: CORTISONE
  465. CORTISONE [Suspect]
     Active Substance: CORTISONE
     Route: 058
  466. CORTISONE [Suspect]
     Active Substance: CORTISONE
  467. CORTISONE [Suspect]
     Active Substance: CORTISONE
  468. CORTISONE [Suspect]
     Active Substance: CORTISONE
     Route: 058
  469. CORTISONE [Suspect]
     Active Substance: CORTISONE
     Indication: Rheumatoid arthritis
     Route: 048
  470. CORTISONE [Suspect]
     Active Substance: CORTISONE
  471. CORTISONE [Suspect]
     Active Substance: CORTISONE
  472. CORTISONE [Suspect]
     Active Substance: CORTISONE
     Route: 048
  473. CORTISONE [Suspect]
     Active Substance: CORTISONE
     Route: 065
  474. CORTISONE [Suspect]
     Active Substance: CORTISONE
  475. CORTISONE [Suspect]
     Active Substance: CORTISONE
  476. CORTISONE [Suspect]
     Active Substance: CORTISONE
     Route: 065
  477. CORTISONE ACETATE [Suspect]
     Active Substance: CORTISONE ACETATE
     Indication: Rheumatoid arthritis
  478. CORTISONE ACETATE [Suspect]
     Active Substance: CORTISONE ACETATE
  479. CORTISONE ACETATE [Suspect]
     Active Substance: CORTISONE ACETATE
     Route: 058
  480. CORTISONE ACETATE [Suspect]
     Active Substance: CORTISONE ACETATE
     Route: 058
  481. CORTISONE ACETATE [Suspect]
     Active Substance: CORTISONE ACETATE
     Route: 065
  482. CORTISONE ACETATE [Suspect]
     Active Substance: CORTISONE ACETATE
     Route: 065
  483. CORTISONE ACETATE [Suspect]
     Active Substance: CORTISONE ACETATE
  484. CORTISONE ACETATE [Suspect]
     Active Substance: CORTISONE ACETATE
  485. CORTISONE ACETATE [Suspect]
     Active Substance: CORTISONE ACETATE
     Route: 003
  486. CORTISONE ACETATE [Suspect]
     Active Substance: CORTISONE ACETATE
  487. CORTISONE ACETATE [Suspect]
     Active Substance: CORTISONE ACETATE
  488. CORTISONE ACETATE [Suspect]
     Active Substance: CORTISONE ACETATE
     Route: 003
  489. CORTISONE ACETATE [Suspect]
     Active Substance: CORTISONE ACETATE
     Route: 061
  490. CORTISONE ACETATE [Suspect]
     Active Substance: CORTISONE ACETATE
     Route: 061
  491. CORTISONE ACETATE [Suspect]
     Active Substance: CORTISONE ACETATE
  492. CORTISONE ACETATE [Suspect]
     Active Substance: CORTISONE ACETATE
  493. CORTISONE ACETATE [Suspect]
     Active Substance: CORTISONE ACETATE
     Route: 065
  494. CORTISONE ACETATE [Suspect]
     Active Substance: CORTISONE ACETATE
  495. CORTISONE ACETATE [Suspect]
     Active Substance: CORTISONE ACETATE
  496. CORTISONE ACETATE [Suspect]
     Active Substance: CORTISONE ACETATE
     Route: 065
  497. CORTISONE ACETATE [Suspect]
     Active Substance: CORTISONE ACETATE
  498. CORTISONE ACETATE [Suspect]
     Active Substance: CORTISONE ACETATE
  499. CORTISONE ACETATE [Suspect]
     Active Substance: CORTISONE ACETATE
     Route: 061
  500. CORTISONE ACETATE [Suspect]
     Active Substance: CORTISONE ACETATE
     Route: 061
  501. COSENTYX [Suspect]
     Active Substance: SECUKINUMAB
     Indication: Product used for unknown indication
  502. COSENTYX [Suspect]
     Active Substance: SECUKINUMAB
     Route: 065
  503. COSENTYX [Suspect]
     Active Substance: SECUKINUMAB
     Route: 065
  504. COSENTYX [Suspect]
     Active Substance: SECUKINUMAB
  505. DESOXIMETASONE [Suspect]
     Active Substance: DESOXIMETASONE
     Indication: Rheumatoid arthritis
  506. DESOXIMETASONE [Suspect]
     Active Substance: DESOXIMETASONE
  507. DESOXIMETASONE [Suspect]
     Active Substance: DESOXIMETASONE
     Route: 058
  508. DESOXIMETASONE [Suspect]
     Active Substance: DESOXIMETASONE
     Route: 058
  509. DESOXIMETASONE [Suspect]
     Active Substance: DESOXIMETASONE
     Route: 058
  510. DESOXIMETASONE [Suspect]
     Active Substance: DESOXIMETASONE
     Route: 058
  511. DESOXIMETASONE [Suspect]
     Active Substance: DESOXIMETASONE
  512. DESOXIMETASONE [Suspect]
     Active Substance: DESOXIMETASONE
  513. DESOXIMETASONE [Suspect]
     Active Substance: DESOXIMETASONE
     Route: 003
  514. DESOXIMETASONE [Suspect]
     Active Substance: DESOXIMETASONE
     Route: 003
  515. DESOXIMETASONE [Suspect]
     Active Substance: DESOXIMETASONE
  516. DESOXIMETASONE [Suspect]
     Active Substance: DESOXIMETASONE
  517. DESOXIMETASONE [Suspect]
     Active Substance: DESOXIMETASONE
  518. DESOXIMETASONE [Suspect]
     Active Substance: DESOXIMETASONE
  519. DESOXIMETASONE [Suspect]
     Active Substance: DESOXIMETASONE
     Route: 048
  520. DESOXIMETASONE [Suspect]
     Active Substance: DESOXIMETASONE
     Route: 048
  521. DESOXIMETASONE [Suspect]
     Active Substance: DESOXIMETASONE
     Route: 065
  522. DESOXIMETASONE [Suspect]
     Active Substance: DESOXIMETASONE
  523. DESOXIMETASONE [Suspect]
     Active Substance: DESOXIMETASONE
  524. DESOXIMETASONE [Suspect]
     Active Substance: DESOXIMETASONE
     Route: 065
  525. DESOXIMETASONE [Suspect]
     Active Substance: DESOXIMETASONE
     Route: 065
  526. DESOXIMETASONE [Suspect]
     Active Substance: DESOXIMETASONE
     Route: 065
  527. DESOXIMETASONE [Suspect]
     Active Substance: DESOXIMETASONE
  528. DESOXIMETASONE [Suspect]
     Active Substance: DESOXIMETASONE
  529. DESOXIMETASONE [Suspect]
     Active Substance: DESOXIMETASONE
     Route: 061
  530. DESOXIMETASONE [Suspect]
     Active Substance: DESOXIMETASONE
     Route: 061
  531. DESOXIMETASONE [Suspect]
     Active Substance: DESOXIMETASONE
  532. DESOXIMETASONE [Suspect]
     Active Substance: DESOXIMETASONE
  533. DESOXIMETASONE [Suspect]
     Active Substance: DESOXIMETASONE
     Route: 048
  534. DESOXIMETASONE [Suspect]
     Active Substance: DESOXIMETASONE
  535. DESOXIMETASONE [Suspect]
     Active Substance: DESOXIMETASONE
  536. DESOXIMETASONE [Suspect]
     Active Substance: DESOXIMETASONE
     Route: 048
  537. DESOXIMETASONE [Suspect]
     Active Substance: DESOXIMETASONE
     Indication: Rheumatoid arthritis
  538. DESOXIMETASONE [Suspect]
     Active Substance: DESOXIMETASONE
  539. DESOXIMETASONE [Suspect]
     Active Substance: DESOXIMETASONE
     Route: 065
  540. DESOXIMETASONE [Suspect]
     Active Substance: DESOXIMETASONE
     Route: 065
  541. DESOXIMETASONE [Suspect]
     Active Substance: DESOXIMETASONE
     Route: 048
  542. DESOXIMETASONE [Suspect]
     Active Substance: DESOXIMETASONE
     Route: 048
  543. DESOXIMETASONE [Suspect]
     Active Substance: DESOXIMETASONE
  544. DESOXIMETASONE [Suspect]
     Active Substance: DESOXIMETASONE
  545. DESOXIMETASONE [Suspect]
     Active Substance: DESOXIMETASONE
     Route: 048
  546. DESOXIMETASONE [Suspect]
     Active Substance: DESOXIMETASONE
     Route: 048
  547. DESOXIMETASONE [Suspect]
     Active Substance: DESOXIMETASONE
  548. DESOXIMETASONE [Suspect]
     Active Substance: DESOXIMETASONE
  549. DESOXIMETASONE [Suspect]
     Active Substance: DESOXIMETASONE
  550. DESOXIMETASONE [Suspect]
     Active Substance: DESOXIMETASONE
  551. DESOXIMETASONE [Suspect]
     Active Substance: DESOXIMETASONE
     Route: 003
  552. DESOXIMETASONE [Suspect]
     Active Substance: DESOXIMETASONE
     Route: 003
  553. DESOXIMETASONE [Suspect]
     Active Substance: DESOXIMETASONE
  554. DESOXIMETASONE [Suspect]
     Active Substance: DESOXIMETASONE
  555. DESOXIMETASONE [Suspect]
     Active Substance: DESOXIMETASONE
     Route: 003
  556. DESOXIMETASONE [Suspect]
     Active Substance: DESOXIMETASONE
     Route: 003
  557. DESOXIMETASONE [Suspect]
     Active Substance: DESOXIMETASONE
     Route: 058
  558. DESOXIMETASONE [Suspect]
     Active Substance: DESOXIMETASONE
     Route: 058
  559. DESOXIMETASONE [Suspect]
     Active Substance: DESOXIMETASONE
  560. DESOXIMETASONE [Suspect]
     Active Substance: DESOXIMETASONE
  561. DESOXIMETASONE [Suspect]
     Active Substance: DESOXIMETASONE
     Route: 016
  562. DESOXIMETASONE [Suspect]
     Active Substance: DESOXIMETASONE
  563. DESOXIMETASONE [Suspect]
     Active Substance: DESOXIMETASONE
  564. DESOXIMETASONE [Suspect]
     Active Substance: DESOXIMETASONE
     Route: 016
  565. DICLOFENAC DIETHYLAMINE [Suspect]
     Active Substance: DICLOFENAC DIETHYLAMINE
     Indication: Product used for unknown indication
  566. DICLOFENAC DIETHYLAMINE [Suspect]
     Active Substance: DICLOFENAC DIETHYLAMINE
     Route: 065
  567. DICLOFENAC DIETHYLAMINE [Suspect]
     Active Substance: DICLOFENAC DIETHYLAMINE
     Route: 065
  568. DICLOFENAC DIETHYLAMINE [Suspect]
     Active Substance: DICLOFENAC DIETHYLAMINE
  569. DICLOFENAC POTASSIUM [Suspect]
     Active Substance: DICLOFENAC POTASSIUM
     Indication: Product used for unknown indication
     Route: 065
  570. DICLOFENAC POTASSIUM [Suspect]
     Active Substance: DICLOFENAC POTASSIUM
  571. DICLOFENAC POTASSIUM [Suspect]
     Active Substance: DICLOFENAC POTASSIUM
  572. DICLOFENAC POTASSIUM [Suspect]
     Active Substance: DICLOFENAC POTASSIUM
     Route: 065
  573. DICLOFENAC POTASSIUM [Suspect]
     Active Substance: DICLOFENAC POTASSIUM
     Route: 065
  574. DICLOFENAC POTASSIUM [Suspect]
     Active Substance: DICLOFENAC POTASSIUM
     Route: 065
  575. DICLOFENAC POTASSIUM [Suspect]
     Active Substance: DICLOFENAC POTASSIUM
  576. DICLOFENAC POTASSIUM [Suspect]
     Active Substance: DICLOFENAC POTASSIUM
  577. DICLOFENAC POTASSIUM [Suspect]
     Active Substance: DICLOFENAC POTASSIUM
     Dosage: 50 MILLIGRAM, QD (1 EVERY 1 DAYS)
  578. DICLOFENAC POTASSIUM [Suspect]
     Active Substance: DICLOFENAC POTASSIUM
     Dosage: 50 MILLIGRAM, QD (1 EVERY 1 DAYS)
     Route: 065
  579. DICLOFENAC POTASSIUM [Suspect]
     Active Substance: DICLOFENAC POTASSIUM
     Dosage: 50 MILLIGRAM, QD (1 EVERY 1 DAYS)
     Route: 065
  580. DICLOFENAC POTASSIUM [Suspect]
     Active Substance: DICLOFENAC POTASSIUM
     Dosage: 50 MILLIGRAM, QD (1 EVERY 1 DAYS)
  581. DICLOFENAC POTASSIUM [Suspect]
     Active Substance: DICLOFENAC POTASSIUM
     Route: 048
  582. DICLOFENAC POTASSIUM [Suspect]
     Active Substance: DICLOFENAC POTASSIUM
     Route: 048
  583. DICLOFENAC POTASSIUM [Suspect]
     Active Substance: DICLOFENAC POTASSIUM
  584. DICLOFENAC POTASSIUM [Suspect]
     Active Substance: DICLOFENAC POTASSIUM
  585. DICLOFENAC POTASSIUM [Suspect]
     Active Substance: DICLOFENAC POTASSIUM
     Route: 058
  586. DICLOFENAC POTASSIUM [Suspect]
     Active Substance: DICLOFENAC POTASSIUM
     Route: 058
  587. DICLOFENAC POTASSIUM [Suspect]
     Active Substance: DICLOFENAC POTASSIUM
  588. DICLOFENAC POTASSIUM [Suspect]
     Active Substance: DICLOFENAC POTASSIUM
  589. DICLOFENAC POTASSIUM [Suspect]
     Active Substance: DICLOFENAC POTASSIUM
  590. DICLOFENAC POTASSIUM [Suspect]
     Active Substance: DICLOFENAC POTASSIUM
  591. DICLOFENAC POTASSIUM [Suspect]
     Active Substance: DICLOFENAC POTASSIUM
     Route: 047
  592. DICLOFENAC POTASSIUM [Suspect]
     Active Substance: DICLOFENAC POTASSIUM
     Route: 047
  593. DICLOFENAC POTASSIUM [Suspect]
     Active Substance: DICLOFENAC POTASSIUM
     Indication: Rheumatoid arthritis
  594. DICLOFENAC POTASSIUM [Suspect]
     Active Substance: DICLOFENAC POTASSIUM
  595. DICLOFENAC POTASSIUM [Suspect]
     Active Substance: DICLOFENAC POTASSIUM
     Route: 065
  596. DICLOFENAC POTASSIUM [Suspect]
     Active Substance: DICLOFENAC POTASSIUM
     Route: 065
  597. DICLOFENAC POTASSIUM [Suspect]
     Active Substance: DICLOFENAC POTASSIUM
     Route: 048
  598. DICLOFENAC POTASSIUM [Suspect]
     Active Substance: DICLOFENAC POTASSIUM
     Route: 048
  599. DICLOFENAC POTASSIUM [Suspect]
     Active Substance: DICLOFENAC POTASSIUM
  600. DICLOFENAC POTASSIUM [Suspect]
     Active Substance: DICLOFENAC POTASSIUM
  601. DICLOFENAC POTASSIUM [Suspect]
     Active Substance: DICLOFENAC POTASSIUM
     Route: 065
  602. DICLOFENAC POTASSIUM [Suspect]
     Active Substance: DICLOFENAC POTASSIUM
     Route: 065
  603. DICLOFENAC POTASSIUM [Suspect]
     Active Substance: DICLOFENAC POTASSIUM
  604. DICLOFENAC POTASSIUM [Suspect]
     Active Substance: DICLOFENAC POTASSIUM
  605. DICLOFENAC POTASSIUM [Suspect]
     Active Substance: DICLOFENAC POTASSIUM
     Dosage: 50 MILLIGRAM, QD (1 EVERY 1 DAY)
  606. DICLOFENAC POTASSIUM [Suspect]
     Active Substance: DICLOFENAC POTASSIUM
     Dosage: 50 MILLIGRAM, QD (1 EVERY 1 DAY)
  607. DICLOFENAC POTASSIUM [Suspect]
     Active Substance: DICLOFENAC POTASSIUM
     Dosage: 50 MILLIGRAM, QD (1 EVERY 1 DAY)
     Route: 065
  608. DICLOFENAC POTASSIUM [Suspect]
     Active Substance: DICLOFENAC POTASSIUM
     Dosage: 50 MILLIGRAM, QD (1 EVERY 1 DAY)
     Route: 065
  609. DICLOFENAC POTASSIUM [Suspect]
     Active Substance: DICLOFENAC POTASSIUM
  610. DICLOFENAC POTASSIUM [Suspect]
     Active Substance: DICLOFENAC POTASSIUM
  611. DICLOFENAC POTASSIUM [Suspect]
     Active Substance: DICLOFENAC POTASSIUM
     Route: 065
  612. DICLOFENAC POTASSIUM [Suspect]
     Active Substance: DICLOFENAC POTASSIUM
     Route: 065
  613. DICLOFENAC POTASSIUM [Suspect]
     Active Substance: DICLOFENAC POTASSIUM
     Route: 065
  614. DICLOFENAC POTASSIUM [Suspect]
     Active Substance: DICLOFENAC POTASSIUM
     Route: 065
  615. DICLOFENAC POTASSIUM [Suspect]
     Active Substance: DICLOFENAC POTASSIUM
  616. DICLOFENAC POTASSIUM [Suspect]
     Active Substance: DICLOFENAC POTASSIUM
  617. DICLOFENAC POTASSIUM [Suspect]
     Active Substance: DICLOFENAC POTASSIUM
     Route: 058
  618. DICLOFENAC POTASSIUM [Suspect]
     Active Substance: DICLOFENAC POTASSIUM
  619. DICLOFENAC POTASSIUM [Suspect]
     Active Substance: DICLOFENAC POTASSIUM
  620. DICLOFENAC POTASSIUM [Suspect]
     Active Substance: DICLOFENAC POTASSIUM
     Route: 058
  621. DICLOFENAC SODIUM [Suspect]
     Active Substance: DICLOFENAC SODIUM
     Indication: Product used for unknown indication
  622. DICLOFENAC SODIUM [Suspect]
     Active Substance: DICLOFENAC SODIUM
  623. DICLOFENAC SODIUM [Suspect]
     Active Substance: DICLOFENAC SODIUM
     Route: 047
  624. DICLOFENAC SODIUM [Suspect]
     Active Substance: DICLOFENAC SODIUM
     Route: 047
  625. DICLOFENAC SODIUM [Suspect]
     Active Substance: DICLOFENAC SODIUM
  626. DICLOFENAC SODIUM [Suspect]
     Active Substance: DICLOFENAC SODIUM
  627. DICLOFENAC SODIUM [Suspect]
     Active Substance: DICLOFENAC SODIUM
     Route: 065
  628. DICLOFENAC SODIUM [Suspect]
     Active Substance: DICLOFENAC SODIUM
     Route: 065
  629. DICLOFENAC SODIUM [Suspect]
     Active Substance: DICLOFENAC SODIUM
  630. DICLOFENAC SODIUM [Suspect]
     Active Substance: DICLOFENAC SODIUM
     Route: 065
  631. DICLOFENAC SODIUM [Suspect]
     Active Substance: DICLOFENAC SODIUM
  632. DICLOFENAC SODIUM [Suspect]
     Active Substance: DICLOFENAC SODIUM
     Route: 065
  633. DICLOFENAC SODIUM [Suspect]
     Active Substance: DICLOFENAC SODIUM
     Indication: Rheumatoid arthritis
  634. DICLOFENAC SODIUM [Suspect]
     Active Substance: DICLOFENAC SODIUM
  635. DICLOFENAC SODIUM [Suspect]
     Active Substance: DICLOFENAC SODIUM
     Route: 065
  636. DICLOFENAC SODIUM [Suspect]
     Active Substance: DICLOFENAC SODIUM
     Route: 065
  637. DICLOFENAC SODIUM [Suspect]
     Active Substance: DICLOFENAC SODIUM
  638. DICLOFENAC SODIUM [Suspect]
     Active Substance: DICLOFENAC SODIUM
  639. DICLOFENAC SODIUM [Suspect]
     Active Substance: DICLOFENAC SODIUM
     Route: 065
  640. DICLOFENAC SODIUM [Suspect]
     Active Substance: DICLOFENAC SODIUM
     Route: 065
  641. DILTIAZEM [Suspect]
     Active Substance: DILTIAZEM
     Indication: Product used for unknown indication
  642. DILTIAZEM [Suspect]
     Active Substance: DILTIAZEM
  643. DILTIAZEM [Suspect]
     Active Substance: DILTIAZEM
     Route: 042
  644. DILTIAZEM [Suspect]
     Active Substance: DILTIAZEM
     Route: 042
  645. DILTIAZEM [Suspect]
     Active Substance: DILTIAZEM
  646. DILTIAZEM [Suspect]
     Active Substance: DILTIAZEM
  647. DILTIAZEM [Suspect]
     Active Substance: DILTIAZEM
     Route: 065
  648. DILTIAZEM [Suspect]
     Active Substance: DILTIAZEM
     Route: 065
  649. ENBREL [Suspect]
     Active Substance: ETANERCEPT
     Indication: Rheumatoid arthritis
  650. ENBREL [Suspect]
     Active Substance: ETANERCEPT
  651. ENBREL [Suspect]
     Active Substance: ETANERCEPT
     Route: 058
  652. ENBREL [Suspect]
     Active Substance: ETANERCEPT
     Route: 058
  653. ENBREL [Suspect]
     Active Substance: ETANERCEPT
     Dosage: 20 MILLIGRAM, QW (1 EVERY 1 WEEKS)
     Route: 058
  654. ENBREL [Suspect]
     Active Substance: ETANERCEPT
     Dosage: 20 MILLIGRAM, QW (1 EVERY 1 WEEKS)
     Route: 058
  655. ENBREL [Suspect]
     Active Substance: ETANERCEPT
     Dosage: 20 MILLIGRAM, QW (1 EVERY 1 WEEKS)
  656. ENBREL [Suspect]
     Active Substance: ETANERCEPT
     Dosage: 20 MILLIGRAM, QW (1 EVERY 1 WEEKS)
  657. ENBREL [Suspect]
     Active Substance: ETANERCEPT
     Route: 058
  658. ENBREL [Suspect]
     Active Substance: ETANERCEPT
     Route: 058
  659. ENBREL [Suspect]
     Active Substance: ETANERCEPT
  660. ENBREL [Suspect]
     Active Substance: ETANERCEPT
  661. ENBREL [Suspect]
     Active Substance: ETANERCEPT
     Route: 058
  662. ENBREL [Suspect]
     Active Substance: ETANERCEPT
     Route: 058
  663. ENBREL [Suspect]
     Active Substance: ETANERCEPT
  664. ENBREL [Suspect]
     Active Substance: ETANERCEPT
  665. ENBREL [Suspect]
     Active Substance: ETANERCEPT
     Route: 058
  666. ENBREL [Suspect]
     Active Substance: ETANERCEPT
     Route: 058
  667. ENBREL [Suspect]
     Active Substance: ETANERCEPT
  668. ENBREL [Suspect]
     Active Substance: ETANERCEPT
  669. ENBREL [Suspect]
     Active Substance: ETANERCEPT
     Dosage: 50 MILLIGRAM, QW  (1 EVERY 1 WEEKS)
     Route: 058
  670. ENBREL [Suspect]
     Active Substance: ETANERCEPT
     Dosage: 50 MILLIGRAM, QW  (1 EVERY 1 WEEKS)
     Route: 058
  671. ENBREL [Suspect]
     Active Substance: ETANERCEPT
     Dosage: 50 MILLIGRAM, QW  (1 EVERY 1 WEEKS)
  672. ENBREL [Suspect]
     Active Substance: ETANERCEPT
     Dosage: 50 MILLIGRAM, QW  (1 EVERY 1 WEEKS)
  673. ENBREL [Suspect]
     Active Substance: ETANERCEPT
     Route: 065
  674. ENBREL [Suspect]
     Active Substance: ETANERCEPT
     Route: 065
  675. ENBREL [Suspect]
     Active Substance: ETANERCEPT
  676. ENBREL [Suspect]
     Active Substance: ETANERCEPT
  677. ENBREL [Suspect]
     Active Substance: ETANERCEPT
     Dosage: 20 MILLIGRAM, QD (1 EVERY 1 DAYS)
  678. ENBREL [Suspect]
     Active Substance: ETANERCEPT
     Dosage: 20 MILLIGRAM, QD (1 EVERY 1 DAYS)
  679. ENBREL [Suspect]
     Active Substance: ETANERCEPT
     Dosage: 20 MILLIGRAM, QD (1 EVERY 1 DAYS)
     Route: 058
  680. ENBREL [Suspect]
     Active Substance: ETANERCEPT
     Dosage: 20 MILLIGRAM, QD (1 EVERY 1 DAYS)
     Route: 058
  681. ENTYVIO [Suspect]
     Active Substance: VEDOLIZUMAB
     Indication: Product used for unknown indication
  682. ENTYVIO [Suspect]
     Active Substance: VEDOLIZUMAB
     Route: 065
  683. ENTYVIO [Suspect]
     Active Substance: VEDOLIZUMAB
     Route: 065
  684. ENTYVIO [Suspect]
     Active Substance: VEDOLIZUMAB
  685. ERELZI [Suspect]
     Active Substance: ETANERCEPT-SZZS
     Indication: Rheumatoid arthritis
  686. ERELZI [Suspect]
     Active Substance: ETANERCEPT-SZZS
     Route: 058
  687. ERELZI [Suspect]
     Active Substance: ETANERCEPT-SZZS
     Route: 058
  688. ERELZI [Suspect]
     Active Substance: ETANERCEPT-SZZS
  689. ERELZI [Suspect]
     Active Substance: ETANERCEPT-SZZS
  690. ERELZI [Suspect]
     Active Substance: ETANERCEPT-SZZS
     Route: 065
  691. ERELZI [Suspect]
     Active Substance: ETANERCEPT-SZZS
  692. ERELZI [Suspect]
     Active Substance: ETANERCEPT-SZZS
     Route: 065
  693. ERELZI [Suspect]
     Active Substance: ETANERCEPT-SZZS
     Route: 065
  694. ERELZI [Suspect]
     Active Substance: ETANERCEPT-SZZS
     Route: 065
  695. ERELZI [Suspect]
     Active Substance: ETANERCEPT-SZZS
  696. ERELZI [Suspect]
     Active Substance: ETANERCEPT-SZZS
  697. FLUMETHASONE PIVALATE [Suspect]
     Active Substance: FLUMETHASONE PIVALATE
     Indication: Rheumatoid arthritis
  698. FLUMETHASONE PIVALATE [Suspect]
     Active Substance: FLUMETHASONE PIVALATE
     Route: 065
  699. FLUMETHASONE PIVALATE [Suspect]
     Active Substance: FLUMETHASONE PIVALATE
     Route: 065
  700. FLUMETHASONE PIVALATE [Suspect]
     Active Substance: FLUMETHASONE PIVALATE
  701. FOLIC ACID [Suspect]
     Active Substance: FOLIC ACID
     Indication: Rheumatoid arthritis
  702. FOLIC ACID [Suspect]
     Active Substance: FOLIC ACID
     Route: 058
  703. FOLIC ACID [Suspect]
     Active Substance: FOLIC ACID
     Route: 058
  704. FOLIC ACID [Suspect]
     Active Substance: FOLIC ACID
  705. FOLIC ACID [Suspect]
     Active Substance: FOLIC ACID
     Indication: Rheumatoid arthritis
  706. FOLIC ACID [Suspect]
     Active Substance: FOLIC ACID
  707. FOLIC ACID [Suspect]
     Active Substance: FOLIC ACID
     Route: 048
  708. FOLIC ACID [Suspect]
     Active Substance: FOLIC ACID
     Route: 048
  709. FOLIC ACID [Suspect]
     Active Substance: FOLIC ACID
     Route: 048
  710. FOLIC ACID [Suspect]
     Active Substance: FOLIC ACID
     Route: 048
  711. FOLIC ACID [Suspect]
     Active Substance: FOLIC ACID
  712. FOLIC ACID [Suspect]
     Active Substance: FOLIC ACID
  713. FOLIC ACID [Suspect]
     Active Substance: FOLIC ACID
     Route: 065
  714. FOLIC ACID [Suspect]
     Active Substance: FOLIC ACID
     Route: 065
  715. FOLIC ACID [Suspect]
     Active Substance: FOLIC ACID
  716. FOLIC ACID [Suspect]
     Active Substance: FOLIC ACID
  717. FOLIC ACID [Suspect]
     Active Substance: FOLIC ACID
  718. FOLIC ACID [Suspect]
     Active Substance: FOLIC ACID
  719. FOLIC ACID [Suspect]
     Active Substance: FOLIC ACID
     Route: 048
  720. FOLIC ACID [Suspect]
     Active Substance: FOLIC ACID
     Route: 048
  721. FOLIC ACID [Suspect]
     Active Substance: FOLIC ACID
     Route: 065
  722. FOLIC ACID [Suspect]
     Active Substance: FOLIC ACID
  723. FOLIC ACID [Suspect]
     Active Substance: FOLIC ACID
  724. FOLIC ACID [Suspect]
     Active Substance: FOLIC ACID
     Route: 065
  725. FOLIC ACID [Suspect]
     Active Substance: FOLIC ACID
     Route: 065
  726. FOLIC ACID [Suspect]
     Active Substance: FOLIC ACID
     Route: 065
  727. FOLIC ACID [Suspect]
     Active Substance: FOLIC ACID
  728. FOLIC ACID [Suspect]
     Active Substance: FOLIC ACID
  729. FOLIC ACID [Suspect]
     Active Substance: FOLIC ACID
  730. FOLIC ACID [Suspect]
     Active Substance: FOLIC ACID
  731. FOLIC ACID [Suspect]
     Active Substance: FOLIC ACID
     Route: 065
  732. FOLIC ACID [Suspect]
     Active Substance: FOLIC ACID
     Route: 065
  733. FOLIC ACID [Suspect]
     Active Substance: FOLIC ACID
     Route: 065
  734. FOLIC ACID [Suspect]
     Active Substance: FOLIC ACID
  735. FOLIC ACID [Suspect]
     Active Substance: FOLIC ACID
  736. FOLIC ACID [Suspect]
     Active Substance: FOLIC ACID
     Route: 065
  737. FOLIC ACID [Suspect]
     Active Substance: FOLIC ACID
     Route: 065
  738. FOLIC ACID [Suspect]
     Active Substance: FOLIC ACID
     Route: 065
  739. FOLIC ACID [Suspect]
     Active Substance: FOLIC ACID
  740. FOLIC ACID [Suspect]
     Active Substance: FOLIC ACID
  741. FOLIC ACID [Suspect]
     Active Substance: FOLIC ACID
     Route: 049
  742. FOLIC ACID [Suspect]
     Active Substance: FOLIC ACID
     Route: 049
  743. FOLIC ACID [Suspect]
     Active Substance: FOLIC ACID
  744. FOLIC ACID [Suspect]
     Active Substance: FOLIC ACID
  745. FOLIC ACID [Suspect]
     Active Substance: FOLIC ACID
     Dosage: 1 MILLIGRAM, QD (1 EVERY 1 DAY)
     Route: 005
  746. FOLIC ACID [Suspect]
     Active Substance: FOLIC ACID
     Dosage: 1 MILLIGRAM, QD (1 EVERY 1 DAY)
  747. FOLIC ACID [Suspect]
     Active Substance: FOLIC ACID
     Dosage: 1 MILLIGRAM, QD (1 EVERY 1 DAY)
  748. FOLIC ACID [Suspect]
     Active Substance: FOLIC ACID
     Dosage: 1 MILLIGRAM, QD (1 EVERY 1 DAY)
     Route: 005
  749. FOSAMAX [Suspect]
     Active Substance: ALENDRONATE SODIUM
     Indication: Rheumatoid arthritis
  750. FOSAMAX [Suspect]
     Active Substance: ALENDRONATE SODIUM
     Route: 048
  751. FOSAMAX [Suspect]
     Active Substance: ALENDRONATE SODIUM
     Route: 048
  752. FOSAMAX [Suspect]
     Active Substance: ALENDRONATE SODIUM
  753. GOLIMUMAB [Suspect]
     Active Substance: GOLIMUMAB
     Indication: Rheumatoid arthritis
     Route: 065
  754. GOLIMUMAB [Suspect]
     Active Substance: GOLIMUMAB
  755. GOLIMUMAB [Suspect]
     Active Substance: GOLIMUMAB
  756. GOLIMUMAB [Suspect]
     Active Substance: GOLIMUMAB
     Route: 065
  757. GOLIMUMAB [Suspect]
     Active Substance: GOLIMUMAB
     Route: 058
  758. GOLIMUMAB [Suspect]
     Active Substance: GOLIMUMAB
  759. GOLIMUMAB [Suspect]
     Active Substance: GOLIMUMAB
  760. GOLIMUMAB [Suspect]
     Active Substance: GOLIMUMAB
     Route: 058
  761. HYDROCORTISONE [Suspect]
     Active Substance: HYDROCORTISONE
     Indication: Product used for unknown indication
  762. HYDROCORTISONE [Suspect]
     Active Substance: HYDROCORTISONE
     Route: 048
  763. HYDROCORTISONE [Suspect]
     Active Substance: HYDROCORTISONE
     Route: 048
  764. HYDROCORTISONE [Suspect]
     Active Substance: HYDROCORTISONE
  765. HYDROCORTISONE [Suspect]
     Active Substance: HYDROCORTISONE
     Indication: Product used for unknown indication
  766. HYDROCORTISONE [Suspect]
     Active Substance: HYDROCORTISONE
     Route: 003
  767. HYDROCORTISONE [Suspect]
     Active Substance: HYDROCORTISONE
     Route: 003
  768. HYDROCORTISONE [Suspect]
     Active Substance: HYDROCORTISONE
  769. HYDROCORTISONE SODIUM SUCCINATE [Suspect]
     Active Substance: HYDROCORTISONE SODIUM SUCCINATE
     Indication: Rheumatoid arthritis
  770. HYDROCORTISONE SODIUM SUCCINATE [Suspect]
     Active Substance: HYDROCORTISONE SODIUM SUCCINATE
  771. HYDROCORTISONE SODIUM SUCCINATE [Suspect]
     Active Substance: HYDROCORTISONE SODIUM SUCCINATE
     Route: 065
  772. HYDROCORTISONE SODIUM SUCCINATE [Suspect]
     Active Substance: HYDROCORTISONE SODIUM SUCCINATE
     Route: 065
  773. HYDROCORTISONE SODIUM SUCCINATE [Suspect]
     Active Substance: HYDROCORTISONE SODIUM SUCCINATE
  774. HYDROCORTISONE SODIUM SUCCINATE [Suspect]
     Active Substance: HYDROCORTISONE SODIUM SUCCINATE
  775. HYDROCORTISONE SODIUM SUCCINATE [Suspect]
     Active Substance: HYDROCORTISONE SODIUM SUCCINATE
     Route: 065
  776. HYDROCORTISONE SODIUM SUCCINATE [Suspect]
     Active Substance: HYDROCORTISONE SODIUM SUCCINATE
     Route: 065
  777. HYDROCORTISONE SODIUM SUCCINATE [Suspect]
     Active Substance: HYDROCORTISONE SODIUM SUCCINATE
  778. HYDROCORTISONE SODIUM SUCCINATE [Suspect]
     Active Substance: HYDROCORTISONE SODIUM SUCCINATE
     Route: 048
  779. HYDROCORTISONE SODIUM SUCCINATE [Suspect]
     Active Substance: HYDROCORTISONE SODIUM SUCCINATE
  780. HYDROCORTISONE SODIUM SUCCINATE [Suspect]
     Active Substance: HYDROCORTISONE SODIUM SUCCINATE
     Route: 048
  781. HYDROXYCHLOROQUINE [Suspect]
     Active Substance: HYDROXYCHLOROQUINE
     Indication: Rheumatoid arthritis
  782. HYDROXYCHLOROQUINE [Suspect]
     Active Substance: HYDROXYCHLOROQUINE
  783. HYDROXYCHLOROQUINE [Suspect]
     Active Substance: HYDROXYCHLOROQUINE
     Route: 048
  784. HYDROXYCHLOROQUINE [Suspect]
     Active Substance: HYDROXYCHLOROQUINE
     Route: 048
  785. HYDROXYCHLOROQUINE [Suspect]
     Active Substance: HYDROXYCHLOROQUINE
  786. HYDROXYCHLOROQUINE [Suspect]
     Active Substance: HYDROXYCHLOROQUINE
  787. HYDROXYCHLOROQUINE [Suspect]
     Active Substance: HYDROXYCHLOROQUINE
     Route: 048
  788. HYDROXYCHLOROQUINE [Suspect]
     Active Substance: HYDROXYCHLOROQUINE
     Route: 048
  789. HYDROXYCHLOROQUINE [Suspect]
     Active Substance: HYDROXYCHLOROQUINE
  790. HYDROXYCHLOROQUINE [Suspect]
     Active Substance: HYDROXYCHLOROQUINE
     Route: 065
  791. HYDROXYCHLOROQUINE [Suspect]
     Active Substance: HYDROXYCHLOROQUINE
  792. HYDROXYCHLOROQUINE [Suspect]
     Active Substance: HYDROXYCHLOROQUINE
     Route: 065
  793. INFLIXIMAB [Suspect]
     Active Substance: INFLIXIMAB
     Indication: Rheumatoid arthritis
     Route: 042
  794. INFLIXIMAB [Suspect]
     Active Substance: INFLIXIMAB
     Indication: Colitis ulcerative
  795. INFLIXIMAB [Suspect]
     Active Substance: INFLIXIMAB
  796. INFLIXIMAB [Suspect]
     Active Substance: INFLIXIMAB
     Route: 042
  797. INFLIXIMAB [Suspect]
     Active Substance: INFLIXIMAB
     Route: 042
  798. INFLIXIMAB [Suspect]
     Active Substance: INFLIXIMAB
  799. INFLIXIMAB [Suspect]
     Active Substance: INFLIXIMAB
  800. INFLIXIMAB [Suspect]
     Active Substance: INFLIXIMAB
     Route: 042
  801. INFLIXIMAB [Suspect]
     Active Substance: INFLIXIMAB
     Route: 065
  802. INFLIXIMAB [Suspect]
     Active Substance: INFLIXIMAB
     Route: 065
  803. INFLIXIMAB [Suspect]
     Active Substance: INFLIXIMAB
  804. INFLIXIMAB [Suspect]
     Active Substance: INFLIXIMAB
  805. ISOPROPYL ALCOHOL [Suspect]
     Active Substance: ISOPROPYL ALCOHOL
     Indication: Product used for unknown indication
     Route: 061
  806. ISOPROPYL ALCOHOL [Suspect]
     Active Substance: ISOPROPYL ALCOHOL
  807. ISOPROPYL ALCOHOL [Suspect]
     Active Substance: ISOPROPYL ALCOHOL
  808. ISOPROPYL ALCOHOL [Suspect]
     Active Substance: ISOPROPYL ALCOHOL
     Route: 061
  809. ISOPROPYL ALCOHOL [Suspect]
     Active Substance: ISOPROPYL ALCOHOL
     Route: 048
  810. ISOPROPYL ALCOHOL [Suspect]
     Active Substance: ISOPROPYL ALCOHOL
  811. ISOPROPYL ALCOHOL [Suspect]
     Active Substance: ISOPROPYL ALCOHOL
  812. ISOPROPYL ALCOHOL [Suspect]
     Active Substance: ISOPROPYL ALCOHOL
     Route: 048
  813. KEVZARA [Suspect]
     Active Substance: SARILUMAB
     Indication: Rheumatoid arthritis
  814. KEVZARA [Suspect]
     Active Substance: SARILUMAB
     Route: 065
  815. KEVZARA [Suspect]
     Active Substance: SARILUMAB
     Route: 065
  816. KEVZARA [Suspect]
     Active Substance: SARILUMAB
  817. LEFLUNOMIDE [Suspect]
     Active Substance: LEFLUNOMIDE
     Indication: Rheumatoid arthritis
  818. LEFLUNOMIDE [Suspect]
     Active Substance: LEFLUNOMIDE
  819. LEFLUNOMIDE [Suspect]
     Active Substance: LEFLUNOMIDE
     Route: 048
  820. LEFLUNOMIDE [Suspect]
     Active Substance: LEFLUNOMIDE
     Route: 048
  821. LEFLUNOMIDE [Suspect]
     Active Substance: LEFLUNOMIDE
  822. LEFLUNOMIDE [Suspect]
     Active Substance: LEFLUNOMIDE
  823. LEFLUNOMIDE [Suspect]
     Active Substance: LEFLUNOMIDE
     Route: 048
  824. LEFLUNOMIDE [Suspect]
     Active Substance: LEFLUNOMIDE
     Route: 048
  825. LEFLUNOMIDE [Suspect]
     Active Substance: LEFLUNOMIDE
     Indication: Rheumatoid arthritis
  826. LEFLUNOMIDE [Suspect]
     Active Substance: LEFLUNOMIDE
  827. LEFLUNOMIDE [Suspect]
     Active Substance: LEFLUNOMIDE
     Route: 048
  828. LEFLUNOMIDE [Suspect]
     Active Substance: LEFLUNOMIDE
     Route: 048
  829. LEFLUNOMIDE [Suspect]
     Active Substance: LEFLUNOMIDE
  830. LEFLUNOMIDE [Suspect]
     Active Substance: LEFLUNOMIDE
  831. LEFLUNOMIDE [Suspect]
     Active Substance: LEFLUNOMIDE
     Route: 048
  832. LEFLUNOMIDE [Suspect]
     Active Substance: LEFLUNOMIDE
     Route: 048
  833. LEFLUNOMIDE [Suspect]
     Active Substance: LEFLUNOMIDE
  834. LEFLUNOMIDE [Suspect]
     Active Substance: LEFLUNOMIDE
     Route: 048
  835. LEFLUNOMIDE [Suspect]
     Active Substance: LEFLUNOMIDE
  836. LEFLUNOMIDE [Suspect]
     Active Substance: LEFLUNOMIDE
     Route: 048
  837. METHOTREXATE [Suspect]
     Active Substance: METHOTREXATE
     Indication: Rheumatoid arthritis
     Dosage: 25 MILLIGRAM, QW (1 EVERY 1 WEEKS)
     Route: 013
  838. METHOTREXATE [Suspect]
     Active Substance: METHOTREXATE
     Dosage: 25 MILLIGRAM, QW (1 EVERY 1 WEEKS)
  839. METHOTREXATE [Suspect]
     Active Substance: METHOTREXATE
     Dosage: 25 MILLIGRAM, QW (1 EVERY 1 WEEKS)
  840. METHOTREXATE [Suspect]
     Active Substance: METHOTREXATE
     Dosage: 25 MILLIGRAM, QW (1 EVERY 1 WEEKS)
     Route: 013
  841. METHOTREXATE [Suspect]
     Active Substance: METHOTREXATE
     Route: 013
  842. METHOTREXATE [Suspect]
     Active Substance: METHOTREXATE
  843. METHOTREXATE [Suspect]
     Active Substance: METHOTREXATE
  844. METHOTREXATE [Suspect]
     Active Substance: METHOTREXATE
     Route: 013
  845. METHOTREXATE [Suspect]
     Active Substance: METHOTREXATE
     Dosage: 25 MILLIGRAM, QD (1 EVERY 1 DAYS)
  846. METHOTREXATE [Suspect]
     Active Substance: METHOTREXATE
     Dosage: 25 MILLIGRAM, QD (1 EVERY 1 DAYS)
  847. METHOTREXATE [Suspect]
     Active Substance: METHOTREXATE
     Dosage: 25 MILLIGRAM, QD (1 EVERY 1 DAYS)
     Route: 013
  848. METHOTREXATE [Suspect]
     Active Substance: METHOTREXATE
     Dosage: 25 MILLIGRAM, QD (1 EVERY 1 DAYS)
     Route: 013
  849. METHOTREXATE [Suspect]
     Active Substance: METHOTREXATE
  850. METHOTREXATE [Suspect]
     Active Substance: METHOTREXATE
  851. METHOTREXATE [Suspect]
     Active Substance: METHOTREXATE
     Route: 013
  852. METHOTREXATE [Suspect]
     Active Substance: METHOTREXATE
     Route: 013
  853. METHOTREXATE [Suspect]
     Active Substance: METHOTREXATE
     Indication: Rheumatoid arthritis
     Dosage: 20 MILLIGRAM, QD ( 1 EVERY 1 DAYS)
     Route: 048
  854. METHOTREXATE [Suspect]
     Active Substance: METHOTREXATE
     Dosage: 20 MILLIGRAM, QD ( 1 EVERY 1 DAYS)
  855. METHOTREXATE [Suspect]
     Active Substance: METHOTREXATE
     Dosage: 20 MILLIGRAM, QD ( 1 EVERY 1 DAYS)
  856. METHOTREXATE [Suspect]
     Active Substance: METHOTREXATE
     Dosage: 20 MILLIGRAM, QD ( 1 EVERY 1 DAYS)
     Route: 048
  857. METHOTREXATE [Suspect]
     Active Substance: METHOTREXATE
     Dosage: 20 MILLIGRAM, QW (1 EVERY 1 WEEKS)
  858. METHOTREXATE [Suspect]
     Active Substance: METHOTREXATE
     Dosage: 20 MILLIGRAM, QW (1 EVERY 1 WEEKS)
  859. METHOTREXATE [Suspect]
     Active Substance: METHOTREXATE
     Dosage: 20 MILLIGRAM, QW (1 EVERY 1 WEEKS)
     Route: 048
  860. METHOTREXATE [Suspect]
     Active Substance: METHOTREXATE
     Dosage: 20 MILLIGRAM, QW (1 EVERY 1 WEEKS)
     Route: 048
  861. METHOTREXATE [Suspect]
     Active Substance: METHOTREXATE
  862. METHOTREXATE [Suspect]
     Active Substance: METHOTREXATE
     Route: 048
  863. METHOTREXATE [Suspect]
     Active Substance: METHOTREXATE
  864. METHOTREXATE [Suspect]
     Active Substance: METHOTREXATE
     Route: 048
  865. METHOTREXATE [Suspect]
     Active Substance: METHOTREXATE
     Dosage: 20 MILLIGRAM, QD ( 1 EVERY 1 DAYS)
  866. METHOTREXATE [Suspect]
     Active Substance: METHOTREXATE
     Dosage: 20 MILLIGRAM, QD ( 1 EVERY 1 DAYS)
  867. METHOTREXATE [Suspect]
     Active Substance: METHOTREXATE
     Dosage: 20 MILLIGRAM, QD ( 1 EVERY 1 DAYS)
     Route: 065
  868. METHOTREXATE [Suspect]
     Active Substance: METHOTREXATE
     Dosage: 20 MILLIGRAM, QD ( 1 EVERY 1 DAYS)
     Route: 065
  869. METHOTREXATE [Suspect]
     Active Substance: METHOTREXATE
  870. METHOTREXATE [Suspect]
     Active Substance: METHOTREXATE
  871. METHOTREXATE [Suspect]
     Active Substance: METHOTREXATE
     Route: 065
  872. METHOTREXATE [Suspect]
     Active Substance: METHOTREXATE
     Route: 065
  873. METHOTREXATE [Suspect]
     Active Substance: METHOTREXATE
     Dosage: 25 MILLIGRAM, QD ( 1 EVERY 1 DAYS)
  874. METHOTREXATE [Suspect]
     Active Substance: METHOTREXATE
     Dosage: 25 MILLIGRAM, QD ( 1 EVERY 1 DAYS)
  875. METHOTREXATE [Suspect]
     Active Substance: METHOTREXATE
     Dosage: 25 MILLIGRAM, QD ( 1 EVERY 1 DAYS)
     Route: 065
  876. METHOTREXATE [Suspect]
     Active Substance: METHOTREXATE
     Dosage: 25 MILLIGRAM, QD ( 1 EVERY 1 DAYS)
     Route: 065
  877. METHOTREXATE [Suspect]
     Active Substance: METHOTREXATE
  878. METHOTREXATE [Suspect]
     Active Substance: METHOTREXATE
  879. METHOTREXATE [Suspect]
     Active Substance: METHOTREXATE
     Route: 065
  880. METHOTREXATE [Suspect]
     Active Substance: METHOTREXATE
     Route: 065
  881. METHOTREXATE [Suspect]
     Active Substance: METHOTREXATE
     Route: 048
  882. METHOTREXATE [Suspect]
     Active Substance: METHOTREXATE
  883. METHOTREXATE [Suspect]
     Active Substance: METHOTREXATE
  884. METHOTREXATE [Suspect]
     Active Substance: METHOTREXATE
     Route: 048
  885. METHOTREXATE [Suspect]
     Active Substance: METHOTREXATE
     Route: 048
  886. METHOTREXATE [Suspect]
     Active Substance: METHOTREXATE
  887. METHOTREXATE [Suspect]
     Active Substance: METHOTREXATE
  888. METHOTREXATE [Suspect]
     Active Substance: METHOTREXATE
     Route: 048
  889. METHOTREXATE [Suspect]
     Active Substance: METHOTREXATE
  890. METHOTREXATE [Suspect]
     Active Substance: METHOTREXATE
  891. METHOTREXATE [Suspect]
     Active Substance: METHOTREXATE
     Route: 065
  892. METHOTREXATE [Suspect]
     Active Substance: METHOTREXATE
     Route: 065
  893. METHOTREXATE [Suspect]
     Active Substance: METHOTREXATE
  894. METHOTREXATE [Suspect]
     Active Substance: METHOTREXATE
     Route: 048
  895. METHOTREXATE [Suspect]
     Active Substance: METHOTREXATE
  896. METHOTREXATE [Suspect]
     Active Substance: METHOTREXATE
     Route: 048
  897. METHOTREXATE [Suspect]
     Active Substance: METHOTREXATE
     Dosage: UNK, QD
     Route: 048
  898. METHOTREXATE [Suspect]
     Active Substance: METHOTREXATE
     Dosage: UNK, QD
  899. METHOTREXATE [Suspect]
     Active Substance: METHOTREXATE
     Dosage: UNK, QD
  900. METHOTREXATE [Suspect]
     Active Substance: METHOTREXATE
     Dosage: UNK, QD
     Route: 048
  901. METHOTREXATE [Suspect]
     Active Substance: METHOTREXATE
     Dosage: 500 MILLIGRAM, BID ( 2 EVERY 1 DAYS)
     Route: 065
  902. METHOTREXATE [Suspect]
     Active Substance: METHOTREXATE
     Dosage: 500 MILLIGRAM, BID ( 2 EVERY 1 DAYS)
  903. METHOTREXATE [Suspect]
     Active Substance: METHOTREXATE
     Dosage: 500 MILLIGRAM, BID ( 2 EVERY 1 DAYS)
  904. METHOTREXATE [Suspect]
     Active Substance: METHOTREXATE
     Dosage: 500 MILLIGRAM, BID ( 2 EVERY 1 DAYS)
     Route: 065
  905. METHOTREXATE [Suspect]
     Active Substance: METHOTREXATE
     Dosage: 20 MILLIGRAM, QW (1 EVERY 1 WEEKS)
     Route: 048
  906. METHOTREXATE [Suspect]
     Active Substance: METHOTREXATE
     Dosage: 20 MILLIGRAM, QW (1 EVERY 1 WEEKS)
  907. METHOTREXATE [Suspect]
     Active Substance: METHOTREXATE
     Dosage: 20 MILLIGRAM, QW (1 EVERY 1 WEEKS)
  908. METHOTREXATE [Suspect]
     Active Substance: METHOTREXATE
     Dosage: 20 MILLIGRAM, QW (1 EVERY 1 WEEKS)
     Route: 048
  909. METHOTREXATE [Suspect]
     Active Substance: METHOTREXATE
  910. METHOTREXATE [Suspect]
     Active Substance: METHOTREXATE
  911. METHOTREXATE [Suspect]
     Active Substance: METHOTREXATE
     Route: 048
  912. METHOTREXATE [Suspect]
     Active Substance: METHOTREXATE
     Route: 048
  913. METHOTREXATE [Suspect]
     Active Substance: METHOTREXATE
     Dosage: 2 GRAM, QW (1 EVERY 1 WEEKS)
  914. METHOTREXATE [Suspect]
     Active Substance: METHOTREXATE
     Dosage: 2 GRAM, QW (1 EVERY 1 WEEKS)
  915. METHOTREXATE [Suspect]
     Active Substance: METHOTREXATE
     Dosage: 2 GRAM, QW (1 EVERY 1 WEEKS)
     Route: 048
  916. METHOTREXATE [Suspect]
     Active Substance: METHOTREXATE
     Dosage: 2 GRAM, QW (1 EVERY 1 WEEKS)
     Route: 048
  917. METHOTREXATE [Suspect]
     Active Substance: METHOTREXATE
     Indication: Rheumatoid arthritis
  918. METHOTREXATE [Suspect]
     Active Substance: METHOTREXATE
     Route: 058
  919. METHOTREXATE [Suspect]
     Active Substance: METHOTREXATE
     Route: 058
  920. METHOTREXATE [Suspect]
     Active Substance: METHOTREXATE
  921. MESALAMINE [Suspect]
     Active Substance: MESALAMINE
     Indication: Product used for unknown indication
  922. MESALAMINE [Suspect]
     Active Substance: MESALAMINE
     Route: 065
  923. MESALAMINE [Suspect]
     Active Substance: MESALAMINE
     Route: 065
  924. MESALAMINE [Suspect]
     Active Substance: MESALAMINE
  925. NAPROXEN [Suspect]
     Active Substance: NAPROXEN
     Indication: Product used for unknown indication
  926. NAPROXEN [Suspect]
     Active Substance: NAPROXEN
     Route: 065
  927. NAPROXEN [Suspect]
     Active Substance: NAPROXEN
     Route: 065
  928. NAPROXEN [Suspect]
     Active Substance: NAPROXEN
  929. ORENCIA [Suspect]
     Active Substance: ABATACEPT
     Indication: Rheumatoid arthritis
     Route: 042
  930. ORENCIA [Suspect]
     Active Substance: ABATACEPT
     Route: 042
  931. ORENCIA [Suspect]
     Active Substance: ABATACEPT
  932. ORENCIA [Suspect]
     Active Substance: ABATACEPT
  933. ORENCIA [Suspect]
     Active Substance: ABATACEPT
     Dosage: 125 MILLIGRAM, QW (1 EVERY 1 WEEKS)
  934. ORENCIA [Suspect]
     Active Substance: ABATACEPT
     Dosage: 125 MILLIGRAM, QW (1 EVERY 1 WEEKS)
  935. ORENCIA [Suspect]
     Active Substance: ABATACEPT
     Dosage: 125 MILLIGRAM, QW (1 EVERY 1 WEEKS)
     Route: 042
  936. ORENCIA [Suspect]
     Active Substance: ABATACEPT
     Dosage: 125 MILLIGRAM, QW (1 EVERY 1 WEEKS)
     Route: 042
  937. ORENCIA [Suspect]
     Active Substance: ABATACEPT
  938. ORENCIA [Suspect]
     Active Substance: ABATACEPT
  939. ORENCIA [Suspect]
     Active Substance: ABATACEPT
     Route: 042
  940. ORENCIA [Suspect]
     Active Substance: ABATACEPT
     Route: 042
  941. ORENCIA [Suspect]
     Active Substance: ABATACEPT
     Dosage: 120 MILLIGRAM, QW (1 EVERY 1 WEEKS)
     Route: 042
  942. ORENCIA [Suspect]
     Active Substance: ABATACEPT
     Dosage: 120 MILLIGRAM, QW (1 EVERY 1 WEEKS)
  943. ORENCIA [Suspect]
     Active Substance: ABATACEPT
     Dosage: 120 MILLIGRAM, QW (1 EVERY 1 WEEKS)
  944. ORENCIA [Suspect]
     Active Substance: ABATACEPT
     Dosage: 120 MILLIGRAM, QW (1 EVERY 1 WEEKS)
     Route: 042
  945. ORENCIA [Suspect]
     Active Substance: ABATACEPT
     Dosage: UNK, QW (1 EVERY 1 WEEKS)
     Route: 042
  946. ORENCIA [Suspect]
     Active Substance: ABATACEPT
     Dosage: UNK, QW (1 EVERY 1 WEEKS)
  947. ORENCIA [Suspect]
     Active Substance: ABATACEPT
     Dosage: UNK, QW (1 EVERY 1 WEEKS)
  948. ORENCIA [Suspect]
     Active Substance: ABATACEPT
     Dosage: UNK, QW (1 EVERY 1 WEEKS)
     Route: 042
  949. ORENCIA [Suspect]
     Active Substance: ABATACEPT
     Route: 058
  950. ORENCIA [Suspect]
     Active Substance: ABATACEPT
     Route: 058
  951. ORENCIA [Suspect]
     Active Substance: ABATACEPT
  952. ORENCIA [Suspect]
     Active Substance: ABATACEPT
  953. ORENCIA [Suspect]
     Active Substance: ABATACEPT
  954. ORENCIA [Suspect]
     Active Substance: ABATACEPT
  955. ORENCIA [Suspect]
     Active Substance: ABATACEPT
     Route: 065
  956. ORENCIA [Suspect]
     Active Substance: ABATACEPT
     Route: 065
  957. ORENCIA [Suspect]
     Active Substance: ABATACEPT
     Route: 058
  958. ORENCIA [Suspect]
     Active Substance: ABATACEPT
  959. ORENCIA [Suspect]
     Active Substance: ABATACEPT
  960. ORENCIA [Suspect]
     Active Substance: ABATACEPT
     Route: 058
  961. ORENCIA [Suspect]
     Active Substance: ABATACEPT
     Dosage: 17.88 MILLIGRAM, QD (1 EVERY ONE DAY)
  962. ORENCIA [Suspect]
     Active Substance: ABATACEPT
     Dosage: 17.88 MILLIGRAM, QD (1 EVERY ONE DAY)
  963. ORENCIA [Suspect]
     Active Substance: ABATACEPT
     Dosage: 17.88 MILLIGRAM, QD (1 EVERY ONE DAY)
     Route: 065
  964. ORENCIA [Suspect]
     Active Substance: ABATACEPT
     Dosage: 17.88 MILLIGRAM, QD (1 EVERY ONE DAY)
     Route: 065
  965. ORENCIA [Suspect]
     Active Substance: ABATACEPT
  966. ORENCIA [Suspect]
     Active Substance: ABATACEPT
  967. ORENCIA [Suspect]
     Active Substance: ABATACEPT
     Route: 042
  968. ORENCIA [Suspect]
     Active Substance: ABATACEPT
     Route: 042
  969. ORENCIA [Suspect]
     Active Substance: ABATACEPT
     Dosage: 18 MILLIGRAM, QD (1 EVERY 1 DAY)
  970. ORENCIA [Suspect]
     Active Substance: ABATACEPT
     Dosage: 18 MILLIGRAM, QD (1 EVERY 1 DAY)
     Route: 065
  971. ORENCIA [Suspect]
     Active Substance: ABATACEPT
     Dosage: 18 MILLIGRAM, QD (1 EVERY 1 DAY)
     Route: 065
  972. ORENCIA [Suspect]
     Active Substance: ABATACEPT
     Dosage: 18 MILLIGRAM, QD (1 EVERY 1 DAY)
  973. ORENCIA [Suspect]
     Active Substance: ABATACEPT
  974. ORENCIA [Suspect]
     Active Substance: ABATACEPT
  975. ORENCIA [Suspect]
     Active Substance: ABATACEPT
     Route: 058
  976. ORENCIA [Suspect]
     Active Substance: ABATACEPT
     Route: 058
  977. ORENCIA [Suspect]
     Active Substance: ABATACEPT
     Dosage: 125 MILLIGRAM, QW (1 EVERY 1 WEEKS)
     Route: 058
  978. ORENCIA [Suspect]
     Active Substance: ABATACEPT
     Dosage: 125 MILLIGRAM, QW (1 EVERY 1 WEEKS)
  979. ORENCIA [Suspect]
     Active Substance: ABATACEPT
     Dosage: 125 MILLIGRAM, QW (1 EVERY 1 WEEKS)
  980. ORENCIA [Suspect]
     Active Substance: ABATACEPT
     Dosage: 125 MILLIGRAM, QW (1 EVERY 1 WEEKS)
     Route: 058
  981. ORENCIA [Suspect]
     Active Substance: ABATACEPT
     Route: 053
  982. ORENCIA [Suspect]
     Active Substance: ABATACEPT
  983. ORENCIA [Suspect]
     Active Substance: ABATACEPT
  984. ORENCIA [Suspect]
     Active Substance: ABATACEPT
     Route: 053
  985. ORENCIA [Suspect]
     Active Substance: ABATACEPT
     Dosage: 17.86 MILLIGRAM, QD (1 EVERY ONE DAY)
  986. ORENCIA [Suspect]
     Active Substance: ABATACEPT
     Dosage: 17.86 MILLIGRAM, QD (1 EVERY ONE DAY)
  987. ORENCIA [Suspect]
     Active Substance: ABATACEPT
     Dosage: 17.86 MILLIGRAM, QD (1 EVERY ONE DAY)
     Route: 042
  988. ORENCIA [Suspect]
     Active Substance: ABATACEPT
     Dosage: 17.86 MILLIGRAM, QD (1 EVERY ONE DAY)
     Route: 042
  989. ORENCIA [Suspect]
     Active Substance: ABATACEPT
     Indication: Rheumatoid arthritis
  990. ORENCIA [Suspect]
     Active Substance: ABATACEPT
     Route: 067
  991. ORENCIA [Suspect]
     Active Substance: ABATACEPT
     Route: 067
  992. ORENCIA [Suspect]
     Active Substance: ABATACEPT
  993. ORENCIA [Suspect]
     Active Substance: ABATACEPT
     Indication: Rheumatoid arthritis
  994. ORENCIA [Suspect]
     Active Substance: ABATACEPT
  995. ORENCIA [Suspect]
     Active Substance: ABATACEPT
     Route: 058
  996. ORENCIA [Suspect]
     Active Substance: ABATACEPT
     Route: 058
  997. ORENCIA [Suspect]
     Active Substance: ABATACEPT
     Dosage: 125 MILLIGRAM, QW (1 EVERY 1 WEEKS)
     Route: 058
  998. ORENCIA [Suspect]
     Active Substance: ABATACEPT
     Dosage: 125 MILLIGRAM, QW (1 EVERY 1 WEEKS)
     Route: 058
  999. ORENCIA [Suspect]
     Active Substance: ABATACEPT
     Dosage: 125 MILLIGRAM, QW (1 EVERY 1 WEEKS)
  1000. ORENCIA [Suspect]
     Active Substance: ABATACEPT
     Dosage: 125 MILLIGRAM, QW (1 EVERY 1 WEEKS)
  1001. ORENCIA [Suspect]
     Active Substance: ABATACEPT
  1002. ORENCIA [Suspect]
     Active Substance: ABATACEPT
  1003. ORENCIA [Suspect]
     Active Substance: ABATACEPT
     Route: 058
  1004. ORENCIA [Suspect]
     Active Substance: ABATACEPT
     Route: 058
  1005. ORENCIA [Suspect]
     Active Substance: ABATACEPT
     Route: 058
  1006. ORENCIA [Suspect]
     Active Substance: ABATACEPT
  1007. ORENCIA [Suspect]
     Active Substance: ABATACEPT
  1008. ORENCIA [Suspect]
     Active Substance: ABATACEPT
     Route: 058
  1009. ORENCIA [Suspect]
     Active Substance: ABATACEPT
     Dosage: UNK, QW (1 EVERY 1 WEEKS)
     Route: 065
  1010. ORENCIA [Suspect]
     Active Substance: ABATACEPT
     Dosage: UNK, QW (1 EVERY 1 WEEKS)
     Route: 065
  1011. ORENCIA [Suspect]
     Active Substance: ABATACEPT
     Dosage: UNK, QW (1 EVERY 1 WEEKS)
  1012. ORENCIA [Suspect]
     Active Substance: ABATACEPT
     Dosage: UNK, QW (1 EVERY 1 WEEKS)
  1013. OTEZLA [Suspect]
     Active Substance: APREMILAST
     Indication: Product used for unknown indication
  1014. OTEZLA [Suspect]
     Active Substance: APREMILAST
  1015. OTEZLA [Suspect]
     Active Substance: APREMILAST
     Route: 048
  1016. OTEZLA [Suspect]
     Active Substance: APREMILAST
     Route: 048
  1017. OTEZLA [Suspect]
     Active Substance: APREMILAST
     Route: 065
  1018. OTEZLA [Suspect]
     Active Substance: APREMILAST
     Route: 065
  1019. OTEZLA [Suspect]
     Active Substance: APREMILAST
  1020. OTEZLA [Suspect]
     Active Substance: APREMILAST
  1021. OTEZLA [Suspect]
     Active Substance: APREMILAST
     Dosage: 6 MILLIGRAM, QD (1 EVERY 1 DAY)
  1022. OTEZLA [Suspect]
     Active Substance: APREMILAST
     Dosage: 6 MILLIGRAM, QD (1 EVERY 1 DAY)
  1023. OTEZLA [Suspect]
     Active Substance: APREMILAST
     Dosage: 6 MILLIGRAM, QD (1 EVERY 1 DAY)
     Route: 065
  1024. OTEZLA [Suspect]
     Active Substance: APREMILAST
     Dosage: 6 MILLIGRAM, QD (1 EVERY 1 DAY)
     Route: 065
  1025. OTEZLA [Suspect]
     Active Substance: APREMILAST
     Route: 048
  1026. OTEZLA [Suspect]
     Active Substance: APREMILAST
  1027. OTEZLA [Suspect]
     Active Substance: APREMILAST
  1028. OTEZLA [Suspect]
     Active Substance: APREMILAST
     Route: 048
  1029. OTEZLA [Suspect]
     Active Substance: APREMILAST
     Dosage: 6 MILLIGRAM, QD (1 EVERY 1 DAY)
     Route: 048
  1030. OTEZLA [Suspect]
     Active Substance: APREMILAST
     Dosage: 6 MILLIGRAM, QD (1 EVERY 1 DAY)
     Route: 048
  1031. OTEZLA [Suspect]
     Active Substance: APREMILAST
     Dosage: 6 MILLIGRAM, QD (1 EVERY 1 DAY)
  1032. OTEZLA [Suspect]
     Active Substance: APREMILAST
     Dosage: 6 MILLIGRAM, QD (1 EVERY 1 DAY)
  1033. OXYCODONE [Suspect]
     Active Substance: OXYCODONE
     Indication: Product used for unknown indication
  1034. OXYCODONE [Suspect]
     Active Substance: OXYCODONE
     Route: 065
  1035. OXYCODONE [Suspect]
     Active Substance: OXYCODONE
     Route: 065
  1036. OXYCODONE [Suspect]
     Active Substance: OXYCODONE
  1037. OXYCODONE HYDROCHLORIDE [Suspect]
     Active Substance: OXYCODONE HYDROCHLORIDE
     Indication: Product used for unknown indication
  1038. OXYCODONE HYDROCHLORIDE [Suspect]
     Active Substance: OXYCODONE HYDROCHLORIDE
     Route: 065
  1039. OXYCODONE HYDROCHLORIDE [Suspect]
     Active Substance: OXYCODONE HYDROCHLORIDE
     Route: 065
  1040. OXYCODONE HYDROCHLORIDE [Suspect]
     Active Substance: OXYCODONE HYDROCHLORIDE
  1041. OXYCODONE TEREPHTHALATE [Suspect]
     Active Substance: OXYCODONE TEREPHTHALATE
     Indication: Product used for unknown indication
  1042. OXYCODONE TEREPHTHALATE [Suspect]
     Active Substance: OXYCODONE TEREPHTHALATE
     Route: 065
  1043. OXYCODONE TEREPHTHALATE [Suspect]
     Active Substance: OXYCODONE TEREPHTHALATE
     Route: 065
  1044. OXYCODONE TEREPHTHALATE [Suspect]
     Active Substance: OXYCODONE TEREPHTHALATE
  1045. PANTOPRAZOLE [Suspect]
     Active Substance: PANTOPRAZOLE
     Indication: Product used for unknown indication
  1046. PANTOPRAZOLE [Suspect]
     Active Substance: PANTOPRAZOLE
  1047. PANTOPRAZOLE [Suspect]
     Active Substance: PANTOPRAZOLE
     Route: 065
  1048. PANTOPRAZOLE [Suspect]
     Active Substance: PANTOPRAZOLE
     Route: 065
  1049. PANTOPRAZOLE [Suspect]
     Active Substance: PANTOPRAZOLE
  1050. PANTOPRAZOLE [Suspect]
     Active Substance: PANTOPRAZOLE
  1051. PANTOPRAZOLE [Suspect]
     Active Substance: PANTOPRAZOLE
     Route: 016
  1052. PANTOPRAZOLE [Suspect]
     Active Substance: PANTOPRAZOLE
     Route: 016
  1053. PANTOPRAZOLE [Suspect]
     Active Substance: PANTOPRAZOLE
     Indication: Product used for unknown indication
  1054. PANTOPRAZOLE [Suspect]
     Active Substance: PANTOPRAZOLE
     Route: 048
  1055. PANTOPRAZOLE [Suspect]
     Active Substance: PANTOPRAZOLE
     Route: 048
  1056. PANTOPRAZOLE [Suspect]
     Active Substance: PANTOPRAZOLE
  1057. PERIOGARD [Suspect]
     Active Substance: CHLORHEXIDINE GLUCONATE
     Indication: Product used for unknown indication
     Route: 065
  1058. PERIOGARD [Suspect]
     Active Substance: CHLORHEXIDINE GLUCONATE
  1059. PERIOGARD [Suspect]
     Active Substance: CHLORHEXIDINE GLUCONATE
  1060. PERIOGARD [Suspect]
     Active Substance: CHLORHEXIDINE GLUCONATE
     Route: 065
  1061. PERIOGARD [Suspect]
     Active Substance: CHLORHEXIDINE GLUCONATE
     Route: 002
  1062. PERIOGARD [Suspect]
     Active Substance: CHLORHEXIDINE GLUCONATE
  1063. PERIOGARD [Suspect]
     Active Substance: CHLORHEXIDINE GLUCONATE
  1064. PERIOGARD [Suspect]
     Active Substance: CHLORHEXIDINE GLUCONATE
     Route: 002
  1065. PLAQUENIL [Suspect]
     Active Substance: HYDROXYCHLOROQUINE SULFATE
     Indication: Rheumatoid arthritis
     Dosage: 400 MILLIGRAM, QD ( 1 EVERY 1 DAYS)
  1066. PLAQUENIL [Suspect]
     Active Substance: HYDROXYCHLOROQUINE SULFATE
     Dosage: 400 MILLIGRAM, QD ( 1 EVERY 1 DAYS)
  1067. PLAQUENIL [Suspect]
     Active Substance: HYDROXYCHLOROQUINE SULFATE
     Dosage: 400 MILLIGRAM, QD ( 1 EVERY 1 DAYS)
     Route: 048
  1068. PLAQUENIL [Suspect]
     Active Substance: HYDROXYCHLOROQUINE SULFATE
     Dosage: 400 MILLIGRAM, QD ( 1 EVERY 1 DAYS)
     Route: 048
  1069. PLAQUENIL [Suspect]
     Active Substance: HYDROXYCHLOROQUINE SULFATE
  1070. PLAQUENIL [Suspect]
     Active Substance: HYDROXYCHLOROQUINE SULFATE
  1071. PLAQUENIL [Suspect]
     Active Substance: HYDROXYCHLOROQUINE SULFATE
     Route: 048
  1072. PLAQUENIL [Suspect]
     Active Substance: HYDROXYCHLOROQUINE SULFATE
     Route: 048
  1073. PLAQUENIL [Suspect]
     Active Substance: HYDROXYCHLOROQUINE SULFATE
     Dosage: 420 MILLIGRAM, QD ( 1 EVERY 1 DAYS)
  1074. PLAQUENIL [Suspect]
     Active Substance: HYDROXYCHLOROQUINE SULFATE
     Dosage: 420 MILLIGRAM, QD ( 1 EVERY 1 DAYS)
     Route: 048
  1075. PLAQUENIL [Suspect]
     Active Substance: HYDROXYCHLOROQUINE SULFATE
     Dosage: 420 MILLIGRAM, QD ( 1 EVERY 1 DAYS)
  1076. PLAQUENIL [Suspect]
     Active Substance: HYDROXYCHLOROQUINE SULFATE
     Dosage: 420 MILLIGRAM, QD ( 1 EVERY 1 DAYS)
     Route: 048
  1077. PREDNISONE [Suspect]
     Active Substance: PREDNISONE
     Indication: Rheumatoid arthritis
  1078. PREDNISONE [Suspect]
     Active Substance: PREDNISONE
  1079. PREDNISONE [Suspect]
     Active Substance: PREDNISONE
     Route: 042
  1080. PREDNISONE [Suspect]
     Active Substance: PREDNISONE
     Route: 042
  1081. PREDNISONE [Suspect]
     Active Substance: PREDNISONE
     Route: 048
  1082. PREDNISONE [Suspect]
     Active Substance: PREDNISONE
     Route: 048
  1083. PREDNISONE [Suspect]
     Active Substance: PREDNISONE
  1084. PREDNISONE [Suspect]
     Active Substance: PREDNISONE
  1085. PREDNISONE [Suspect]
     Active Substance: PREDNISONE
     Route: 048
  1086. PREDNISONE [Suspect]
     Active Substance: PREDNISONE
  1087. PREDNISONE [Suspect]
     Active Substance: PREDNISONE
  1088. PREDNISONE [Suspect]
     Active Substance: PREDNISONE
     Route: 048
  1089. PREDNISONE [Suspect]
     Active Substance: PREDNISONE
     Route: 048
  1090. PREDNISONE [Suspect]
     Active Substance: PREDNISONE
     Route: 048
  1091. PREDNISONE [Suspect]
     Active Substance: PREDNISONE
  1092. PREDNISONE [Suspect]
     Active Substance: PREDNISONE
  1093. PREDNISONE [Suspect]
     Active Substance: PREDNISONE
  1094. PREDNISONE [Suspect]
     Active Substance: PREDNISONE
  1095. PREDNISONE [Suspect]
     Active Substance: PREDNISONE
     Route: 065
  1096. PREDNISONE [Suspect]
     Active Substance: PREDNISONE
     Route: 065
  1097. PREDNISONE [Suspect]
     Active Substance: PREDNISONE
     Route: 048
  1098. PREDNISONE [Suspect]
     Active Substance: PREDNISONE
  1099. PREDNISONE [Suspect]
     Active Substance: PREDNISONE
  1100. PREDNISONE [Suspect]
     Active Substance: PREDNISONE
     Route: 048
  1101. PREDNISONE [Suspect]
     Active Substance: PREDNISONE
     Route: 065
  1102. PREDNISONE [Suspect]
     Active Substance: PREDNISONE
     Route: 065
  1103. PREDNISONE [Suspect]
     Active Substance: PREDNISONE
  1104. PREDNISONE [Suspect]
     Active Substance: PREDNISONE
  1105. PSEUDOEPHEDRINE [Suspect]
     Active Substance: PSEUDOEPHEDRINE
     Indication: Product used for unknown indication
  1106. PSEUDOEPHEDRINE [Suspect]
     Active Substance: PSEUDOEPHEDRINE
     Route: 065
  1107. PSEUDOEPHEDRINE [Suspect]
     Active Substance: PSEUDOEPHEDRINE
     Route: 065
  1108. PSEUDOEPHEDRINE [Suspect]
     Active Substance: PSEUDOEPHEDRINE
  1109. PSEUDOEPHEDRINE HYDROCHLORIDE [Suspect]
     Active Substance: PSEUDOEPHEDRINE HYDROCHLORIDE
     Indication: Rheumatoid arthritis
     Route: 048
  1110. PSEUDOEPHEDRINE HYDROCHLORIDE [Suspect]
     Active Substance: PSEUDOEPHEDRINE HYDROCHLORIDE
  1111. PSEUDOEPHEDRINE HYDROCHLORIDE [Suspect]
     Active Substance: PSEUDOEPHEDRINE HYDROCHLORIDE
  1112. PSEUDOEPHEDRINE HYDROCHLORIDE [Suspect]
     Active Substance: PSEUDOEPHEDRINE HYDROCHLORIDE
     Route: 048
  1113. PSEUDOEPHEDRINE HYDROCHLORIDE [Suspect]
     Active Substance: PSEUDOEPHEDRINE HYDROCHLORIDE
     Route: 065
  1114. PSEUDOEPHEDRINE HYDROCHLORIDE [Suspect]
     Active Substance: PSEUDOEPHEDRINE HYDROCHLORIDE
  1115. PSEUDOEPHEDRINE HYDROCHLORIDE [Suspect]
     Active Substance: PSEUDOEPHEDRINE HYDROCHLORIDE
  1116. PSEUDOEPHEDRINE HYDROCHLORIDE [Suspect]
     Active Substance: PSEUDOEPHEDRINE HYDROCHLORIDE
     Route: 065
  1117. CETIRIZINE HYDROCHLORIDE\PSEUDOEPHEDRINE HYDROCHLORIDE [Suspect]
     Active Substance: CETIRIZINE HYDROCHLORIDE\PSEUDOEPHEDRINE HYDROCHLORIDE
     Indication: Rheumatoid arthritis
  1118. CETIRIZINE HYDROCHLORIDE\PSEUDOEPHEDRINE HYDROCHLORIDE [Suspect]
     Active Substance: CETIRIZINE HYDROCHLORIDE\PSEUDOEPHEDRINE HYDROCHLORIDE
     Route: 048
  1119. CETIRIZINE HYDROCHLORIDE\PSEUDOEPHEDRINE HYDROCHLORIDE [Suspect]
     Active Substance: CETIRIZINE HYDROCHLORIDE\PSEUDOEPHEDRINE HYDROCHLORIDE
     Route: 048
  1120. CETIRIZINE HYDROCHLORIDE\PSEUDOEPHEDRINE HYDROCHLORIDE [Suspect]
     Active Substance: CETIRIZINE HYDROCHLORIDE\PSEUDOEPHEDRINE HYDROCHLORIDE
  1121. CETIRIZINE HYDROCHLORIDE\PSEUDOEPHEDRINE HYDROCHLORIDE [Suspect]
     Active Substance: CETIRIZINE HYDROCHLORIDE\PSEUDOEPHEDRINE HYDROCHLORIDE
     Indication: Rheumatoid arthritis
  1122. CETIRIZINE HYDROCHLORIDE\PSEUDOEPHEDRINE HYDROCHLORIDE [Suspect]
     Active Substance: CETIRIZINE HYDROCHLORIDE\PSEUDOEPHEDRINE HYDROCHLORIDE
  1123. CETIRIZINE HYDROCHLORIDE\PSEUDOEPHEDRINE HYDROCHLORIDE [Suspect]
     Active Substance: CETIRIZINE HYDROCHLORIDE\PSEUDOEPHEDRINE HYDROCHLORIDE
     Route: 065
  1124. CETIRIZINE HYDROCHLORIDE\PSEUDOEPHEDRINE HYDROCHLORIDE [Suspect]
     Active Substance: CETIRIZINE HYDROCHLORIDE\PSEUDOEPHEDRINE HYDROCHLORIDE
     Route: 065
  1125. CETIRIZINE HYDROCHLORIDE\PSEUDOEPHEDRINE HYDROCHLORIDE [Suspect]
     Active Substance: CETIRIZINE HYDROCHLORIDE\PSEUDOEPHEDRINE HYDROCHLORIDE
  1126. CETIRIZINE HYDROCHLORIDE\PSEUDOEPHEDRINE HYDROCHLORIDE [Suspect]
     Active Substance: CETIRIZINE HYDROCHLORIDE\PSEUDOEPHEDRINE HYDROCHLORIDE
  1127. CETIRIZINE HYDROCHLORIDE\PSEUDOEPHEDRINE HYDROCHLORIDE [Suspect]
     Active Substance: CETIRIZINE HYDROCHLORIDE\PSEUDOEPHEDRINE HYDROCHLORIDE
     Route: 065
  1128. CETIRIZINE HYDROCHLORIDE\PSEUDOEPHEDRINE HYDROCHLORIDE [Suspect]
     Active Substance: CETIRIZINE HYDROCHLORIDE\PSEUDOEPHEDRINE HYDROCHLORIDE
     Route: 065
  1129. CETIRIZINE HYDROCHLORIDE\PSEUDOEPHEDRINE HYDROCHLORIDE [Suspect]
     Active Substance: CETIRIZINE HYDROCHLORIDE\PSEUDOEPHEDRINE HYDROCHLORIDE
  1130. CETIRIZINE HYDROCHLORIDE\PSEUDOEPHEDRINE HYDROCHLORIDE [Suspect]
     Active Substance: CETIRIZINE HYDROCHLORIDE\PSEUDOEPHEDRINE HYDROCHLORIDE
     Route: 048
  1131. CETIRIZINE HYDROCHLORIDE\PSEUDOEPHEDRINE HYDROCHLORIDE [Suspect]
     Active Substance: CETIRIZINE HYDROCHLORIDE\PSEUDOEPHEDRINE HYDROCHLORIDE
  1132. CETIRIZINE HYDROCHLORIDE\PSEUDOEPHEDRINE HYDROCHLORIDE [Suspect]
     Active Substance: CETIRIZINE HYDROCHLORIDE\PSEUDOEPHEDRINE HYDROCHLORIDE
     Route: 048
  1133. REMICADE [Suspect]
     Active Substance: INFLIXIMAB
     Indication: Rheumatoid arthritis
     Route: 065
  1134. REMICADE [Suspect]
     Active Substance: INFLIXIMAB
     Indication: Psoriasis
  1135. REMICADE [Suspect]
     Active Substance: INFLIXIMAB
     Indication: Crohn^s disease
  1136. REMICADE [Suspect]
     Active Substance: INFLIXIMAB
     Indication: Colitis ulcerative
     Route: 065
  1137. REMICADE [Suspect]
     Active Substance: INFLIXIMAB
     Indication: Arthropathy
     Route: 065
  1138. REMICADE [Suspect]
     Active Substance: INFLIXIMAB
     Indication: Ankylosing spondylitis
  1139. REMICADE [Suspect]
     Active Substance: INFLIXIMAB
  1140. REMICADE [Suspect]
     Active Substance: INFLIXIMAB
     Route: 065
  1141. REMICADE [Suspect]
     Active Substance: INFLIXIMAB
  1142. REMICADE [Suspect]
     Active Substance: INFLIXIMAB
  1143. REMICADE [Suspect]
     Active Substance: INFLIXIMAB
     Route: 042
  1144. REMICADE [Suspect]
     Active Substance: INFLIXIMAB
     Route: 042
  1145. REMICADE [Suspect]
     Active Substance: INFLIXIMAB
  1146. REMICADE [Suspect]
     Active Substance: INFLIXIMAB
  1147. REMICADE [Suspect]
     Active Substance: INFLIXIMAB
     Route: 042
  1148. REMICADE [Suspect]
     Active Substance: INFLIXIMAB
     Route: 042
  1149. RINVOQ [Suspect]
     Active Substance: UPADACITINIB
     Indication: Product used for unknown indication
     Dosage: 15 MILLIGRAM, QD ( 1 EVERY 1 DAYS)
  1150. RINVOQ [Suspect]
     Active Substance: UPADACITINIB
     Dosage: 15 MILLIGRAM, QD ( 1 EVERY 1 DAYS)
     Route: 065
  1151. RINVOQ [Suspect]
     Active Substance: UPADACITINIB
     Dosage: 15 MILLIGRAM, QD ( 1 EVERY 1 DAYS)
     Route: 065
  1152. RINVOQ [Suspect]
     Active Substance: UPADACITINIB
     Dosage: 15 MILLIGRAM, QD ( 1 EVERY 1 DAYS)
  1153. RITUXIMAB [Suspect]
     Active Substance: RITUXIMAB
     Indication: Rheumatoid arthritis
  1154. RITUXIMAB [Suspect]
     Active Substance: RITUXIMAB
  1155. RITUXIMAB [Suspect]
     Active Substance: RITUXIMAB
     Route: 065
  1156. RITUXIMAB [Suspect]
     Active Substance: RITUXIMAB
     Route: 065
  1157. RITUXIMAB [Suspect]
     Active Substance: RITUXIMAB
  1158. RITUXIMAB [Suspect]
     Active Substance: RITUXIMAB
  1159. RITUXIMAB [Suspect]
     Active Substance: RITUXIMAB
     Route: 058
  1160. RITUXIMAB [Suspect]
     Active Substance: RITUXIMAB
     Route: 058
  1161. RITUXIMAB [Suspect]
     Active Substance: RITUXIMAB
     Indication: Rheumatoid arthritis
  1162. RITUXIMAB [Suspect]
     Active Substance: RITUXIMAB
     Route: 048
  1163. RITUXIMAB [Suspect]
     Active Substance: RITUXIMAB
     Route: 048
  1164. RITUXIMAB [Suspect]
     Active Substance: RITUXIMAB
  1165. RITUXIMAB [Suspect]
     Active Substance: RITUXIMAB
     Indication: Rheumatoid arthritis
  1166. RITUXIMAB [Suspect]
     Active Substance: RITUXIMAB
     Route: 042
  1167. RITUXIMAB [Suspect]
     Active Substance: RITUXIMAB
     Route: 042
  1168. RITUXIMAB [Suspect]
     Active Substance: RITUXIMAB
  1169. DIETARY SUPPLEMENT\HERBALS [Suspect]
     Active Substance: DIETARY SUPPLEMENT\HERBALS
     Indication: Product used for unknown indication
  1170. DIETARY SUPPLEMENT\HERBALS [Suspect]
     Active Substance: DIETARY SUPPLEMENT\HERBALS
     Route: 065
  1171. DIETARY SUPPLEMENT\HERBALS [Suspect]
     Active Substance: DIETARY SUPPLEMENT\HERBALS
     Route: 065
  1172. DIETARY SUPPLEMENT\HERBALS [Suspect]
     Active Substance: DIETARY SUPPLEMENT\HERBALS
  1173. SIMPONI [Suspect]
     Active Substance: GOLIMUMAB
     Indication: Rheumatoid arthritis
  1174. SIMPONI [Suspect]
     Active Substance: GOLIMUMAB
     Route: 042
  1175. SIMPONI [Suspect]
     Active Substance: GOLIMUMAB
     Route: 042
  1176. SIMPONI [Suspect]
     Active Substance: GOLIMUMAB
  1177. SIMPONI [Suspect]
     Active Substance: GOLIMUMAB
     Indication: Rheumatoid arthritis
  1178. SIMPONI [Suspect]
     Active Substance: GOLIMUMAB
     Route: 058
  1179. SIMPONI [Suspect]
     Active Substance: GOLIMUMAB
     Route: 058
  1180. SIMPONI [Suspect]
     Active Substance: GOLIMUMAB
  1181. SOLU-MEDROL [Suspect]
     Active Substance: METHYLPREDNISOLONE SODIUM SUCCINATE
     Indication: Product used for unknown indication
  1182. SOLU-MEDROL [Suspect]
     Active Substance: METHYLPREDNISOLONE SODIUM SUCCINATE
     Route: 065
  1183. SOLU-MEDROL [Suspect]
     Active Substance: METHYLPREDNISOLONE SODIUM SUCCINATE
     Route: 065
  1184. SOLU-MEDROL [Suspect]
     Active Substance: METHYLPREDNISOLONE SODIUM SUCCINATE
  1185. STELARA [Suspect]
     Active Substance: USTEKINUMAB
     Indication: Rheumatoid arthritis
  1186. STELARA [Suspect]
     Active Substance: USTEKINUMAB
     Route: 058
  1187. STELARA [Suspect]
     Active Substance: USTEKINUMAB
     Route: 058
  1188. STELARA [Suspect]
     Active Substance: USTEKINUMAB
  1189. SULFAMETHOXAZOLE [Suspect]
     Active Substance: SULFAMETHOXAZOLE
     Indication: Product used for unknown indication
  1190. SULFAMETHOXAZOLE [Suspect]
     Active Substance: SULFAMETHOXAZOLE
     Route: 065
  1191. SULFAMETHOXAZOLE [Suspect]
     Active Substance: SULFAMETHOXAZOLE
     Route: 065
  1192. SULFAMETHOXAZOLE [Suspect]
     Active Substance: SULFAMETHOXAZOLE
  1193. SULFAMETHOXAZOLE\TRIMETHOPRIM [Suspect]
     Active Substance: SULFAMETHOXAZOLE\TRIMETHOPRIM
     Indication: Product used for unknown indication
     Route: 065
  1194. SULFAMETHOXAZOLE\TRIMETHOPRIM [Suspect]
     Active Substance: SULFAMETHOXAZOLE\TRIMETHOPRIM
  1195. SULFAMETHOXAZOLE\TRIMETHOPRIM [Suspect]
     Active Substance: SULFAMETHOXAZOLE\TRIMETHOPRIM
  1196. SULFAMETHOXAZOLE\TRIMETHOPRIM [Suspect]
     Active Substance: SULFAMETHOXAZOLE\TRIMETHOPRIM
     Route: 065
  1197. SULFAMETHOXAZOLE\TRIMETHOPRIM [Suspect]
     Active Substance: SULFAMETHOXAZOLE\TRIMETHOPRIM
     Route: 067
  1198. SULFAMETHOXAZOLE\TRIMETHOPRIM [Suspect]
     Active Substance: SULFAMETHOXAZOLE\TRIMETHOPRIM
  1199. SULFAMETHOXAZOLE\TRIMETHOPRIM [Suspect]
     Active Substance: SULFAMETHOXAZOLE\TRIMETHOPRIM
  1200. SULFAMETHOXAZOLE\TRIMETHOPRIM [Suspect]
     Active Substance: SULFAMETHOXAZOLE\TRIMETHOPRIM
     Route: 067
  1201. SULFASALAZINE [Suspect]
     Active Substance: SULFASALAZINE
     Indication: Rheumatoid arthritis
     Dosage: 1 GRAM, QD
     Route: 065
  1202. SULFASALAZINE [Suspect]
     Active Substance: SULFASALAZINE
     Dosage: 1 GRAM, QD
  1203. SULFASALAZINE [Suspect]
     Active Substance: SULFASALAZINE
     Dosage: 1 GRAM, QD
  1204. SULFASALAZINE [Suspect]
     Active Substance: SULFASALAZINE
     Dosage: 1 GRAM, QD
     Route: 065
  1205. SULFASALAZINE [Suspect]
     Active Substance: SULFASALAZINE
     Route: 065
  1206. SULFASALAZINE [Suspect]
     Active Substance: SULFASALAZINE
  1207. SULFASALAZINE [Suspect]
     Active Substance: SULFASALAZINE
  1208. SULFASALAZINE [Suspect]
     Active Substance: SULFASALAZINE
     Route: 065
  1209. SULFASALAZINE [Suspect]
     Active Substance: SULFASALAZINE
  1210. SULFASALAZINE [Suspect]
     Active Substance: SULFASALAZINE
  1211. SULFASALAZINE [Suspect]
     Active Substance: SULFASALAZINE
     Route: 065
  1212. SULFASALAZINE [Suspect]
     Active Substance: SULFASALAZINE
     Route: 065
  1213. SULFASALAZINE [Suspect]
     Active Substance: SULFASALAZINE
     Dosage: 500 MILLIGRAM, QD (1 EVERY 1 DAYS)
  1214. SULFASALAZINE [Suspect]
     Active Substance: SULFASALAZINE
     Dosage: 500 MILLIGRAM, QD (1 EVERY 1 DAYS)
  1215. SULFASALAZINE [Suspect]
     Active Substance: SULFASALAZINE
     Dosage: 500 MILLIGRAM, QD (1 EVERY 1 DAYS)
     Route: 065
  1216. SULFASALAZINE [Suspect]
     Active Substance: SULFASALAZINE
     Dosage: 500 MILLIGRAM, QD (1 EVERY 1 DAYS)
     Route: 065
  1217. SULFASALAZINE [Suspect]
     Active Substance: SULFASALAZINE
  1218. SULFASALAZINE [Suspect]
     Active Substance: SULFASALAZINE
  1219. SULFASALAZINE [Suspect]
     Active Substance: SULFASALAZINE
     Route: 065
  1220. SULFASALAZINE [Suspect]
     Active Substance: SULFASALAZINE
     Route: 065
  1221. SULFASALAZINE [Suspect]
     Active Substance: SULFASALAZINE
     Dosage: 1000 MILLIGRAM, QD (1 EVERY 1 DAYS)
     Route: 048
  1222. SULFASALAZINE [Suspect]
     Active Substance: SULFASALAZINE
     Dosage: 1000 MILLIGRAM, QD (1 EVERY 1 DAYS)
  1223. SULFASALAZINE [Suspect]
     Active Substance: SULFASALAZINE
     Dosage: 1000 MILLIGRAM, QD (1 EVERY 1 DAYS)
  1224. SULFASALAZINE [Suspect]
     Active Substance: SULFASALAZINE
     Dosage: 1000 MILLIGRAM, QD (1 EVERY 1 DAYS)
     Route: 048
  1225. SULFASALAZINE [Suspect]
     Active Substance: SULFASALAZINE
     Route: 048
  1226. SULFASALAZINE [Suspect]
     Active Substance: SULFASALAZINE
  1227. SULFASALAZINE [Suspect]
     Active Substance: SULFASALAZINE
  1228. SULFASALAZINE [Suspect]
     Active Substance: SULFASALAZINE
     Route: 048
  1229. SULFASALAZINE [Suspect]
     Active Substance: SULFASALAZINE
     Dosage: 2000 MILLIGRAM, QD (1 EVERY 1 DAYS)
  1230. SULFASALAZINE [Suspect]
     Active Substance: SULFASALAZINE
     Dosage: 2000 MILLIGRAM, QD (1 EVERY 1 DAYS)
  1231. SULFASALAZINE [Suspect]
     Active Substance: SULFASALAZINE
     Dosage: 2000 MILLIGRAM, QD (1 EVERY 1 DAYS)
     Route: 048
  1232. SULFASALAZINE [Suspect]
     Active Substance: SULFASALAZINE
     Dosage: 2000 MILLIGRAM, QD (1 EVERY 1 DAYS)
     Route: 048
  1233. SULFASALAZINE [Suspect]
     Active Substance: SULFASALAZINE
     Dosage: UNK, QD (1 EVERY 1 DAYS)
  1234. SULFASALAZINE [Suspect]
     Active Substance: SULFASALAZINE
     Dosage: UNK, QD (1 EVERY 1 DAYS)
     Route: 048
  1235. SULFASALAZINE [Suspect]
     Active Substance: SULFASALAZINE
     Dosage: UNK, QD (1 EVERY 1 DAYS)
  1236. SULFASALAZINE [Suspect]
     Active Substance: SULFASALAZINE
     Dosage: UNK, QD (1 EVERY 1 DAYS)
     Route: 048
  1237. SULFATHIAZOLE [Suspect]
     Active Substance: SULFATHIAZOLE
     Indication: Rheumatoid arthritis
  1238. SULFATHIAZOLE [Suspect]
     Active Substance: SULFATHIAZOLE
     Route: 065
  1239. SULFATHIAZOLE [Suspect]
     Active Substance: SULFATHIAZOLE
     Route: 065
  1240. SULFATHIAZOLE [Suspect]
     Active Substance: SULFATHIAZOLE
  1241. TOPICORT [Suspect]
     Active Substance: DESOXIMETASONE
     Indication: Rheumatoid arthritis
  1242. TOPICORT [Suspect]
     Active Substance: DESOXIMETASONE
     Route: 003
  1243. TOPICORT [Suspect]
     Active Substance: DESOXIMETASONE
     Route: 003
  1244. TOPICORT [Suspect]
     Active Substance: DESOXIMETASONE
  1245. TOPICORT [Suspect]
     Active Substance: DESOXIMETASONE
     Indication: Rheumatoid arthritis
  1246. TOPICORT [Suspect]
     Active Substance: DESOXIMETASONE
     Route: 048
  1247. TOPICORT [Suspect]
     Active Substance: DESOXIMETASONE
     Route: 048
  1248. TOPICORT [Suspect]
     Active Substance: DESOXIMETASONE
  1249. TOPICORT [Suspect]
     Active Substance: DESOXIMETASONE
     Indication: Rheumatoid arthritis
  1250. TOPICORT [Suspect]
     Active Substance: DESOXIMETASONE
     Route: 061
  1251. TOPICORT [Suspect]
     Active Substance: DESOXIMETASONE
     Route: 061
  1252. TOPICORT [Suspect]
     Active Substance: DESOXIMETASONE
  1253. TOPICORT [Suspect]
     Active Substance: DESOXIMETASONE
     Indication: Rheumatoid arthritis
  1254. TOPICORT [Suspect]
     Active Substance: DESOXIMETASONE
     Route: 058
  1255. TOPICORT [Suspect]
     Active Substance: DESOXIMETASONE
     Route: 058
  1256. TOPICORT [Suspect]
     Active Substance: DESOXIMETASONE
  1257. TRIAMCINOLONE [Suspect]
     Active Substance: TRIAMCINOLONE
     Indication: Rheumatoid arthritis
  1258. TRIAMCINOLONE [Suspect]
     Active Substance: TRIAMCINOLONE
     Route: 014
  1259. TRIAMCINOLONE [Suspect]
     Active Substance: TRIAMCINOLONE
     Route: 014
  1260. TRIAMCINOLONE [Suspect]
     Active Substance: TRIAMCINOLONE
  1261. VITAMIN C [Suspect]
     Active Substance: ASCORBIC ACID
     Indication: Product used for unknown indication
  1262. VITAMIN C [Suspect]
     Active Substance: ASCORBIC ACID
     Route: 065
  1263. VITAMIN C [Suspect]
     Active Substance: ASCORBIC ACID
     Route: 065
  1264. VITAMIN C [Suspect]
     Active Substance: ASCORBIC ACID
  1265. VOLTAREN [Suspect]
     Active Substance: DICLOFENAC SODIUM
     Indication: Product used for unknown indication
  1266. VOLTAREN [Suspect]
     Active Substance: DICLOFENAC SODIUM
     Route: 065
  1267. VOLTAREN [Suspect]
     Active Substance: DICLOFENAC SODIUM
     Route: 065
  1268. VOLTAREN [Suspect]
     Active Substance: DICLOFENAC SODIUM
  1269. PREDNISONE [Suspect]
     Active Substance: PREDNISONE
     Indication: Rheumatoid arthritis
  1270. PREDNISONE [Suspect]
     Active Substance: PREDNISONE
     Route: 065
  1271. PREDNISONE [Suspect]
     Active Substance: PREDNISONE
     Route: 065
  1272. PREDNISONE [Suspect]
     Active Substance: PREDNISONE
  1273. TOFACITINIB [Suspect]
     Active Substance: TOFACITINIB
     Indication: Rheumatoid arthritis
  1274. TOFACITINIB [Suspect]
     Active Substance: TOFACITINIB
  1275. TOFACITINIB [Suspect]
     Active Substance: TOFACITINIB
     Route: 065
  1276. TOFACITINIB [Suspect]
     Active Substance: TOFACITINIB
     Route: 065
  1277. TOFACITINIB [Suspect]
     Active Substance: TOFACITINIB
     Dosage: 5 MILLIGRAM, QD (1 EVERY 1 DAYS)
     Route: 065
  1278. TOFACITINIB [Suspect]
     Active Substance: TOFACITINIB
     Dosage: 5 MILLIGRAM, QD (1 EVERY 1 DAYS)
     Route: 065
  1279. TOFACITINIB [Suspect]
     Active Substance: TOFACITINIB
     Dosage: 5 MILLIGRAM, QD (1 EVERY 1 DAYS)
  1280. TOFACITINIB [Suspect]
     Active Substance: TOFACITINIB
     Dosage: 5 MILLIGRAM, QD (1 EVERY 1 DAYS)
  1281. TOFACITINIB [Suspect]
     Active Substance: TOFACITINIB
     Dosage: 10 MILLIGRAM, QD (1 EVERY 1 DAYS)
     Route: 065
  1282. TOFACITINIB [Suspect]
     Active Substance: TOFACITINIB
     Dosage: 10 MILLIGRAM, QD (1 EVERY 1 DAYS)
     Route: 065
  1283. TOFACITINIB [Suspect]
     Active Substance: TOFACITINIB
     Dosage: 10 MILLIGRAM, QD (1 EVERY 1 DAYS)
  1284. TOFACITINIB [Suspect]
     Active Substance: TOFACITINIB
     Dosage: 10 MILLIGRAM, QD (1 EVERY 1 DAYS)
  1285. TOFACITINIB [Suspect]
     Active Substance: TOFACITINIB
     Dosage: 10 MILLIGRAM, QD (1 EVERY 1 DAYS)
  1286. TOFACITINIB [Suspect]
     Active Substance: TOFACITINIB
     Dosage: 10 MILLIGRAM, QD (1 EVERY 1 DAYS)
  1287. TOFACITINIB [Suspect]
     Active Substance: TOFACITINIB
     Dosage: 10 MILLIGRAM, QD (1 EVERY 1 DAYS)
     Route: 048
  1288. TOFACITINIB [Suspect]
     Active Substance: TOFACITINIB
     Dosage: 10 MILLIGRAM, QD (1 EVERY 1 DAYS)
     Route: 048
  1289. ACETAMINOPHEN [Suspect]
     Active Substance: ACETAMINOPHEN
     Indication: Rheumatoid arthritis
  1290. ACETAMINOPHEN [Suspect]
     Active Substance: ACETAMINOPHEN
  1291. ACETAMINOPHEN [Suspect]
     Active Substance: ACETAMINOPHEN
     Route: 048
  1292. ACETAMINOPHEN [Suspect]
     Active Substance: ACETAMINOPHEN
     Route: 048
  1293. ACETAMINOPHEN [Suspect]
     Active Substance: ACETAMINOPHEN
  1294. ACETAMINOPHEN [Suspect]
     Active Substance: ACETAMINOPHEN
  1295. ACETAMINOPHEN [Suspect]
     Active Substance: ACETAMINOPHEN
     Route: 065
  1296. ACETAMINOPHEN [Suspect]
     Active Substance: ACETAMINOPHEN
     Route: 065
  1297. ACETAMINOPHEN\OXYCODONE HYDROCHLORIDE [Suspect]
     Active Substance: ACETAMINOPHEN\OXYCODONE HYDROCHLORIDE
     Indication: Rheumatoid arthritis
  1298. ACETAMINOPHEN\OXYCODONE HYDROCHLORIDE [Suspect]
     Active Substance: ACETAMINOPHEN\OXYCODONE HYDROCHLORIDE
     Route: 065
  1299. ACETAMINOPHEN\OXYCODONE HYDROCHLORIDE [Suspect]
     Active Substance: ACETAMINOPHEN\OXYCODONE HYDROCHLORIDE
     Route: 065
  1300. ACETAMINOPHEN\OXYCODONE HYDROCHLORIDE [Suspect]
     Active Substance: ACETAMINOPHEN\OXYCODONE HYDROCHLORIDE
  1301. ACTEMRA [Suspect]
     Active Substance: TOCILIZUMAB
     Indication: Rheumatoid arthritis
     Dosage: 728.8 MILLIGRAM, MONTHLY (1 EVERY 1 MONTHS)
     Route: 042
  1302. ACTEMRA [Suspect]
     Active Substance: TOCILIZUMAB
     Dosage: 728.8 MILLIGRAM, MONTHLY (1 EVERY 1 MONTHS)
  1303. ACTEMRA [Suspect]
     Active Substance: TOCILIZUMAB
     Dosage: 728.8 MILLIGRAM, MONTHLY (1 EVERY 1 MONTHS)
  1304. ACTEMRA [Suspect]
     Active Substance: TOCILIZUMAB
     Dosage: 728.8 MILLIGRAM, MONTHLY (1 EVERY 1 MONTHS)
     Route: 042
  1305. ACTEMRA [Suspect]
     Active Substance: TOCILIZUMAB
  1306. ACTEMRA [Suspect]
     Active Substance: TOCILIZUMAB
  1307. ACTEMRA [Suspect]
     Active Substance: TOCILIZUMAB
     Route: 042
  1308. ACTEMRA [Suspect]
     Active Substance: TOCILIZUMAB
     Route: 042
  1309. ACTEMRA [Suspect]
     Active Substance: TOCILIZUMAB
     Dosage: 752.8 MILLIGRAM, QW (1 EVERY 1 WEEKS)
     Route: 042
  1310. ACTEMRA [Suspect]
     Active Substance: TOCILIZUMAB
     Dosage: 752.8 MILLIGRAM, QW (1 EVERY 1 WEEKS)
  1311. ACTEMRA [Suspect]
     Active Substance: TOCILIZUMAB
     Dosage: 752.8 MILLIGRAM, QW (1 EVERY 1 WEEKS)
  1312. ACTEMRA [Suspect]
     Active Substance: TOCILIZUMAB
     Dosage: 752.8 MILLIGRAM, QW (1 EVERY 1 WEEKS)
     Route: 042
  1313. ACTEMRA [Suspect]
     Active Substance: TOCILIZUMAB
  1314. ACTEMRA [Suspect]
     Active Substance: TOCILIZUMAB
  1315. ACTEMRA [Suspect]
     Active Substance: TOCILIZUMAB
     Route: 042
  1316. ACTEMRA [Suspect]
     Active Substance: TOCILIZUMAB
     Route: 042
  1317. ACTEMRA [Suspect]
     Active Substance: TOCILIZUMAB
  1318. ACTEMRA [Suspect]
     Active Substance: TOCILIZUMAB
  1319. ACTEMRA [Suspect]
     Active Substance: TOCILIZUMAB
     Route: 042
  1320. ACTEMRA [Suspect]
     Active Substance: TOCILIZUMAB
     Route: 042
  1321. ACTEMRA [Suspect]
     Active Substance: TOCILIZUMAB
  1322. ACTEMRA [Suspect]
     Active Substance: TOCILIZUMAB
     Route: 042
  1323. ACTEMRA [Suspect]
     Active Substance: TOCILIZUMAB
  1324. ACTEMRA [Suspect]
     Active Substance: TOCILIZUMAB
     Route: 042
  1325. ACTEMRA [Suspect]
     Active Substance: TOCILIZUMAB
     Indication: Rheumatoid arthritis
  1326. ACTEMRA [Suspect]
     Active Substance: TOCILIZUMAB
     Route: 058
  1327. ACTEMRA [Suspect]
     Active Substance: TOCILIZUMAB
     Route: 058
  1328. ACTEMRA [Suspect]
     Active Substance: TOCILIZUMAB
  1329. APREPITANT [Suspect]
     Active Substance: APREPITANT
     Indication: Product used for unknown indication
  1330. APREPITANT [Suspect]
     Active Substance: APREPITANT
     Route: 065
  1331. APREPITANT [Suspect]
     Active Substance: APREPITANT
     Route: 065
  1332. APREPITANT [Suspect]
     Active Substance: APREPITANT
  1333. ASACOL [Suspect]
     Active Substance: MESALAMINE
     Indication: Rheumatoid arthritis
  1334. ASACOL [Suspect]
     Active Substance: MESALAMINE
     Route: 065
  1335. ASACOL [Suspect]
     Active Substance: MESALAMINE
     Route: 065
  1336. ASACOL [Suspect]
     Active Substance: MESALAMINE
  1337. AZATHIOPRINE [Suspect]
     Active Substance: AZATHIOPRINE
     Indication: Product used for unknown indication
  1338. AZATHIOPRINE [Suspect]
     Active Substance: AZATHIOPRINE
     Route: 065
  1339. AZATHIOPRINE [Suspect]
     Active Substance: AZATHIOPRINE
     Route: 065
  1340. AZATHIOPRINE [Suspect]
     Active Substance: AZATHIOPRINE
  1341. AZULFIDINE [Suspect]
     Active Substance: SULFASALAZINE
     Indication: Rheumatoid arthritis
  1342. AZULFIDINE [Suspect]
     Active Substance: SULFASALAZINE
     Route: 065
  1343. AZULFIDINE [Suspect]
     Active Substance: SULFASALAZINE
     Route: 065
  1344. AZULFIDINE [Suspect]
     Active Substance: SULFASALAZINE
  1345. CALCIUM CHLORIDE [Suspect]
     Active Substance: CALCIUM CHLORIDE
     Indication: Product used for unknown indication
  1346. CALCIUM CHLORIDE [Suspect]
     Active Substance: CALCIUM CHLORIDE
     Route: 065
  1347. CALCIUM CHLORIDE [Suspect]
     Active Substance: CALCIUM CHLORIDE
     Route: 065
  1348. CALCIUM CHLORIDE [Suspect]
     Active Substance: CALCIUM CHLORIDE
  1349. CALCIUM CITRATE [Suspect]
     Active Substance: CALCIUM CITRATE
     Indication: Product used for unknown indication
  1350. CALCIUM CITRATE [Suspect]
     Active Substance: CALCIUM CITRATE
     Route: 065
  1351. CALCIUM CITRATE [Suspect]
     Active Substance: CALCIUM CITRATE
     Route: 065
  1352. CALCIUM CITRATE [Suspect]
     Active Substance: CALCIUM CITRATE
  1353. CHLORHEXIDINE [Suspect]
     Active Substance: CHLORHEXIDINE
     Indication: Rheumatoid arthritis
  1354. CHLORHEXIDINE [Suspect]
     Active Substance: CHLORHEXIDINE
     Route: 048
  1355. CHLORHEXIDINE [Suspect]
     Active Substance: CHLORHEXIDINE
     Route: 048
  1356. CHLORHEXIDINE [Suspect]
     Active Substance: CHLORHEXIDINE
  1357. CHLORHEXIDINE [Suspect]
     Active Substance: CHLORHEXIDINE
     Indication: Rheumatoid arthritis
  1358. CHLORHEXIDINE [Suspect]
     Active Substance: CHLORHEXIDINE
     Route: 002
  1359. CHLORHEXIDINE [Suspect]
     Active Substance: CHLORHEXIDINE
     Route: 002
  1360. CHLORHEXIDINE [Suspect]
     Active Substance: CHLORHEXIDINE
  1361. CHLORHEXIDINE [Suspect]
     Active Substance: CHLORHEXIDINE
     Indication: Rheumatoid arthritis
  1362. CHLORHEXIDINE [Suspect]
     Active Substance: CHLORHEXIDINE
     Route: 061
  1363. CHLORHEXIDINE [Suspect]
     Active Substance: CHLORHEXIDINE
     Route: 061
  1364. CHLORHEXIDINE [Suspect]
     Active Substance: CHLORHEXIDINE
  1365. CHLORHEXIDINE GLUCONATE\ISOPROPYL ALCOHOL [Suspect]
     Active Substance: CHLORHEXIDINE GLUCONATE\ISOPROPYL ALCOHOL
     Indication: Product used for unknown indication
     Route: 065
  1366. CHLORHEXIDINE GLUCONATE\ISOPROPYL ALCOHOL [Suspect]
     Active Substance: CHLORHEXIDINE GLUCONATE\ISOPROPYL ALCOHOL
  1367. CHLORHEXIDINE GLUCONATE\ISOPROPYL ALCOHOL [Suspect]
     Active Substance: CHLORHEXIDINE GLUCONATE\ISOPROPYL ALCOHOL
  1368. CHLORHEXIDINE GLUCONATE\ISOPROPYL ALCOHOL [Suspect]
     Active Substance: CHLORHEXIDINE GLUCONATE\ISOPROPYL ALCOHOL
     Route: 065
  1369. CHLORHEXIDINE GLUCONATE\ISOPROPYL ALCOHOL [Suspect]
     Active Substance: CHLORHEXIDINE GLUCONATE\ISOPROPYL ALCOHOL
     Route: 048
  1370. CHLORHEXIDINE GLUCONATE\ISOPROPYL ALCOHOL [Suspect]
     Active Substance: CHLORHEXIDINE GLUCONATE\ISOPROPYL ALCOHOL
  1371. CHLORHEXIDINE GLUCONATE\ISOPROPYL ALCOHOL [Suspect]
     Active Substance: CHLORHEXIDINE GLUCONATE\ISOPROPYL ALCOHOL
  1372. CHLORHEXIDINE GLUCONATE\ISOPROPYL ALCOHOL [Suspect]
     Active Substance: CHLORHEXIDINE GLUCONATE\ISOPROPYL ALCOHOL
     Route: 048
  1373. CLIOQUINOL [Suspect]
     Active Substance: CLIOQUINOL
     Indication: Product used for unknown indication
  1374. CLIOQUINOL [Suspect]
     Active Substance: CLIOQUINOL
     Route: 065
  1375. CLIOQUINOL [Suspect]
     Active Substance: CLIOQUINOL
     Route: 065
  1376. CLIOQUINOL [Suspect]
     Active Substance: CLIOQUINOL
  1377. DESOGESTREL\ETHINYL ESTRADIOL [Suspect]
     Active Substance: DESOGESTREL\ETHINYL ESTRADIOL
     Indication: Product used for unknown indication
  1378. DESOGESTREL\ETHINYL ESTRADIOL [Suspect]
     Active Substance: DESOGESTREL\ETHINYL ESTRADIOL
     Route: 065
  1379. DESOGESTREL\ETHINYL ESTRADIOL [Suspect]
     Active Substance: DESOGESTREL\ETHINYL ESTRADIOL
     Route: 065
  1380. DESOGESTREL\ETHINYL ESTRADIOL [Suspect]
     Active Substance: DESOGESTREL\ETHINYL ESTRADIOL
  1381. DICLOFENAC [Suspect]
     Active Substance: DICLOFENAC
     Indication: Product used for unknown indication
  1382. DICLOFENAC [Suspect]
     Active Substance: DICLOFENAC
  1383. DICLOFENAC [Suspect]
     Active Substance: DICLOFENAC
     Route: 065
  1384. DICLOFENAC [Suspect]
     Active Substance: DICLOFENAC
     Route: 065
  1385. DICLOFENAC [Suspect]
     Active Substance: DICLOFENAC
  1386. DICLOFENAC [Suspect]
     Active Substance: DICLOFENAC
  1387. DICLOFENAC [Suspect]
     Active Substance: DICLOFENAC
     Route: 048
  1388. DICLOFENAC [Suspect]
     Active Substance: DICLOFENAC
     Route: 048
  1389. DILTIAZEM HYDROCHLORIDE [Suspect]
     Active Substance: DILTIAZEM HYDROCHLORIDE
     Indication: Rheumatoid arthritis
  1390. DILTIAZEM HYDROCHLORIDE [Suspect]
     Active Substance: DILTIAZEM HYDROCHLORIDE
     Route: 065
  1391. DILTIAZEM HYDROCHLORIDE [Suspect]
     Active Substance: DILTIAZEM HYDROCHLORIDE
     Route: 065
  1392. DILTIAZEM HYDROCHLORIDE [Suspect]
     Active Substance: DILTIAZEM HYDROCHLORIDE
  1393. ENBREL [Suspect]
     Active Substance: ETANERCEPT
     Indication: Rheumatoid arthritis
  1394. ENBREL [Suspect]
     Active Substance: ETANERCEPT
     Route: 061
  1395. ENBREL [Suspect]
     Active Substance: ETANERCEPT
     Route: 061
  1396. ENBREL [Suspect]
     Active Substance: ETANERCEPT
  1397. ENBREL [Suspect]
     Active Substance: ETANERCEPT
     Indication: Rheumatoid arthritis
  1398. ENBREL [Suspect]
     Active Substance: ETANERCEPT
     Route: 048
  1399. ENBREL [Suspect]
     Active Substance: ETANERCEPT
     Route: 048
  1400. ENBREL [Suspect]
     Active Substance: ETANERCEPT
  1401. ENTYVIO [Suspect]
     Active Substance: VEDOLIZUMAB
     Indication: Product used for unknown indication
  1402. ENTYVIO [Suspect]
     Active Substance: VEDOLIZUMAB
     Route: 042
  1403. ENTYVIO [Suspect]
     Active Substance: VEDOLIZUMAB
     Route: 042
  1404. ENTYVIO [Suspect]
     Active Substance: VEDOLIZUMAB
  1405. FOLIC ACID [Suspect]
     Active Substance: FOLIC ACID
     Indication: Rheumatoid arthritis
  1406. FOLIC ACID [Suspect]
     Active Substance: FOLIC ACID
  1407. FOLIC ACID [Suspect]
     Active Substance: FOLIC ACID
     Route: 065
  1408. FOLIC ACID [Suspect]
     Active Substance: FOLIC ACID
     Route: 065
  1409. FOLIC ACID [Suspect]
     Active Substance: FOLIC ACID
  1410. FOLIC ACID [Suspect]
     Active Substance: FOLIC ACID
  1411. FOLIC ACID [Suspect]
     Active Substance: FOLIC ACID
     Route: 065
  1412. FOLIC ACID [Suspect]
     Active Substance: FOLIC ACID
     Route: 065
  1413. HUMIRA [Suspect]
     Active Substance: ADALIMUMAB
     Indication: Rheumatoid arthritis
  1414. HUMIRA [Suspect]
     Active Substance: ADALIMUMAB
  1415. HUMIRA [Suspect]
     Active Substance: ADALIMUMAB
     Route: 058
  1416. HUMIRA [Suspect]
     Active Substance: ADALIMUMAB
     Route: 058
  1417. HUMIRA [Suspect]
     Active Substance: ADALIMUMAB
     Route: 058
  1418. HUMIRA [Suspect]
     Active Substance: ADALIMUMAB
     Route: 058
  1419. HUMIRA [Suspect]
     Active Substance: ADALIMUMAB
  1420. HUMIRA [Suspect]
     Active Substance: ADALIMUMAB
  1421. HUMIRA [Suspect]
     Active Substance: ADALIMUMAB
     Route: 058
  1422. HUMIRA [Suspect]
     Active Substance: ADALIMUMAB
  1423. HUMIRA [Suspect]
     Active Substance: ADALIMUMAB
  1424. HUMIRA [Suspect]
     Active Substance: ADALIMUMAB
     Route: 058
  1425. HUMIRA [Suspect]
     Active Substance: ADALIMUMAB
  1426. HUMIRA [Suspect]
     Active Substance: ADALIMUMAB
  1427. HUMIRA [Suspect]
     Active Substance: ADALIMUMAB
     Route: 058
  1428. HUMIRA [Suspect]
     Active Substance: ADALIMUMAB
     Route: 058
  1429. HYDROCORTISONE [Suspect]
     Active Substance: HYDROCORTISONE
     Indication: Rheumatoid arthritis
  1430. HYDROCORTISONE [Suspect]
     Active Substance: HYDROCORTISONE
  1431. HYDROCORTISONE [Suspect]
     Active Substance: HYDROCORTISONE
     Route: 048
  1432. HYDROCORTISONE [Suspect]
     Active Substance: HYDROCORTISONE
     Route: 048
  1433. HYDROCORTISONE [Suspect]
     Active Substance: HYDROCORTISONE
  1434. HYDROCORTISONE [Suspect]
     Active Substance: HYDROCORTISONE
  1435. HYDROCORTISONE [Suspect]
     Active Substance: HYDROCORTISONE
     Route: 065
  1436. HYDROCORTISONE [Suspect]
     Active Substance: HYDROCORTISONE
     Route: 065
  1437. HYDROCORTISONE SODIUM SUCCINATE [Suspect]
     Active Substance: HYDROCORTISONE SODIUM SUCCINATE
     Indication: Rheumatoid arthritis
     Route: 058
  1438. HYDROCORTISONE SODIUM SUCCINATE [Suspect]
     Active Substance: HYDROCORTISONE SODIUM SUCCINATE
  1439. HYDROCORTISONE SODIUM SUCCINATE [Suspect]
     Active Substance: HYDROCORTISONE SODIUM SUCCINATE
  1440. HYDROCORTISONE SODIUM SUCCINATE [Suspect]
     Active Substance: HYDROCORTISONE SODIUM SUCCINATE
     Route: 058
  1441. HYDROCORTISONE SODIUM SUCCINATE [Suspect]
     Active Substance: HYDROCORTISONE SODIUM SUCCINATE
     Route: 049
  1442. HYDROCORTISONE SODIUM SUCCINATE [Suspect]
     Active Substance: HYDROCORTISONE SODIUM SUCCINATE
  1443. HYDROCORTISONE SODIUM SUCCINATE [Suspect]
     Active Substance: HYDROCORTISONE SODIUM SUCCINATE
  1444. HYDROCORTISONE SODIUM SUCCINATE [Suspect]
     Active Substance: HYDROCORTISONE SODIUM SUCCINATE
     Route: 049
  1445. HYDROCORTISONE SODIUM SUCCINATE [Suspect]
     Active Substance: HYDROCORTISONE SODIUM SUCCINATE
     Route: 048
  1446. HYDROCORTISONE SODIUM SUCCINATE [Suspect]
     Active Substance: HYDROCORTISONE SODIUM SUCCINATE
     Route: 048
  1447. HYDROCORTISONE SODIUM SUCCINATE [Suspect]
     Active Substance: HYDROCORTISONE SODIUM SUCCINATE
  1448. HYDROCORTISONE SODIUM SUCCINATE [Suspect]
     Active Substance: HYDROCORTISONE SODIUM SUCCINATE
  1449. HYDROXYCHLOROQUINE SULFATE [Suspect]
     Active Substance: HYDROXYCHLOROQUINE SULFATE
     Indication: Rheumatoid arthritis
     Route: 048
  1450. HYDROXYCHLOROQUINE SULFATE [Suspect]
     Active Substance: HYDROXYCHLOROQUINE SULFATE
  1451. HYDROXYCHLOROQUINE SULFATE [Suspect]
     Active Substance: HYDROXYCHLOROQUINE SULFATE
  1452. HYDROXYCHLOROQUINE SULFATE [Suspect]
     Active Substance: HYDROXYCHLOROQUINE SULFATE
     Route: 048
  1453. HYDROXYCHLOROQUINE SULFATE [Suspect]
     Active Substance: HYDROXYCHLOROQUINE SULFATE
     Route: 048
  1454. HYDROXYCHLOROQUINE SULFATE [Suspect]
     Active Substance: HYDROXYCHLOROQUINE SULFATE
  1455. HYDROXYCHLOROQUINE SULFATE [Suspect]
     Active Substance: HYDROXYCHLOROQUINE SULFATE
  1456. HYDROXYCHLOROQUINE SULFATE [Suspect]
     Active Substance: HYDROXYCHLOROQUINE SULFATE
     Route: 048
  1457. HYDROXYCHLOROQUINE SULFATE [Suspect]
     Active Substance: HYDROXYCHLOROQUINE SULFATE
  1458. HYDROXYCHLOROQUINE SULFATE [Suspect]
     Active Substance: HYDROXYCHLOROQUINE SULFATE
  1459. HYDROXYCHLOROQUINE SULFATE [Suspect]
     Active Substance: HYDROXYCHLOROQUINE SULFATE
     Route: 048
  1460. HYDROXYCHLOROQUINE SULFATE [Suspect]
     Active Substance: HYDROXYCHLOROQUINE SULFATE
     Route: 048
  1461. HYDROXYCHLOROQUINE SULFATE [Suspect]
     Active Substance: HYDROXYCHLOROQUINE SULFATE
  1462. HYDROXYCHLOROQUINE SULFATE [Suspect]
     Active Substance: HYDROXYCHLOROQUINE SULFATE
  1463. HYDROXYCHLOROQUINE SULFATE [Suspect]
     Active Substance: HYDROXYCHLOROQUINE SULFATE
     Route: 065
  1464. HYDROXYCHLOROQUINE SULFATE [Suspect]
     Active Substance: HYDROXYCHLOROQUINE SULFATE
     Route: 065
  1465. INDOMETHACIN [Suspect]
     Active Substance: INDOMETHACIN
     Indication: Product used for unknown indication
  1466. INDOMETHACIN [Suspect]
     Active Substance: INDOMETHACIN
     Route: 065
  1467. INDOMETHACIN [Suspect]
     Active Substance: INDOMETHACIN
     Route: 065
  1468. INDOMETHACIN [Suspect]
     Active Substance: INDOMETHACIN
  1469. INFLIXIMAB [Suspect]
     Active Substance: INFLIXIMAB
     Indication: Rheumatoid arthritis
  1470. INFLIXIMAB [Suspect]
     Active Substance: INFLIXIMAB
  1471. INFLIXIMAB [Suspect]
     Active Substance: INFLIXIMAB
     Route: 042
  1472. INFLIXIMAB [Suspect]
     Active Substance: INFLIXIMAB
     Route: 042
  1473. INFLIXIMAB [Suspect]
     Active Substance: INFLIXIMAB
  1474. INFLIXIMAB [Suspect]
     Active Substance: INFLIXIMAB
  1475. INFLIXIMAB [Suspect]
     Active Substance: INFLIXIMAB
     Route: 042
  1476. INFLIXIMAB [Suspect]
     Active Substance: INFLIXIMAB
     Route: 042
  1477. INFLIXIMAB [Suspect]
     Active Substance: INFLIXIMAB
  1478. INFLIXIMAB [Suspect]
     Active Substance: INFLIXIMAB
     Route: 065
  1479. INFLIXIMAB [Suspect]
     Active Substance: INFLIXIMAB
  1480. INFLIXIMAB [Suspect]
     Active Substance: INFLIXIMAB
     Route: 065
  1481. LEFLUNOMIDE [Suspect]
     Active Substance: LEFLUNOMIDE
     Indication: Product used for unknown indication
  1482. LEFLUNOMIDE [Suspect]
     Active Substance: LEFLUNOMIDE
  1483. LEFLUNOMIDE [Suspect]
     Active Substance: LEFLUNOMIDE
     Route: 048
  1484. LEFLUNOMIDE [Suspect]
     Active Substance: LEFLUNOMIDE
     Route: 048
  1485. LEFLUNOMIDE [Suspect]
     Active Substance: LEFLUNOMIDE
  1486. LEFLUNOMIDE [Suspect]
     Active Substance: LEFLUNOMIDE
  1487. LEFLUNOMIDE [Suspect]
     Active Substance: LEFLUNOMIDE
     Route: 065
  1488. LEFLUNOMIDE [Suspect]
     Active Substance: LEFLUNOMIDE
     Route: 065
  1489. METHOTREXATE [Suspect]
     Active Substance: METHOTREXATE
     Indication: Rheumatoid arthritis
  1490. METHOTREXATE [Suspect]
     Active Substance: METHOTREXATE
  1491. METHOTREXATE [Suspect]
     Active Substance: METHOTREXATE
     Route: 065
  1492. METHOTREXATE [Suspect]
     Active Substance: METHOTREXATE
     Route: 065
  1493. METHOTREXATE [Suspect]
     Active Substance: METHOTREXATE
  1494. METHOTREXATE [Suspect]
     Active Substance: METHOTREXATE
  1495. METHOTREXATE [Suspect]
     Active Substance: METHOTREXATE
     Route: 048
  1496. METHOTREXATE [Suspect]
     Active Substance: METHOTREXATE
     Route: 048
  1497. METHOTREXATE [Suspect]
     Active Substance: METHOTREXATE
  1498. METHOTREXATE [Suspect]
     Active Substance: METHOTREXATE
  1499. METHOTREXATE [Suspect]
     Active Substance: METHOTREXATE
     Route: 048
  1500. METHOTREXATE [Suspect]
     Active Substance: METHOTREXATE
     Route: 048
  1501. METHOTREXATE [Suspect]
     Active Substance: METHOTREXATE
     Dosage: 20 MILLIGRAM, QW (1 EVERY 1 WEEKS)
     Route: 048
  1502. METHOTREXATE [Suspect]
     Active Substance: METHOTREXATE
     Dosage: 20 MILLIGRAM, QW (1 EVERY 1 WEEKS)
  1503. METHOTREXATE [Suspect]
     Active Substance: METHOTREXATE
     Dosage: 20 MILLIGRAM, QW (1 EVERY 1 WEEKS)
  1504. METHOTREXATE [Suspect]
     Active Substance: METHOTREXATE
     Dosage: 20 MILLIGRAM, QW (1 EVERY 1 WEEKS)
     Route: 048
  1505. METHOTREXATE [Suspect]
     Active Substance: METHOTREXATE
  1506. METHOTREXATE [Suspect]
     Active Substance: METHOTREXATE
     Route: 048
  1507. METHOTREXATE [Suspect]
     Active Substance: METHOTREXATE
  1508. METHOTREXATE [Suspect]
     Active Substance: METHOTREXATE
     Route: 048
  1509. METHOTREXATE [Suspect]
     Active Substance: METHOTREXATE
     Route: 016
  1510. METHOTREXATE [Suspect]
     Active Substance: METHOTREXATE
     Route: 016
  1511. METHOTREXATE [Suspect]
     Active Substance: METHOTREXATE
  1512. METHOTREXATE [Suspect]
     Active Substance: METHOTREXATE
  1513. METHOTREXATE [Suspect]
     Active Substance: METHOTREXATE
     Dosage: 20 MILLIGRAM, QD (1 EVERY 1 DAYS)
     Route: 065
  1514. METHOTREXATE [Suspect]
     Active Substance: METHOTREXATE
     Dosage: 20 MILLIGRAM, QD (1 EVERY 1 DAYS)
  1515. METHOTREXATE [Suspect]
     Active Substance: METHOTREXATE
     Dosage: 20 MILLIGRAM, QD (1 EVERY 1 DAYS)
     Route: 065
  1516. METHOTREXATE [Suspect]
     Active Substance: METHOTREXATE
     Dosage: 20 MILLIGRAM, QD (1 EVERY 1 DAYS)
  1517. METHOTREXATE [Suspect]
     Active Substance: METHOTREXATE
     Route: 048
  1518. METHOTREXATE [Suspect]
     Active Substance: METHOTREXATE
  1519. METHOTREXATE [Suspect]
     Active Substance: METHOTREXATE
  1520. METHOTREXATE [Suspect]
     Active Substance: METHOTREXATE
     Route: 048
  1521. METHOTREXATE [Suspect]
     Active Substance: METHOTREXATE
  1522. METHOTREXATE [Suspect]
     Active Substance: METHOTREXATE
     Route: 048
  1523. METHOTREXATE [Suspect]
     Active Substance: METHOTREXATE
     Route: 048
  1524. METHOTREXATE [Suspect]
     Active Substance: METHOTREXATE
  1525. METHOTREXATE [Suspect]
     Active Substance: METHOTREXATE
  1526. METHOTREXATE [Suspect]
     Active Substance: METHOTREXATE
  1527. METHOTREXATE [Suspect]
     Active Substance: METHOTREXATE
     Route: 013
  1528. METHOTREXATE [Suspect]
     Active Substance: METHOTREXATE
     Route: 013
  1529. METHOTREXATE [Suspect]
     Active Substance: METHOTREXATE
     Dosage: 15 MILLIGRAM, QD (1 EVERY ONE DAY)
  1530. METHOTREXATE [Suspect]
     Active Substance: METHOTREXATE
     Dosage: 15 MILLIGRAM, QD (1 EVERY ONE DAY)
  1531. METHOTREXATE [Suspect]
     Active Substance: METHOTREXATE
     Dosage: 15 MILLIGRAM, QD (1 EVERY ONE DAY)
     Route: 048
  1532. METHOTREXATE [Suspect]
     Active Substance: METHOTREXATE
     Dosage: 15 MILLIGRAM, QD (1 EVERY ONE DAY)
     Route: 048
  1533. METHOTREXATE [Suspect]
     Active Substance: METHOTREXATE
  1534. METHOTREXATE [Suspect]
     Active Substance: METHOTREXATE
  1535. METHOTREXATE [Suspect]
     Active Substance: METHOTREXATE
     Route: 048
  1536. METHOTREXATE [Suspect]
     Active Substance: METHOTREXATE
     Route: 048
  1537. METHOTREXATE [Suspect]
     Active Substance: METHOTREXATE
     Dosage: 20 MILLIGRAM, QD (1 EVERY 1 DAYS)
     Route: 058
  1538. METHOTREXATE [Suspect]
     Active Substance: METHOTREXATE
     Dosage: 20 MILLIGRAM, QD (1 EVERY 1 DAYS)
  1539. METHOTREXATE [Suspect]
     Active Substance: METHOTREXATE
     Dosage: 20 MILLIGRAM, QD (1 EVERY 1 DAYS)
     Route: 058
  1540. METHOTREXATE [Suspect]
     Active Substance: METHOTREXATE
     Dosage: 20 MILLIGRAM, QD (1 EVERY 1 DAYS)
  1541. METHOTREXATE [Suspect]
     Active Substance: METHOTREXATE
     Dosage: 25 MILLIGRAM, QD (1 EVERY 1 DAYS)
  1542. METHOTREXATE [Suspect]
     Active Substance: METHOTREXATE
     Dosage: 25 MILLIGRAM, QD (1 EVERY 1 DAYS)
  1543. METHOTREXATE [Suspect]
     Active Substance: METHOTREXATE
     Dosage: 25 MILLIGRAM, QD (1 EVERY 1 DAYS)
     Route: 048
  1544. METHOTREXATE [Suspect]
     Active Substance: METHOTREXATE
     Dosage: 25 MILLIGRAM, QD (1 EVERY 1 DAYS)
     Route: 048
  1545. METHOTREXATE [Suspect]
     Active Substance: METHOTREXATE
  1546. METHOTREXATE [Suspect]
     Active Substance: METHOTREXATE
     Route: 065
  1547. METHOTREXATE [Suspect]
     Active Substance: METHOTREXATE
     Route: 065
  1548. METHOTREXATE [Suspect]
     Active Substance: METHOTREXATE
  1549. METHOTREXATE [Suspect]
     Active Substance: METHOTREXATE
     Route: 048
  1550. METHOTREXATE [Suspect]
     Active Substance: METHOTREXATE
     Route: 048
  1551. METHOTREXATE [Suspect]
     Active Substance: METHOTREXATE
  1552. METHOTREXATE [Suspect]
     Active Substance: METHOTREXATE
  1553. METHOTREXATE [Suspect]
     Active Substance: METHOTREXATE
     Route: 058
  1554. METHOTREXATE [Suspect]
     Active Substance: METHOTREXATE
     Route: 058
  1555. METHOTREXATE [Suspect]
     Active Substance: METHOTREXATE
  1556. METHOTREXATE [Suspect]
     Active Substance: METHOTREXATE
  1557. METHOTREXATE [Suspect]
     Active Substance: METHOTREXATE
     Route: 013
  1558. METHOTREXATE [Suspect]
     Active Substance: METHOTREXATE
  1559. METHOTREXATE [Suspect]
     Active Substance: METHOTREXATE
  1560. METHOTREXATE [Suspect]
     Active Substance: METHOTREXATE
     Route: 013
  1561. METHOTREXATE [Suspect]
     Active Substance: METHOTREXATE
     Indication: Rheumatoid arthritis
  1562. METHOTREXATE [Suspect]
     Active Substance: METHOTREXATE
     Route: 043
  1563. METHOTREXATE [Suspect]
     Active Substance: METHOTREXATE
     Route: 043
  1564. METHOTREXATE [Suspect]
     Active Substance: METHOTREXATE
  1565. METHOTREXATE [Suspect]
     Active Substance: METHOTREXATE
     Indication: Rheumatoid arthritis
  1566. METHOTREXATE [Suspect]
     Active Substance: METHOTREXATE
     Route: 058
  1567. METHOTREXATE [Suspect]
     Active Substance: METHOTREXATE
     Route: 058
  1568. METHOTREXATE [Suspect]
     Active Substance: METHOTREXATE
  1569. NAPROXEN SODIUM [Suspect]
     Active Substance: NAPROXEN SODIUM
     Indication: Rheumatoid arthritis
     Route: 065
  1570. NAPROXEN SODIUM [Suspect]
     Active Substance: NAPROXEN SODIUM
  1571. NAPROXEN SODIUM [Suspect]
     Active Substance: NAPROXEN SODIUM
  1572. NAPROXEN SODIUM [Suspect]
     Active Substance: NAPROXEN SODIUM
     Route: 065
  1573. NAPROXEN SODIUM [Suspect]
     Active Substance: NAPROXEN SODIUM
     Dosage: 1000 MILLIGRAM, QD (1 EVERY 1 DAYS)
     Route: 065
  1574. NAPROXEN SODIUM [Suspect]
     Active Substance: NAPROXEN SODIUM
     Dosage: 1000 MILLIGRAM, QD (1 EVERY 1 DAYS)
  1575. NAPROXEN SODIUM [Suspect]
     Active Substance: NAPROXEN SODIUM
     Dosage: 1000 MILLIGRAM, QD (1 EVERY 1 DAYS)
  1576. NAPROXEN SODIUM [Suspect]
     Active Substance: NAPROXEN SODIUM
     Dosage: 1000 MILLIGRAM, QD (1 EVERY 1 DAYS)
     Route: 065
  1577. OTEZLA [Suspect]
     Active Substance: APREMILAST
     Indication: Product used for unknown indication
  1578. OTEZLA [Suspect]
     Active Substance: APREMILAST
  1579. OTEZLA [Suspect]
     Active Substance: APREMILAST
     Route: 065
  1580. OTEZLA [Suspect]
     Active Substance: APREMILAST
     Route: 065
  1581. OTEZLA [Suspect]
     Active Substance: APREMILAST
  1582. OTEZLA [Suspect]
     Active Substance: APREMILAST
  1583. OTEZLA [Suspect]
     Active Substance: APREMILAST
     Route: 065
  1584. OTEZLA [Suspect]
     Active Substance: APREMILAST
     Route: 065
  1585. OTEZLA [Suspect]
     Active Substance: APREMILAST
  1586. OTEZLA [Suspect]
     Active Substance: APREMILAST
  1587. OTEZLA [Suspect]
     Active Substance: APREMILAST
     Route: 048
  1588. OTEZLA [Suspect]
     Active Substance: APREMILAST
     Route: 048
  1589. OTEZLA [Suspect]
     Active Substance: APREMILAST
  1590. OTEZLA [Suspect]
     Active Substance: APREMILAST
  1591. OTEZLA [Suspect]
     Active Substance: APREMILAST
     Route: 048
  1592. OTEZLA [Suspect]
     Active Substance: APREMILAST
     Route: 048
  1593. OTEZLA [Suspect]
     Active Substance: APREMILAST
  1594. OTEZLA [Suspect]
     Active Substance: APREMILAST
     Route: 048
  1595. OTEZLA [Suspect]
     Active Substance: APREMILAST
  1596. OTEZLA [Suspect]
     Active Substance: APREMILAST
     Route: 048
  1597. OXYCODONE [Suspect]
     Active Substance: OXYCODONE
     Indication: Product used for unknown indication
  1598. OXYCODONE [Suspect]
     Active Substance: OXYCODONE
     Route: 065
  1599. OXYCODONE [Suspect]
     Active Substance: OXYCODONE
     Route: 065
  1600. OXYCODONE [Suspect]
     Active Substance: OXYCODONE
  1601. PANTOPRAZOLE SODIUM [Suspect]
     Active Substance: PANTOPRAZOLE SODIUM
     Indication: Product used for unknown indication
  1602. PANTOPRAZOLE SODIUM [Suspect]
     Active Substance: PANTOPRAZOLE SODIUM
  1603. PANTOPRAZOLE SODIUM [Suspect]
     Active Substance: PANTOPRAZOLE SODIUM
     Route: 065
  1604. PANTOPRAZOLE SODIUM [Suspect]
     Active Substance: PANTOPRAZOLE SODIUM
     Route: 065
  1605. PANTOPRAZOLE SODIUM [Suspect]
     Active Substance: PANTOPRAZOLE SODIUM
  1606. PANTOPRAZOLE SODIUM [Suspect]
     Active Substance: PANTOPRAZOLE SODIUM
  1607. PANTOPRAZOLE SODIUM [Suspect]
     Active Substance: PANTOPRAZOLE SODIUM
     Route: 048
  1608. PANTOPRAZOLE SODIUM [Suspect]
     Active Substance: PANTOPRAZOLE SODIUM
     Route: 048
  1609. PARA-AMINOSALICYLIC ACID [Suspect]
     Active Substance: AMINOSALICYLIC ACID
     Indication: Product used for unknown indication
  1610. PARA-AMINOSALICYLIC ACID [Suspect]
     Active Substance: AMINOSALICYLIC ACID
     Route: 065
  1611. PARA-AMINOSALICYLIC ACID [Suspect]
     Active Substance: AMINOSALICYLIC ACID
     Route: 065
  1612. PARA-AMINOSALICYLIC ACID [Suspect]
     Active Substance: AMINOSALICYLIC ACID
  1613. PHTHALYLSULFATHIAZOLE [Suspect]
     Active Substance: PHTHALYLSULFATHIAZOLE
     Indication: Rheumatoid arthritis
  1614. PHTHALYLSULFATHIAZOLE [Suspect]
     Active Substance: PHTHALYLSULFATHIAZOLE
  1615. PHTHALYLSULFATHIAZOLE [Suspect]
     Active Substance: PHTHALYLSULFATHIAZOLE
     Route: 048
  1616. PHTHALYLSULFATHIAZOLE [Suspect]
     Active Substance: PHTHALYLSULFATHIAZOLE
     Route: 048
  1617. PHTHALYLSULFATHIAZOLE [Suspect]
     Active Substance: PHTHALYLSULFATHIAZOLE
  1618. PHTHALYLSULFATHIAZOLE [Suspect]
     Active Substance: PHTHALYLSULFATHIAZOLE
  1619. PHTHALYLSULFATHIAZOLE [Suspect]
     Active Substance: PHTHALYLSULFATHIAZOLE
     Route: 048
  1620. PHTHALYLSULFATHIAZOLE [Suspect]
     Active Substance: PHTHALYLSULFATHIAZOLE
     Route: 048
  1621. PHTHALYLSULFATHIAZOLE [Suspect]
     Active Substance: PHTHALYLSULFATHIAZOLE
     Route: 048
  1622. PHTHALYLSULFATHIAZOLE [Suspect]
     Active Substance: PHTHALYLSULFATHIAZOLE
  1623. PHTHALYLSULFATHIAZOLE [Suspect]
     Active Substance: PHTHALYLSULFATHIAZOLE
  1624. PHTHALYLSULFATHIAZOLE [Suspect]
     Active Substance: PHTHALYLSULFATHIAZOLE
     Route: 048
  1625. PHTHALYLSULFATHIAZOLE [Suspect]
     Active Substance: PHTHALYLSULFATHIAZOLE
     Route: 065
  1626. PHTHALYLSULFATHIAZOLE [Suspect]
     Active Substance: PHTHALYLSULFATHIAZOLE
  1627. PHTHALYLSULFATHIAZOLE [Suspect]
     Active Substance: PHTHALYLSULFATHIAZOLE
  1628. PHTHALYLSULFATHIAZOLE [Suspect]
     Active Substance: PHTHALYLSULFATHIAZOLE
     Route: 065
  1629. PHTHALYLSULFATHIAZOLE [Suspect]
     Active Substance: PHTHALYLSULFATHIAZOLE
     Dosage: 400 MILLIGRAM, QD (1 EVERY 1 DAYS)
     Route: 065
  1630. PHTHALYLSULFATHIAZOLE [Suspect]
     Active Substance: PHTHALYLSULFATHIAZOLE
     Dosage: 400 MILLIGRAM, QD (1 EVERY 1 DAYS)
     Route: 065
  1631. PHTHALYLSULFATHIAZOLE [Suspect]
     Active Substance: PHTHALYLSULFATHIAZOLE
     Dosage: 400 MILLIGRAM, QD (1 EVERY 1 DAYS)
  1632. PHTHALYLSULFATHIAZOLE [Suspect]
     Active Substance: PHTHALYLSULFATHIAZOLE
     Dosage: 400 MILLIGRAM, QD (1 EVERY 1 DAYS)
  1633. PHTHALYLSULFATHIAZOLE [Suspect]
     Active Substance: PHTHALYLSULFATHIAZOLE
     Dosage: 2000 MILLIGRAM, QD (1 EVERY 1 DAY)
  1634. PHTHALYLSULFATHIAZOLE [Suspect]
     Active Substance: PHTHALYLSULFATHIAZOLE
     Dosage: 2000 MILLIGRAM, QD (1 EVERY 1 DAY)
  1635. PHTHALYLSULFATHIAZOLE [Suspect]
     Active Substance: PHTHALYLSULFATHIAZOLE
     Dosage: 2000 MILLIGRAM, QD (1 EVERY 1 DAY)
     Route: 048
  1636. PHTHALYLSULFATHIAZOLE [Suspect]
     Active Substance: PHTHALYLSULFATHIAZOLE
     Dosage: 2000 MILLIGRAM, QD (1 EVERY 1 DAY)
     Route: 048
  1637. PHTHALYLSULFATHIAZOLE [Suspect]
     Active Substance: PHTHALYLSULFATHIAZOLE
     Dosage: 1000 MILLIGRAM, QD (1 EVERY 1 DAYS)
     Route: 048
  1638. PHTHALYLSULFATHIAZOLE [Suspect]
     Active Substance: PHTHALYLSULFATHIAZOLE
     Dosage: 1000 MILLIGRAM, QD (1 EVERY 1 DAYS)
  1639. PHTHALYLSULFATHIAZOLE [Suspect]
     Active Substance: PHTHALYLSULFATHIAZOLE
     Dosage: 1000 MILLIGRAM, QD (1 EVERY 1 DAYS)
  1640. PHTHALYLSULFATHIAZOLE [Suspect]
     Active Substance: PHTHALYLSULFATHIAZOLE
     Dosage: 1000 MILLIGRAM, QD (1 EVERY 1 DAYS)
     Route: 048
  1641. PHTHALYLSULFATHIAZOLE [Suspect]
     Active Substance: PHTHALYLSULFATHIAZOLE
     Dosage: UNK, QD (1 EVERY 1 DAYS)
     Route: 016
  1642. PHTHALYLSULFATHIAZOLE [Suspect]
     Active Substance: PHTHALYLSULFATHIAZOLE
     Dosage: UNK, QD (1 EVERY 1 DAYS)
  1643. PHTHALYLSULFATHIAZOLE [Suspect]
     Active Substance: PHTHALYLSULFATHIAZOLE
     Dosage: UNK, QD (1 EVERY 1 DAYS)
  1644. PHTHALYLSULFATHIAZOLE [Suspect]
     Active Substance: PHTHALYLSULFATHIAZOLE
     Dosage: UNK, QD (1 EVERY 1 DAYS)
     Route: 016
  1645. PHTHALYLSULFATHIAZOLE [Suspect]
     Active Substance: PHTHALYLSULFATHIAZOLE
     Dosage: 2000 MILLIGRAM, QD (1 EVERY 1 DAY)
  1646. PHTHALYLSULFATHIAZOLE [Suspect]
     Active Substance: PHTHALYLSULFATHIAZOLE
     Dosage: 2000 MILLIGRAM, QD (1 EVERY 1 DAY)
  1647. PHTHALYLSULFATHIAZOLE [Suspect]
     Active Substance: PHTHALYLSULFATHIAZOLE
     Dosage: 2000 MILLIGRAM, QD (1 EVERY 1 DAY)
     Route: 058
  1648. PHTHALYLSULFATHIAZOLE [Suspect]
     Active Substance: PHTHALYLSULFATHIAZOLE
     Dosage: 2000 MILLIGRAM, QD (1 EVERY 1 DAY)
     Route: 058
  1649. PREDNISOLONE [Suspect]
     Active Substance: PREDNISOLONE
     Indication: Product used for unknown indication
  1650. PREDNISOLONE [Suspect]
     Active Substance: PREDNISOLONE
  1651. PREDNISOLONE [Suspect]
     Active Substance: PREDNISOLONE
     Route: 065
  1652. PREDNISOLONE [Suspect]
     Active Substance: PREDNISOLONE
     Route: 065
  1653. PREDNISOLONE [Suspect]
     Active Substance: PREDNISOLONE
  1654. PREDNISOLONE [Suspect]
     Active Substance: PREDNISOLONE
  1655. PREDNISOLONE [Suspect]
     Active Substance: PREDNISOLONE
     Route: 048
  1656. PREDNISOLONE [Suspect]
     Active Substance: PREDNISOLONE
     Route: 048
  1657. PREDNISOLONE [Suspect]
     Active Substance: PREDNISOLONE
  1658. PREDNISOLONE [Suspect]
     Active Substance: PREDNISOLONE
     Route: 048
  1659. PREDNISOLONE [Suspect]
     Active Substance: PREDNISOLONE
  1660. PREDNISOLONE [Suspect]
     Active Substance: PREDNISOLONE
     Route: 048
  1661. PREDNISOLONE [Suspect]
     Active Substance: PREDNISOLONE
     Indication: Product used for unknown indication
  1662. PREDNISOLONE [Suspect]
     Active Substance: PREDNISOLONE
     Route: 042
  1663. PREDNISOLONE [Suspect]
     Active Substance: PREDNISOLONE
     Route: 042
  1664. PREDNISOLONE [Suspect]
     Active Substance: PREDNISOLONE
  1665. PSEUDOEPHEDRINE [Suspect]
     Active Substance: PSEUDOEPHEDRINE
     Indication: Rheumatoid arthritis
  1666. PSEUDOEPHEDRINE [Suspect]
     Active Substance: PSEUDOEPHEDRINE
     Route: 065
  1667. PSEUDOEPHEDRINE [Suspect]
     Active Substance: PSEUDOEPHEDRINE
     Route: 065
  1668. PSEUDOEPHEDRINE [Suspect]
     Active Substance: PSEUDOEPHEDRINE
  1669. PSEUDOEPHEDRINE HYDROCHLORIDE [Suspect]
     Active Substance: PSEUDOEPHEDRINE HYDROCHLORIDE
     Indication: Product used for unknown indication
  1670. PSEUDOEPHEDRINE HYDROCHLORIDE [Suspect]
     Active Substance: PSEUDOEPHEDRINE HYDROCHLORIDE
  1671. PSEUDOEPHEDRINE HYDROCHLORIDE [Suspect]
     Active Substance: PSEUDOEPHEDRINE HYDROCHLORIDE
     Route: 065
  1672. PSEUDOEPHEDRINE HYDROCHLORIDE [Suspect]
     Active Substance: PSEUDOEPHEDRINE HYDROCHLORIDE
     Route: 065
  1673. PSEUDOEPHEDRINE HYDROCHLORIDE [Suspect]
     Active Substance: PSEUDOEPHEDRINE HYDROCHLORIDE
  1674. PSEUDOEPHEDRINE HYDROCHLORIDE [Suspect]
     Active Substance: PSEUDOEPHEDRINE HYDROCHLORIDE
  1675. PSEUDOEPHEDRINE HYDROCHLORIDE [Suspect]
     Active Substance: PSEUDOEPHEDRINE HYDROCHLORIDE
     Route: 065
  1676. PSEUDOEPHEDRINE HYDROCHLORIDE [Suspect]
     Active Substance: PSEUDOEPHEDRINE HYDROCHLORIDE
     Route: 065
  1677. PSEUDOEPHEDRINE HYDROCHLORIDE\TRIPROLIDINE HYDROCHLORIDE [Suspect]
     Active Substance: PSEUDOEPHEDRINE HYDROCHLORIDE\TRIPROLIDINE HYDROCHLORIDE
     Indication: Product used for unknown indication
  1678. PSEUDOEPHEDRINE HYDROCHLORIDE\TRIPROLIDINE HYDROCHLORIDE [Suspect]
     Active Substance: PSEUDOEPHEDRINE HYDROCHLORIDE\TRIPROLIDINE HYDROCHLORIDE
     Route: 065
  1679. PSEUDOEPHEDRINE HYDROCHLORIDE\TRIPROLIDINE HYDROCHLORIDE [Suspect]
     Active Substance: PSEUDOEPHEDRINE HYDROCHLORIDE\TRIPROLIDINE HYDROCHLORIDE
     Route: 065
  1680. PSEUDOEPHEDRINE HYDROCHLORIDE\TRIPROLIDINE HYDROCHLORIDE [Suspect]
     Active Substance: PSEUDOEPHEDRINE HYDROCHLORIDE\TRIPROLIDINE HYDROCHLORIDE
  1681. CETIRIZINE HYDROCHLORIDE\PSEUDOEPHEDRINE HYDROCHLORIDE [Suspect]
     Active Substance: CETIRIZINE HYDROCHLORIDE\PSEUDOEPHEDRINE HYDROCHLORIDE
     Indication: Rheumatoid arthritis
  1682. CETIRIZINE HYDROCHLORIDE\PSEUDOEPHEDRINE HYDROCHLORIDE [Suspect]
     Active Substance: CETIRIZINE HYDROCHLORIDE\PSEUDOEPHEDRINE HYDROCHLORIDE
     Route: 065
  1683. CETIRIZINE HYDROCHLORIDE\PSEUDOEPHEDRINE HYDROCHLORIDE [Suspect]
     Active Substance: CETIRIZINE HYDROCHLORIDE\PSEUDOEPHEDRINE HYDROCHLORIDE
     Route: 065
  1684. CETIRIZINE HYDROCHLORIDE\PSEUDOEPHEDRINE HYDROCHLORIDE [Suspect]
     Active Substance: CETIRIZINE HYDROCHLORIDE\PSEUDOEPHEDRINE HYDROCHLORIDE
  1685. REMICADE [Suspect]
     Active Substance: INFLIXIMAB
     Indication: Rheumatoid arthritis
  1686. REMICADE [Suspect]
     Active Substance: INFLIXIMAB
     Indication: Psoriatic arthropathy
  1687. REMICADE [Suspect]
     Active Substance: INFLIXIMAB
     Indication: Psoriasis
     Route: 065
  1688. REMICADE [Suspect]
     Active Substance: INFLIXIMAB
     Indication: Crohn^s disease
     Route: 065
  1689. REMICADE [Suspect]
     Active Substance: INFLIXIMAB
     Indication: Ankylosing spondylitis
  1690. REMICADE [Suspect]
     Active Substance: INFLIXIMAB
  1691. REMICADE [Suspect]
     Active Substance: INFLIXIMAB
     Route: 042
  1692. REMICADE [Suspect]
     Active Substance: INFLIXIMAB
     Route: 042
  1693. REMICADE [Suspect]
     Active Substance: INFLIXIMAB
  1694. REMICADE [Suspect]
     Active Substance: INFLIXIMAB
     Route: 042
  1695. REMICADE [Suspect]
     Active Substance: INFLIXIMAB
  1696. REMICADE [Suspect]
     Active Substance: INFLIXIMAB
     Route: 042
  1697. SULFASALAZINE [Suspect]
     Active Substance: SULFASALAZINE
     Indication: Product used for unknown indication
  1698. SULFASALAZINE [Suspect]
     Active Substance: SULFASALAZINE
     Route: 065
  1699. SULFASALAZINE [Suspect]
     Active Substance: SULFASALAZINE
     Route: 065
  1700. SULFASALAZINE [Suspect]
     Active Substance: SULFASALAZINE
  1701. SECUKINUMAB [Suspect]
     Active Substance: SECUKINUMAB
     Indication: Product used for unknown indication
  1702. SECUKINUMAB [Suspect]
     Active Substance: SECUKINUMAB
     Route: 065
  1703. SECUKINUMAB [Suspect]
     Active Substance: SECUKINUMAB
     Route: 065
  1704. SECUKINUMAB [Suspect]
     Active Substance: SECUKINUMAB
  1705. SULFAMETHOXAZOLE [Suspect]
     Active Substance: SULFAMETHOXAZOLE
     Indication: Rheumatoid arthritis
  1706. SULFAMETHOXAZOLE [Suspect]
     Active Substance: SULFAMETHOXAZOLE
  1707. SULFAMETHOXAZOLE [Suspect]
     Active Substance: SULFAMETHOXAZOLE
     Route: 067
  1708. SULFAMETHOXAZOLE [Suspect]
     Active Substance: SULFAMETHOXAZOLE
     Route: 067
  1709. SULFAMETHOXAZOLE [Suspect]
     Active Substance: SULFAMETHOXAZOLE
  1710. SULFAMETHOXAZOLE [Suspect]
     Active Substance: SULFAMETHOXAZOLE
  1711. SULFAMETHOXAZOLE [Suspect]
     Active Substance: SULFAMETHOXAZOLE
     Route: 065
  1712. SULFAMETHOXAZOLE [Suspect]
     Active Substance: SULFAMETHOXAZOLE
     Route: 065
  1713. SULFASALAZINE [Suspect]
     Active Substance: SULFASALAZINE
     Indication: Rheumatoid arthritis
  1714. SULFASALAZINE [Suspect]
     Active Substance: SULFASALAZINE
     Route: 048
  1715. SULFASALAZINE [Suspect]
     Active Substance: SULFASALAZINE
  1716. SULFASALAZINE [Suspect]
     Active Substance: SULFASALAZINE
     Route: 048
  1717. SULFASALAZINE [Suspect]
     Active Substance: SULFASALAZINE
     Route: 048
  1718. SULFASALAZINE [Suspect]
     Active Substance: SULFASALAZINE
  1719. SULFASALAZINE [Suspect]
     Active Substance: SULFASALAZINE
  1720. SULFASALAZINE [Suspect]
     Active Substance: SULFASALAZINE
     Route: 048
  1721. SULFASALAZINE [Suspect]
     Active Substance: SULFASALAZINE
  1722. SULFASALAZINE [Suspect]
     Active Substance: SULFASALAZINE
     Route: 048
  1723. SULFASALAZINE [Suspect]
     Active Substance: SULFASALAZINE
     Route: 048
  1724. SULFASALAZINE [Suspect]
     Active Substance: SULFASALAZINE
  1725. SULFASALAZINE [Suspect]
     Active Substance: SULFASALAZINE
     Route: 048
  1726. SULFASALAZINE [Suspect]
     Active Substance: SULFASALAZINE
     Route: 048
  1727. SULFASALAZINE [Suspect]
     Active Substance: SULFASALAZINE
  1728. SULFASALAZINE [Suspect]
     Active Substance: SULFASALAZINE
  1729. SULFASALAZINE [Suspect]
     Active Substance: SULFASALAZINE
     Route: 048
  1730. SULFASALAZINE [Suspect]
     Active Substance: SULFASALAZINE
  1731. SULFASALAZINE [Suspect]
     Active Substance: SULFASALAZINE
     Route: 048
  1732. SULFASALAZINE [Suspect]
     Active Substance: SULFASALAZINE
  1733. SULFASALAZINE [Suspect]
     Active Substance: SULFASALAZINE
     Route: 065
  1734. SULFASALAZINE [Suspect]
     Active Substance: SULFASALAZINE
  1735. SULFASALAZINE [Suspect]
     Active Substance: SULFASALAZINE
  1736. SULFASALAZINE [Suspect]
     Active Substance: SULFASALAZINE
     Route: 065
  1737. SULFASALAZINE [Suspect]
     Active Substance: SULFASALAZINE
  1738. SULFASALAZINE [Suspect]
     Active Substance: SULFASALAZINE
     Route: 065
  1739. SULFASALAZINE [Suspect]
     Active Substance: SULFASALAZINE
     Route: 065
  1740. SULFASALAZINE [Suspect]
     Active Substance: SULFASALAZINE
  1741. SULFASALAZINE [Suspect]
     Active Substance: SULFASALAZINE
     Route: 065
  1742. SULFASALAZINE [Suspect]
     Active Substance: SULFASALAZINE
     Route: 065
  1743. SULFASALAZINE [Suspect]
     Active Substance: SULFASALAZINE
  1744. SULFASALAZINE [Suspect]
     Active Substance: SULFASALAZINE
  1745. SULFASALAZINE [Suspect]
     Active Substance: SULFASALAZINE
  1746. SULFASALAZINE [Suspect]
     Active Substance: SULFASALAZINE
     Route: 058
  1747. SULFASALAZINE [Suspect]
     Active Substance: SULFASALAZINE
     Route: 058
  1748. SULFASALAZINE [Suspect]
     Active Substance: SULFASALAZINE
  1749. SULFASALAZINE [Suspect]
     Active Substance: SULFASALAZINE
  1750. SULFASALAZINE [Suspect]
     Active Substance: SULFASALAZINE
  1751. SULFASALAZINE [Suspect]
     Active Substance: SULFASALAZINE
     Route: 058
  1752. SULFASALAZINE [Suspect]
     Active Substance: SULFASALAZINE
     Route: 058
  1753. SULFASALAZINE [Suspect]
     Active Substance: SULFASALAZINE
     Route: 058
  1754. SULFASALAZINE [Suspect]
     Active Substance: SULFASALAZINE
     Route: 058
  1755. SULFASALAZINE [Suspect]
     Active Substance: SULFASALAZINE
  1756. SULFASALAZINE [Suspect]
     Active Substance: SULFASALAZINE
  1757. SULFASALAZINE [Suspect]
     Active Substance: SULFASALAZINE
  1758. SULFASALAZINE [Suspect]
     Active Substance: SULFASALAZINE
  1759. SULFASALAZINE [Suspect]
     Active Substance: SULFASALAZINE
     Route: 058
  1760. SULFASALAZINE [Suspect]
     Active Substance: SULFASALAZINE
     Route: 058
  1761. SULFASALAZINE [Suspect]
     Active Substance: SULFASALAZINE
  1762. SULFASALAZINE [Suspect]
     Active Substance: SULFASALAZINE
  1763. SULFASALAZINE [Suspect]
     Active Substance: SULFASALAZINE
     Route: 058
  1764. SULFASALAZINE [Suspect]
     Active Substance: SULFASALAZINE
     Route: 058
  1765. SULFASALAZINE [Suspect]
     Active Substance: SULFASALAZINE
  1766. SULFASALAZINE [Suspect]
     Active Substance: SULFASALAZINE
  1767. SULFASALAZINE [Suspect]
     Active Substance: SULFASALAZINE
     Route: 058
  1768. SULFASALAZINE [Suspect]
     Active Substance: SULFASALAZINE
     Route: 058
  1769. TOCILIZUMAB [Suspect]
     Active Substance: TOCILIZUMAB
     Indication: Rheumatoid arthritis
  1770. TOCILIZUMAB [Suspect]
     Active Substance: TOCILIZUMAB
  1771. TOCILIZUMAB [Suspect]
     Active Substance: TOCILIZUMAB
     Route: 042
  1772. TOCILIZUMAB [Suspect]
     Active Substance: TOCILIZUMAB
     Route: 042
  1773. TOCILIZUMAB [Suspect]
     Active Substance: TOCILIZUMAB
     Route: 058
  1774. TOCILIZUMAB [Suspect]
     Active Substance: TOCILIZUMAB
     Route: 058
  1775. TOCILIZUMAB [Suspect]
     Active Substance: TOCILIZUMAB
  1776. TOCILIZUMAB [Suspect]
     Active Substance: TOCILIZUMAB
  1777. TOCILIZUMAB [Suspect]
     Active Substance: TOCILIZUMAB
     Route: 042
  1778. TOCILIZUMAB [Suspect]
     Active Substance: TOCILIZUMAB
  1779. TOCILIZUMAB [Suspect]
     Active Substance: TOCILIZUMAB
  1780. TOCILIZUMAB [Suspect]
     Active Substance: TOCILIZUMAB
     Route: 042
  1781. TOCILIZUMAB [Suspect]
     Active Substance: TOCILIZUMAB
     Route: 058
  1782. TOCILIZUMAB [Suspect]
     Active Substance: TOCILIZUMAB
     Route: 058
  1783. TOCILIZUMAB [Suspect]
     Active Substance: TOCILIZUMAB
  1784. TOCILIZUMAB [Suspect]
     Active Substance: TOCILIZUMAB
  1785. TOCILIZUMAB [Suspect]
     Active Substance: TOCILIZUMAB
     Route: 042
  1786. TOCILIZUMAB [Suspect]
     Active Substance: TOCILIZUMAB
  1787. TOCILIZUMAB [Suspect]
     Active Substance: TOCILIZUMAB
  1788. TOCILIZUMAB [Suspect]
     Active Substance: TOCILIZUMAB
     Route: 042
  1789. TOCILIZUMAB [Suspect]
     Active Substance: TOCILIZUMAB
     Route: 042
  1790. TOCILIZUMAB [Suspect]
     Active Substance: TOCILIZUMAB
     Route: 042
  1791. TOCILIZUMAB [Suspect]
     Active Substance: TOCILIZUMAB
  1792. TOCILIZUMAB [Suspect]
     Active Substance: TOCILIZUMAB
  1793. TOCILIZUMAB [Suspect]
     Active Substance: TOCILIZUMAB
     Route: 042
  1794. TOCILIZUMAB [Suspect]
     Active Substance: TOCILIZUMAB
  1795. TOCILIZUMAB [Suspect]
     Active Substance: TOCILIZUMAB
  1796. TOCILIZUMAB [Suspect]
     Active Substance: TOCILIZUMAB
     Route: 042
  1797. TOCILIZUMAB [Suspect]
     Active Substance: TOCILIZUMAB
     Route: 042
  1798. TOCILIZUMAB [Suspect]
     Active Substance: TOCILIZUMAB
     Route: 042
  1799. TOCILIZUMAB [Suspect]
     Active Substance: TOCILIZUMAB
  1800. TOCILIZUMAB [Suspect]
     Active Substance: TOCILIZUMAB
  1801. TOCILIZUMAB [Suspect]
     Active Substance: TOCILIZUMAB
  1802. TOCILIZUMAB [Suspect]
     Active Substance: TOCILIZUMAB
  1803. TOCILIZUMAB [Suspect]
     Active Substance: TOCILIZUMAB
     Route: 016
  1804. TOCILIZUMAB [Suspect]
     Active Substance: TOCILIZUMAB
     Route: 016
  1805. TOCILIZUMAB [Suspect]
     Active Substance: TOCILIZUMAB
     Route: 058
  1806. TOCILIZUMAB [Suspect]
     Active Substance: TOCILIZUMAB
  1807. TOCILIZUMAB [Suspect]
     Active Substance: TOCILIZUMAB
  1808. TOCILIZUMAB [Suspect]
     Active Substance: TOCILIZUMAB
     Route: 058
  1809. TOCILIZUMAB [Suspect]
     Active Substance: TOCILIZUMAB
     Dosage: 752 MILLIGRAM, QD (1 EVERY 1 DAY)
     Route: 065
  1810. TOCILIZUMAB [Suspect]
     Active Substance: TOCILIZUMAB
     Dosage: 752 MILLIGRAM, QD (1 EVERY 1 DAY)
     Route: 065
  1811. TOCILIZUMAB [Suspect]
     Active Substance: TOCILIZUMAB
     Dosage: 752 MILLIGRAM, QD (1 EVERY 1 DAY)
  1812. TOCILIZUMAB [Suspect]
     Active Substance: TOCILIZUMAB
     Dosage: 752 MILLIGRAM, QD (1 EVERY 1 DAY)
  1813. TOFACITINIB CITRATE [Suspect]
     Active Substance: TOFACITINIB CITRATE
     Indication: Rheumatoid arthritis
  1814. TOFACITINIB CITRATE [Suspect]
     Active Substance: TOFACITINIB CITRATE
  1815. TOFACITINIB CITRATE [Suspect]
     Active Substance: TOFACITINIB CITRATE
     Route: 065
  1816. TOFACITINIB CITRATE [Suspect]
     Active Substance: TOFACITINIB CITRATE
     Route: 065
  1817. TOFACITINIB CITRATE [Suspect]
     Active Substance: TOFACITINIB CITRATE
     Dosage: 5 MILLIGRAM, QW (1 EVERY 1 WEEKS)
  1818. TOFACITINIB CITRATE [Suspect]
     Active Substance: TOFACITINIB CITRATE
     Dosage: 5 MILLIGRAM, QW (1 EVERY 1 WEEKS)
  1819. TOFACITINIB CITRATE [Suspect]
     Active Substance: TOFACITINIB CITRATE
     Dosage: 5 MILLIGRAM, QW (1 EVERY 1 WEEKS)
     Route: 065
  1820. TOFACITINIB CITRATE [Suspect]
     Active Substance: TOFACITINIB CITRATE
     Dosage: 5 MILLIGRAM, QW (1 EVERY 1 WEEKS)
     Route: 065
  1821. TOFACITINIB CITRATE [Suspect]
     Active Substance: TOFACITINIB CITRATE
     Dosage: 10 MILLIGRAM, QW (1 EVERY 1 WEEKS)
  1822. TOFACITINIB CITRATE [Suspect]
     Active Substance: TOFACITINIB CITRATE
     Dosage: 10 MILLIGRAM, QW (1 EVERY 1 WEEKS)
  1823. TOFACITINIB CITRATE [Suspect]
     Active Substance: TOFACITINIB CITRATE
     Dosage: 10 MILLIGRAM, QW (1 EVERY 1 WEEKS)
     Route: 065
  1824. TOFACITINIB CITRATE [Suspect]
     Active Substance: TOFACITINIB CITRATE
     Dosage: 10 MILLIGRAM, QW (1 EVERY 1 WEEKS)
     Route: 065
  1825. TOFACITINIB CITRATE [Suspect]
     Active Substance: TOFACITINIB CITRATE
  1826. TOFACITINIB CITRATE [Suspect]
     Active Substance: TOFACITINIB CITRATE
  1827. TOFACITINIB CITRATE [Suspect]
     Active Substance: TOFACITINIB CITRATE
     Route: 065
  1828. TOFACITINIB CITRATE [Suspect]
     Active Substance: TOFACITINIB CITRATE
     Route: 065
  1829. TOFACITINIB CITRATE [Suspect]
     Active Substance: TOFACITINIB CITRATE
  1830. TOFACITINIB CITRATE [Suspect]
     Active Substance: TOFACITINIB CITRATE
     Route: 065
  1831. TOFACITINIB CITRATE [Suspect]
     Active Substance: TOFACITINIB CITRATE
  1832. TOFACITINIB CITRATE [Suspect]
     Active Substance: TOFACITINIB CITRATE
     Route: 065
  1833. TRUXIMA [Suspect]
     Active Substance: RITUXIMAB-ABBS
     Indication: Rheumatoid arthritis
  1834. TRUXIMA [Suspect]
     Active Substance: RITUXIMAB-ABBS
     Indication: Abdominal discomfort
     Route: 042
  1835. TRUXIMA [Suspect]
     Active Substance: RITUXIMAB-ABBS
     Route: 042
  1836. TRUXIMA [Suspect]
     Active Substance: RITUXIMAB-ABBS
  1837. TRUXIMA [Suspect]
     Active Substance: RITUXIMAB-ABBS
     Indication: Rheumatoid arthritis
  1838. TRUXIMA [Suspect]
     Active Substance: RITUXIMAB-ABBS
     Indication: Abdominal discomfort
     Route: 058
  1839. TRUXIMA [Suspect]
     Active Substance: RITUXIMAB-ABBS
     Route: 058
  1840. TRUXIMA [Suspect]
     Active Substance: RITUXIMAB-ABBS
  1841. VITAMIN D3 [Suspect]
     Active Substance: CHOLECALCIFEROL
     Indication: Product used for unknown indication
  1842. VITAMIN D3 [Suspect]
     Active Substance: CHOLECALCIFEROL
     Route: 065
  1843. VITAMIN D3 [Suspect]
     Active Substance: CHOLECALCIFEROL
     Route: 065
  1844. VITAMIN D3 [Suspect]
     Active Substance: CHOLECALCIFEROL
  1845. XELJANZ [Suspect]
     Active Substance: TOFACITINIB CITRATE
     Indication: Product used for unknown indication
  1846. XELJANZ [Suspect]
     Active Substance: TOFACITINIB CITRATE
  1847. XELJANZ [Suspect]
     Active Substance: TOFACITINIB CITRATE
     Route: 048
  1848. XELJANZ [Suspect]
     Active Substance: TOFACITINIB CITRATE
     Route: 048
  1849. XELJANZ [Suspect]
     Active Substance: TOFACITINIB CITRATE
  1850. XELJANZ [Suspect]
     Active Substance: TOFACITINIB CITRATE
  1851. XELJANZ [Suspect]
     Active Substance: TOFACITINIB CITRATE
     Route: 048
  1852. XELJANZ [Suspect]
     Active Substance: TOFACITINIB CITRATE
     Route: 048
  1853. XELJANZ [Suspect]
     Active Substance: TOFACITINIB CITRATE
  1854. XELJANZ [Suspect]
     Active Substance: TOFACITINIB CITRATE
     Route: 048
  1855. XELJANZ [Suspect]
     Active Substance: TOFACITINIB CITRATE
  1856. XELJANZ [Suspect]
     Active Substance: TOFACITINIB CITRATE
     Route: 048
  1857. CALCIUM GLUCONATE [Concomitant]
     Active Substance: CALCIUM GLUCONATE
  1858. CALCIUM GLUCONATE [Concomitant]
     Active Substance: CALCIUM GLUCONATE
     Route: 065
  1859. CALCIUM GLUCONATE [Concomitant]
     Active Substance: CALCIUM GLUCONATE
     Route: 065
  1860. CALCIUM GLUCONATE [Concomitant]
     Active Substance: CALCIUM GLUCONATE
  1861. CETIRIZINE HYDROCHLORIDE [Concomitant]
     Active Substance: CETIRIZINE HYDROCHLORIDE
  1862. CETIRIZINE HYDROCHLORIDE [Concomitant]
     Active Substance: CETIRIZINE HYDROCHLORIDE
  1863. CETIRIZINE HYDROCHLORIDE [Concomitant]
     Active Substance: CETIRIZINE HYDROCHLORIDE
     Route: 065
  1864. CETIRIZINE HYDROCHLORIDE [Concomitant]
     Active Substance: CETIRIZINE HYDROCHLORIDE
     Route: 065
  1865. CETIRIZINE HYDROCHLORIDE [Concomitant]
     Active Substance: CETIRIZINE HYDROCHLORIDE
  1866. CETIRIZINE HYDROCHLORIDE [Concomitant]
     Active Substance: CETIRIZINE HYDROCHLORIDE
  1867. CETIRIZINE HYDROCHLORIDE [Concomitant]
     Active Substance: CETIRIZINE HYDROCHLORIDE
     Route: 065
  1868. CETIRIZINE HYDROCHLORIDE [Concomitant]
     Active Substance: CETIRIZINE HYDROCHLORIDE
     Route: 065
  1869. CETIRIZINE HYDROCHLORIDE [Concomitant]
     Active Substance: CETIRIZINE HYDROCHLORIDE
  1870. CETIRIZINE HYDROCHLORIDE [Concomitant]
     Active Substance: CETIRIZINE HYDROCHLORIDE
     Route: 065
  1871. CETIRIZINE HYDROCHLORIDE [Concomitant]
     Active Substance: CETIRIZINE HYDROCHLORIDE
  1872. CETIRIZINE HYDROCHLORIDE [Concomitant]
     Active Substance: CETIRIZINE HYDROCHLORIDE
     Route: 065
  1873. ERGOCALCIFEROL [Concomitant]
     Active Substance: ERGOCALCIFEROL
  1874. ERGOCALCIFEROL [Concomitant]
     Active Substance: ERGOCALCIFEROL
     Route: 065
  1875. ERGOCALCIFEROL [Concomitant]
     Active Substance: ERGOCALCIFEROL
     Route: 065
  1876. ERGOCALCIFEROL [Concomitant]
     Active Substance: ERGOCALCIFEROL
  1877. GLUCOSAMINE [Concomitant]
     Active Substance: GLUCOSAMINE
  1878. GLUCOSAMINE [Concomitant]
     Active Substance: GLUCOSAMINE
     Route: 065
  1879. GLUCOSAMINE [Concomitant]
     Active Substance: GLUCOSAMINE
     Route: 065
  1880. GLUCOSAMINE [Concomitant]
     Active Substance: GLUCOSAMINE
  1881. IBUPROFEN [Concomitant]
     Active Substance: IBUPROFEN
  1882. IBUPROFEN [Concomitant]
     Active Substance: IBUPROFEN
     Route: 065
  1883. IBUPROFEN [Concomitant]
     Active Substance: IBUPROFEN
     Route: 065
  1884. IBUPROFEN [Concomitant]
     Active Substance: IBUPROFEN
  1885. LANSOPRAZOLE [Concomitant]
     Active Substance: LANSOPRAZOLE
  1886. LANSOPRAZOLE [Concomitant]
     Active Substance: LANSOPRAZOLE
     Route: 065
  1887. LANSOPRAZOLE [Concomitant]
     Active Substance: LANSOPRAZOLE
     Route: 065
  1888. LANSOPRAZOLE [Concomitant]
     Active Substance: LANSOPRAZOLE
  1889. LORAZEPAM [Concomitant]
     Active Substance: LORAZEPAM
  1890. LORAZEPAM [Concomitant]
     Active Substance: LORAZEPAM
     Route: 065
  1891. LORAZEPAM [Concomitant]
     Active Substance: LORAZEPAM
     Route: 065
  1892. LORAZEPAM [Concomitant]
     Active Substance: LORAZEPAM
  1893. QUETIAPINE FUMARATE [Concomitant]
     Active Substance: QUETIAPINE FUMARATE
  1894. QUETIAPINE FUMARATE [Concomitant]
     Active Substance: QUETIAPINE FUMARATE
     Route: 065
  1895. QUETIAPINE FUMARATE [Concomitant]
     Active Substance: QUETIAPINE FUMARATE
     Route: 065
  1896. QUETIAPINE FUMARATE [Concomitant]
     Active Substance: QUETIAPINE FUMARATE
  1897. FISH OIL [Concomitant]
     Active Substance: FISH OIL
  1898. FISH OIL [Concomitant]
     Active Substance: FISH OIL
     Route: 065
  1899. FISH OIL [Concomitant]
     Active Substance: FISH OIL
     Route: 065
  1900. FISH OIL [Concomitant]
     Active Substance: FISH OIL
  1901. TYLENOL [Concomitant]
     Active Substance: ACETAMINOPHEN
  1902. TYLENOL [Concomitant]
     Active Substance: ACETAMINOPHEN
     Route: 065
  1903. TYLENOL [Concomitant]
     Active Substance: ACETAMINOPHEN
     Route: 065
  1904. TYLENOL [Concomitant]
     Active Substance: ACETAMINOPHEN
  1905. TYLENOL WITH CODEINE [Concomitant]
     Active Substance: ACETAMINOPHEN\CODEINE PHOSPHATE
  1906. TYLENOL WITH CODEINE [Concomitant]
     Active Substance: ACETAMINOPHEN\CODEINE PHOSPHATE
     Route: 065
  1907. TYLENOL WITH CODEINE [Concomitant]
     Active Substance: ACETAMINOPHEN\CODEINE PHOSPHATE
     Route: 065
  1908. TYLENOL WITH CODEINE [Concomitant]
     Active Substance: ACETAMINOPHEN\CODEINE PHOSPHATE
  1909. VITAMIN C [Concomitant]
     Active Substance: ASCORBIC ACID
  1910. VITAMIN C [Concomitant]
     Active Substance: ASCORBIC ACID
     Route: 065
  1911. VITAMIN C [Concomitant]
     Active Substance: ASCORBIC ACID
     Route: 065
  1912. VITAMIN C [Concomitant]
     Active Substance: ASCORBIC ACID
  1913. ZOPICLONE [Concomitant]
     Active Substance: ZOPICLONE
  1914. ZOPICLONE [Concomitant]
     Active Substance: ZOPICLONE
     Route: 065
  1915. ZOPICLONE [Concomitant]
     Active Substance: ZOPICLONE
     Route: 065
  1916. ZOPICLONE [Concomitant]
     Active Substance: ZOPICLONE
  1917. DICLOFENAC SODIUM [Suspect]
     Active Substance: DICLOFENAC SODIUM
     Indication: Product used for unknown indication
  1918. DICLOFENAC SODIUM [Suspect]
     Active Substance: DICLOFENAC SODIUM
     Route: 065
  1919. DICLOFENAC SODIUM [Suspect]
     Active Substance: DICLOFENAC SODIUM
     Route: 065
  1920. DICLOFENAC SODIUM [Suspect]
     Active Substance: DICLOFENAC SODIUM
  1921. CERTOLIZUMAB PEGOL [Suspect]
     Active Substance: CERTOLIZUMAB PEGOL
     Indication: Product used for unknown indication
  1922. CERTOLIZUMAB PEGOL [Suspect]
     Active Substance: CERTOLIZUMAB PEGOL
  1923. CERTOLIZUMAB PEGOL [Suspect]
     Active Substance: CERTOLIZUMAB PEGOL
     Route: 065
  1924. CERTOLIZUMAB PEGOL [Suspect]
     Active Substance: CERTOLIZUMAB PEGOL
     Route: 065
  1925. CERTOLIZUMAB PEGOL [Suspect]
     Active Substance: CERTOLIZUMAB PEGOL
  1926. CERTOLIZUMAB PEGOL [Suspect]
     Active Substance: CERTOLIZUMAB PEGOL
  1927. CERTOLIZUMAB PEGOL [Suspect]
     Active Substance: CERTOLIZUMAB PEGOL
     Route: 005
  1928. CERTOLIZUMAB PEGOL [Suspect]
     Active Substance: CERTOLIZUMAB PEGOL
     Route: 005
  1929. CERTOLIZUMAB PEGOL [Suspect]
     Active Substance: CERTOLIZUMAB PEGOL
  1930. CERTOLIZUMAB PEGOL [Suspect]
     Active Substance: CERTOLIZUMAB PEGOL
     Route: 058
  1931. CERTOLIZUMAB PEGOL [Suspect]
     Active Substance: CERTOLIZUMAB PEGOL
  1932. CERTOLIZUMAB PEGOL [Suspect]
     Active Substance: CERTOLIZUMAB PEGOL
     Route: 058
  1933. CYCLOBENZAPRINE [Suspect]
     Active Substance: CYCLOBENZAPRINE
     Indication: Product used for unknown indication
     Dosage: 1 DOSAGE FORM, QD (1 EVERY 1 DAYS)
  1934. CYCLOBENZAPRINE [Suspect]
     Active Substance: CYCLOBENZAPRINE
     Dosage: 1 DOSAGE FORM, QD (1 EVERY 1 DAYS)
     Route: 065
  1935. CYCLOBENZAPRINE [Suspect]
     Active Substance: CYCLOBENZAPRINE
     Dosage: 1 DOSAGE FORM, QD (1 EVERY 1 DAYS)
     Route: 065
  1936. CYCLOBENZAPRINE [Suspect]
     Active Substance: CYCLOBENZAPRINE
     Dosage: 1 DOSAGE FORM, QD (1 EVERY 1 DAYS)
  1937. DOMPERIDONE MALEATE [Suspect]
     Active Substance: DOMPERIDONE MALEATE
     Indication: Product used for unknown indication
  1938. DOMPERIDONE MALEATE [Suspect]
     Active Substance: DOMPERIDONE MALEATE
     Route: 065
  1939. DOMPERIDONE MALEATE [Suspect]
     Active Substance: DOMPERIDONE MALEATE
     Route: 065
  1940. DOMPERIDONE MALEATE [Suspect]
     Active Substance: DOMPERIDONE MALEATE
  1941. ERENUMAB [Suspect]
     Active Substance: ERENUMAB
     Indication: Migraine
  1942. ERENUMAB [Suspect]
     Active Substance: ERENUMAB
     Route: 065
  1943. ERENUMAB [Suspect]
     Active Substance: ERENUMAB
     Route: 065
  1944. ERENUMAB [Suspect]
     Active Substance: ERENUMAB
  1945. AIMOVIG [Suspect]
     Active Substance: ERENUMAB-AOOE
     Indication: Migraine
  1946. AIMOVIG [Suspect]
     Active Substance: ERENUMAB-AOOE
     Route: 065
  1947. AIMOVIG [Suspect]
     Active Substance: ERENUMAB-AOOE
     Route: 065
  1948. AIMOVIG [Suspect]
     Active Substance: ERENUMAB-AOOE
  1949. FINACEA [Suspect]
     Active Substance: AZELAIC ACID
     Indication: Product used for unknown indication
  1950. FINACEA [Suspect]
     Active Substance: AZELAIC ACID
     Route: 065
  1951. FINACEA [Suspect]
     Active Substance: AZELAIC ACID
     Route: 065
  1952. FINACEA [Suspect]
     Active Substance: AZELAIC ACID
  1953. FLUMETHASONE [Suspect]
     Active Substance: FLUMETHASONE
     Indication: Product used for unknown indication
  1954. FLUMETHASONE [Suspect]
     Active Substance: FLUMETHASONE
     Route: 065
  1955. FLUMETHASONE [Suspect]
     Active Substance: FLUMETHASONE
     Route: 065
  1956. FLUMETHASONE [Suspect]
     Active Substance: FLUMETHASONE
  1957. GOLD [Suspect]
     Active Substance: GOLD
     Indication: Product used for unknown indication
  1958. GOLD [Suspect]
     Active Substance: GOLD
     Route: 065
  1959. GOLD [Suspect]
     Active Substance: GOLD
     Route: 065
  1960. GOLD [Suspect]
     Active Substance: GOLD
  1961. GOLD SODIUM THIOMALATE [Suspect]
     Active Substance: GOLD SODIUM THIOMALATE
     Indication: Product used for unknown indication
  1962. GOLD SODIUM THIOMALATE [Suspect]
     Active Substance: GOLD SODIUM THIOMALATE
     Route: 030
  1963. GOLD SODIUM THIOMALATE [Suspect]
     Active Substance: GOLD SODIUM THIOMALATE
     Route: 030
  1964. GOLD SODIUM THIOMALATE [Suspect]
     Active Substance: GOLD SODIUM THIOMALATE
  1965. HYDROMORPHONE [Suspect]
     Active Substance: HYDROMORPHONE
     Indication: Product used for unknown indication
  1966. HYDROMORPHONE [Suspect]
     Active Substance: HYDROMORPHONE
     Route: 065
  1967. HYDROMORPHONE [Suspect]
     Active Substance: HYDROMORPHONE
     Route: 065
  1968. HYDROMORPHONE [Suspect]
     Active Substance: HYDROMORPHONE
  1969. LAMICTAL [Suspect]
     Active Substance: LAMOTRIGINE
     Indication: Product used for unknown indication
  1970. LAMICTAL [Suspect]
     Active Substance: LAMOTRIGINE
  1971. LAMICTAL [Suspect]
     Active Substance: LAMOTRIGINE
     Route: 048
  1972. LAMICTAL [Suspect]
     Active Substance: LAMOTRIGINE
     Route: 048
  1973. LAMICTAL [Suspect]
     Active Substance: LAMOTRIGINE
  1974. LAMICTAL [Suspect]
     Active Substance: LAMOTRIGINE
  1975. LAMICTAL [Suspect]
     Active Substance: LAMOTRIGINE
     Route: 048
  1976. LAMICTAL [Suspect]
     Active Substance: LAMOTRIGINE
     Route: 048
  1977. LAMICTAL [Suspect]
     Active Substance: LAMOTRIGINE
  1978. LAMICTAL [Suspect]
     Active Substance: LAMOTRIGINE
     Route: 048
  1979. LAMICTAL [Suspect]
     Active Substance: LAMOTRIGINE
  1980. LAMICTAL [Suspect]
     Active Substance: LAMOTRIGINE
     Route: 048
  1981. LAMOTRIGINE [Suspect]
     Active Substance: LAMOTRIGINE
     Indication: Product used for unknown indication
     Dosage: 25 MILLIGRAM, BID (2 EVERY 1 DAY)
  1982. LAMOTRIGINE [Suspect]
     Active Substance: LAMOTRIGINE
     Dosage: 25 MILLIGRAM, BID (2 EVERY 1 DAY)
  1983. LAMOTRIGINE [Suspect]
     Active Substance: LAMOTRIGINE
     Dosage: 25 MILLIGRAM, BID (2 EVERY 1 DAY)
     Route: 048
  1984. LAMOTRIGINE [Suspect]
     Active Substance: LAMOTRIGINE
     Dosage: 25 MILLIGRAM, BID (2 EVERY 1 DAY)
     Route: 048
  1985. LAMOTRIGINE [Suspect]
     Active Substance: LAMOTRIGINE
     Dosage: 50 MILLIGRAM, BID (2 EVERY 1 DAY)
  1986. LAMOTRIGINE [Suspect]
     Active Substance: LAMOTRIGINE
     Dosage: 50 MILLIGRAM, BID (2 EVERY 1 DAY)
  1987. LAMOTRIGINE [Suspect]
     Active Substance: LAMOTRIGINE
     Dosage: 50 MILLIGRAM, BID (2 EVERY 1 DAY)
     Route: 048
  1988. LAMOTRIGINE [Suspect]
     Active Substance: LAMOTRIGINE
     Dosage: 50 MILLIGRAM, BID (2 EVERY 1 DAY)
     Route: 048
  1989. LAMOTRIGINE [Suspect]
     Active Substance: LAMOTRIGINE
     Dosage: 25 MILLIGRAM, QD (1 EVERY 1 DAYS)
  1990. LAMOTRIGINE [Suspect]
     Active Substance: LAMOTRIGINE
     Dosage: 25 MILLIGRAM, QD (1 EVERY 1 DAYS)
     Route: 048
  1991. LAMOTRIGINE [Suspect]
     Active Substance: LAMOTRIGINE
     Dosage: 25 MILLIGRAM, QD (1 EVERY 1 DAYS)
  1992. LAMOTRIGINE [Suspect]
     Active Substance: LAMOTRIGINE
     Dosage: 25 MILLIGRAM, QD (1 EVERY 1 DAYS)
     Route: 048
  1993. MYRBETRIQ [Suspect]
     Active Substance: MIRABEGRON
     Indication: Product used for unknown indication
     Dosage: 1 DOSAGE FORM, QD (1 EVERY 1 DAYS)
  1994. MYRBETRIQ [Suspect]
     Active Substance: MIRABEGRON
     Dosage: 1 DOSAGE FORM, QD (1 EVERY 1 DAYS)
  1995. MYRBETRIQ [Suspect]
     Active Substance: MIRABEGRON
     Dosage: 1 DOSAGE FORM, QD (1 EVERY 1 DAYS)
     Route: 048
  1996. MYRBETRIQ [Suspect]
     Active Substance: MIRABEGRON
     Dosage: 1 DOSAGE FORM, QD (1 EVERY 1 DAYS)
     Route: 048
  1997. MYRBETRIQ [Suspect]
     Active Substance: MIRABEGRON
     Dosage: 1 DOSAGE FORM, QD (1 EVERY 1 DAYS)
  1998. MYRBETRIQ [Suspect]
     Active Substance: MIRABEGRON
     Dosage: 1 DOSAGE FORM, QD (1 EVERY 1 DAYS)
  1999. MYRBETRIQ [Suspect]
     Active Substance: MIRABEGRON
     Dosage: 1 DOSAGE FORM, QD (1 EVERY 1 DAYS)
     Route: 065
  2000. MYRBETRIQ [Suspect]
     Active Substance: MIRABEGRON
     Dosage: 1 DOSAGE FORM, QD (1 EVERY 1 DAYS)
     Route: 065
  2001. LEVOMILNACIPRAN [Suspect]
     Active Substance: LEVOMILNACIPRAN
     Indication: Product used for unknown indication
  2002. LEVOMILNACIPRAN [Suspect]
     Active Substance: LEVOMILNACIPRAN
     Route: 065
  2003. LEVOMILNACIPRAN [Suspect]
     Active Substance: LEVOMILNACIPRAN
     Route: 065
  2004. LEVOMILNACIPRAN [Suspect]
     Active Substance: LEVOMILNACIPRAN
  2005. MAGNESIUM CITRATE [Suspect]
     Active Substance: MAGNESIUM CITRATE
     Indication: Product used for unknown indication
  2006. MAGNESIUM CITRATE [Suspect]
     Active Substance: MAGNESIUM CITRATE
     Route: 065
  2007. MAGNESIUM CITRATE [Suspect]
     Active Substance: MAGNESIUM CITRATE
     Route: 065
  2008. MAGNESIUM CITRATE [Suspect]
     Active Substance: MAGNESIUM CITRATE
  2009. NUCALA [Suspect]
     Active Substance: MEPOLIZUMAB
     Indication: Product used for unknown indication
  2010. NUCALA [Suspect]
     Active Substance: MEPOLIZUMAB
     Route: 065
  2011. NUCALA [Suspect]
     Active Substance: MEPOLIZUMAB
     Route: 065
  2012. NUCALA [Suspect]
     Active Substance: MEPOLIZUMAB
  2013. NAPROXEN [Suspect]
     Active Substance: NAPROXEN
     Indication: Product used for unknown indication
  2014. NAPROXEN [Suspect]
     Active Substance: NAPROXEN
     Route: 065
  2015. NAPROXEN [Suspect]
     Active Substance: NAPROXEN
     Route: 065
  2016. NAPROXEN [Suspect]
     Active Substance: NAPROXEN

REACTIONS (192)
  - Abdominal discomfort [Fatal]
  - Abdominal pain upper [Fatal]
  - Abdominal pain [Fatal]
  - Adjustment disorder with depressed mood [Fatal]
  - Adverse drug reaction [Fatal]
  - Alopecia [Fatal]
  - Adverse event [Fatal]
  - Anti-cyclic citrullinated peptide antibody positive [Fatal]
  - Arthralgia [Fatal]
  - Anxiety [Fatal]
  - Arthropathy [Fatal]
  - Asthenia [Fatal]
  - Asthma [Fatal]
  - Autoimmune disorder [Fatal]
  - Back injury [Fatal]
  - Blepharospasm [Fatal]
  - Blister [Fatal]
  - Blood cholesterol increased [Fatal]
  - Bone erosion [Fatal]
  - Breast cancer stage II [Fatal]
  - Breast cancer stage III [Fatal]
  - Bursitis [Fatal]
  - C-reactive protein increased [Fatal]
  - Chest pain [Fatal]
  - Condition aggravated [Fatal]
  - Confusional state [Fatal]
  - Contraindicated product administered [Fatal]
  - Crohn^s disease [Fatal]
  - Contusion [Fatal]
  - Decreased appetite [Fatal]
  - Deep vein thrombosis postoperative [Fatal]
  - Delirium [Fatal]
  - Depression [Fatal]
  - Diarrhoea [Fatal]
  - Disability [Fatal]
  - Discomfort [Fatal]
  - Dislocation of vertebra [Fatal]
  - Dizziness [Fatal]
  - Drug hypersensitivity [Fatal]
  - Drug ineffective [Fatal]
  - Drug intolerance [Fatal]
  - Drug tolerance [Fatal]
  - Dry mouth [Fatal]
  - Duodenal ulcer perforation [Fatal]
  - Dyspepsia [Fatal]
  - Dyspnoea [Fatal]
  - Back disorder [Fatal]
  - Colitis ulcerative [Fatal]
  - Drug-induced liver injury [Fatal]
  - Exostosis [Fatal]
  - Exposure during pregnancy [Fatal]
  - Ear pain [Fatal]
  - Epilepsy [Fatal]
  - Facet joint syndrome [Fatal]
  - Fatigue [Fatal]
  - Fibromyalgia [Fatal]
  - Folliculitis [Fatal]
  - Gait disturbance [Fatal]
  - Gait inability [Fatal]
  - Gastrointestinal disorder [Fatal]
  - Gastrooesophageal reflux disease [Fatal]
  - General physical health deterioration [Fatal]
  - Glossodynia [Fatal]
  - Grip strength decreased [Fatal]
  - Hand deformity [Fatal]
  - Headache [Fatal]
  - Helicobacter infection [Fatal]
  - Hepatic cirrhosis [Fatal]
  - Hepatic enzyme increased [Fatal]
  - Hypercholesterolaemia [Fatal]
  - Hypersensitivity [Fatal]
  - Hypertension [Fatal]
  - Hypoaesthesia [Fatal]
  - Ill-defined disorder [Fatal]
  - Impaired healing [Fatal]
  - Incorrect route of product administration [Fatal]
  - Infection [Fatal]
  - Inflammation [Fatal]
  - Infusion related reaction [Fatal]
  - Infusion site reaction [Fatal]
  - Injury [Fatal]
  - Insomnia [Fatal]
  - Intentional product use issue [Fatal]
  - Irritable bowel syndrome [Fatal]
  - Joint range of motion decreased [Fatal]
  - Joint stiffness [Fatal]
  - Joint swelling [Fatal]
  - Laryngitis [Fatal]
  - Lip dry [Fatal]
  - Live birth [Fatal]
  - Liver disorder [Fatal]
  - Liver injury [Fatal]
  - Liver function test increased [Fatal]
  - Lower limb fracture [Fatal]
  - Lower respiratory tract infection [Fatal]
  - Lung disorder [Fatal]
  - Lupus-like syndrome [Fatal]
  - Malaise [Fatal]
  - Maternal exposure during pregnancy [Fatal]
  - Medication error [Fatal]
  - Memory impairment [Fatal]
  - Migraine [Fatal]
  - Mobility decreased [Fatal]
  - Muscle injury [Fatal]
  - Muscle spasms [Fatal]
  - Muscular weakness [Fatal]
  - Musculoskeletal pain [Fatal]
  - Musculoskeletal stiffness [Fatal]
  - Nail disorder [Fatal]
  - Nasopharyngitis [Fatal]
  - Nausea [Fatal]
  - Neck pain [Fatal]
  - Night sweats [Fatal]
  - Obesity [Fatal]
  - Oedema [Fatal]
  - Onychomadesis [Fatal]
  - Osteoarthritis [Fatal]
  - Pain [Fatal]
  - Pain in extremity [Fatal]
  - Paraesthesia [Fatal]
  - Pemphigus [Fatal]
  - Pericarditis [Fatal]
  - Peripheral swelling [Fatal]
  - Peripheral venous disease [Fatal]
  - Pneumonia [Fatal]
  - Prescribed overdose [Fatal]
  - Psoriatic arthropathy [Fatal]
  - Product quality issue [Fatal]
  - Pulmonary fibrosis [Fatal]
  - Product use issue [Fatal]
  - Pyrexia [Fatal]
  - Rash [Fatal]
  - Red blood cell sedimentation rate increased [Fatal]
  - Respiratory disorder [Fatal]
  - Rheumatic fever [Fatal]
  - Rheumatoid arthritis [Fatal]
  - Rheumatoid factor positive [Fatal]
  - Sciatica [Fatal]
  - Sinusitis [Fatal]
  - Sleep disorder [Fatal]
  - Sleep disorder due to general medical condition, insomnia type [Fatal]
  - Stomatitis [Fatal]
  - Swelling [Fatal]
  - Swollen joint count increased [Fatal]
  - Synovitis [Fatal]
  - Systemic lupus erythematosus [Fatal]
  - Taste disorder [Fatal]
  - Therapeutic product effect incomplete [Fatal]
  - Therapeutic product effect decreased [Fatal]
  - Therapy non-responder [Fatal]
  - Treatment failure [Fatal]
  - Treatment noncompliance [Fatal]
  - Ulcer haemorrhage [Fatal]
  - Feeling hot [Fatal]
  - Fluid retention [Fatal]
  - Foot deformity [Fatal]
  - Frequent bowel movements [Fatal]
  - General symptom [Fatal]
  - Hip arthroplasty [Fatal]
  - Ear infection [Fatal]
  - Joint dislocation [Fatal]
  - Knee arthroplasty [Fatal]
  - Myositis [Fatal]
  - Oedema peripheral [Fatal]
  - Osteoporosis [Fatal]
  - Porphyria acute [Fatal]
  - Pruritus [Fatal]
  - Psoriasis [Fatal]
  - Pustular psoriasis [Fatal]
  - Rash vesicular [Fatal]
  - Retinitis [Fatal]
  - Road traffic accident [Fatal]
  - Subcutaneous drug absorption impaired [Fatal]
  - Tachycardia [Fatal]
  - Thrombocytopenia [Fatal]
  - X-ray abnormal [Fatal]
  - Maternal exposure timing unspecified [Fatal]
  - Product use in unapproved indication [Fatal]
  - Amnesia [Fatal]
  - Off label use [Fatal]
  - Prescribed underdose [Fatal]
  - Type 2 diabetes mellitus [Fatal]
  - Upper respiratory tract infection [Fatal]
  - Urticaria [Fatal]
  - Visual impairment [Fatal]
  - Vomiting [Fatal]
  - Walking aid user [Fatal]
  - Weight decreased [Fatal]
  - Weight increased [Fatal]
  - Wheezing [Fatal]
  - Wound [Fatal]
  - Wound infection [Fatal]
